FAERS Safety Report 25812213 (Version 6)
Quarter: 2025Q3

REPORT INFORMATION
  Report Type: Spontaneous
  Country: CA (occurrence: CA)
  Receive Date: 20250917
  Receipt Date: 20250926
  Transmission Date: 20251021
  Serious: Yes (Other)
  Sender: CELLTRION
  Company Number: CA-CELLTRION INC.-2022CA022256

PATIENT

DRUGS (2209)
  1. ADALIMUMAB [Suspect]
     Active Substance: ADALIMUMAB
     Indication: Crohn^s disease
     Route: 065
  2. ADALIMUMAB [Suspect]
     Active Substance: ADALIMUMAB
     Indication: Deep vein thrombosis
     Route: 058
  3. ADALIMUMAB [Suspect]
     Active Substance: ADALIMUMAB
     Indication: Colitis ulcerative
     Route: 048
  4. ADALIMUMAB [Suspect]
     Active Substance: ADALIMUMAB
  5. ADALIMUMAB [Suspect]
     Active Substance: ADALIMUMAB
     Route: 058
  6. ADALIMUMAB [Suspect]
     Active Substance: ADALIMUMAB
     Route: 042
  7. ADALIMUMAB [Suspect]
     Active Substance: ADALIMUMAB
     Route: 065
  8. ADALIMUMAB [Suspect]
     Active Substance: ADALIMUMAB
     Route: 065
  9. ADALIMUMAB [Suspect]
     Active Substance: ADALIMUMAB
     Route: 065
  10. ADALIMUMAB [Suspect]
     Active Substance: ADALIMUMAB
     Route: 065
  11. ADALIMUMAB [Suspect]
     Active Substance: ADALIMUMAB
     Route: 065
  12. ADALIMUMAB [Suspect]
     Active Substance: ADALIMUMAB
     Route: 065
  13. ADALIMUMAB [Suspect]
     Active Substance: ADALIMUMAB
     Route: 048
  14. ADALIMUMAB [Suspect]
     Active Substance: ADALIMUMAB
     Route: 058
  15. ADALIMUMAB [Suspect]
     Active Substance: ADALIMUMAB
     Route: 058
  16. ADALIMUMAB [Suspect]
     Active Substance: ADALIMUMAB
  17. ADALIMUMAB [Suspect]
     Active Substance: ADALIMUMAB
  18. ADALIMUMAB [Suspect]
     Active Substance: ADALIMUMAB
  19. ADALIMUMAB [Suspect]
     Active Substance: ADALIMUMAB
  20. ADALIMUMAB [Suspect]
     Active Substance: ADALIMUMAB
     Route: 048
  21. ADALIMUMAB [Suspect]
     Active Substance: ADALIMUMAB
     Route: 048
  22. ADALIMUMAB [Suspect]
     Active Substance: ADALIMUMAB
     Route: 048
  23. ADALIMUMAB [Suspect]
     Active Substance: ADALIMUMAB
     Route: 058
  24. ADALIMUMAB [Suspect]
     Active Substance: ADALIMUMAB
     Route: 048
  25. ADALIMUMAB [Suspect]
     Active Substance: ADALIMUMAB
     Route: 065
  26. ADALIMUMAB [Suspect]
     Active Substance: ADALIMUMAB
     Route: 065
  27. ADALIMUMAB [Suspect]
     Active Substance: ADALIMUMAB
     Route: 065
  28. ADALIMUMAB [Suspect]
     Active Substance: ADALIMUMAB
     Route: 058
  29. ADALIMUMAB [Suspect]
     Active Substance: ADALIMUMAB
     Route: 058
  30. ADALIMUMAB [Suspect]
     Active Substance: ADALIMUMAB
     Route: 058
  31. ADALIMUMAB [Suspect]
     Active Substance: ADALIMUMAB
     Route: 048
  32. ADALIMUMAB [Suspect]
     Active Substance: ADALIMUMAB
     Route: 048
  33. ADALIMUMAB [Suspect]
     Active Substance: ADALIMUMAB
  34. ADALIMUMAB [Suspect]
     Active Substance: ADALIMUMAB
  35. ADALIMUMAB [Suspect]
     Active Substance: ADALIMUMAB
     Route: 065
  36. ADALIMUMAB [Suspect]
     Active Substance: ADALIMUMAB
     Route: 058
  37. ADALIMUMAB [Suspect]
     Active Substance: ADALIMUMAB
     Route: 065
  38. ADALIMUMAB [Suspect]
     Active Substance: ADALIMUMAB
     Route: 065
  39. INFLIXIMAB [Suspect]
     Active Substance: INFLIXIMAB
     Indication: Crohn^s disease
     Route: 048
  40. INFLIXIMAB [Suspect]
     Active Substance: INFLIXIMAB
     Indication: Colitis ulcerative
     Route: 048
  41. INFLIXIMAB [Suspect]
     Active Substance: INFLIXIMAB
     Route: 042
  42. INFLIXIMAB [Suspect]
     Active Substance: INFLIXIMAB
     Route: 048
  43. INFLIXIMAB [Suspect]
     Active Substance: INFLIXIMAB
     Route: 048
  44. INFLIXIMAB [Suspect]
     Active Substance: INFLIXIMAB
     Route: 042
  45. INFLIXIMAB [Suspect]
     Active Substance: INFLIXIMAB
     Route: 042
  46. INFLIXIMAB [Suspect]
     Active Substance: INFLIXIMAB
     Route: 065
  47. INFLIXIMAB [Suspect]
     Active Substance: INFLIXIMAB
     Route: 065
  48. INFLIXIMAB [Suspect]
     Active Substance: INFLIXIMAB
     Route: 048
  49. INFLIXIMAB [Suspect]
     Active Substance: INFLIXIMAB
     Route: 042
  50. INFLIXIMAB [Suspect]
     Active Substance: INFLIXIMAB
     Route: 065
  51. INFLIXIMAB [Suspect]
     Active Substance: INFLIXIMAB
     Route: 048
  52. INFLIXIMAB [Suspect]
     Active Substance: INFLIXIMAB
     Route: 042
  53. INFLIXIMAB [Suspect]
     Active Substance: INFLIXIMAB
     Route: 065
  54. INFLIXIMAB [Suspect]
     Active Substance: INFLIXIMAB
     Route: 065
  55. INFLIXIMAB [Suspect]
     Active Substance: INFLIXIMAB
     Route: 065
  56. INFLIXIMAB [Suspect]
     Active Substance: INFLIXIMAB
     Route: 042
  57. INFLIXIMAB [Suspect]
     Active Substance: INFLIXIMAB
     Route: 042
  58. INFLIXIMAB [Suspect]
     Active Substance: INFLIXIMAB
     Route: 065
  59. INFLIXIMAB [Suspect]
     Active Substance: INFLIXIMAB
     Route: 065
  60. INFLIXIMAB [Suspect]
     Active Substance: INFLIXIMAB
     Route: 065
  61. INFLIXIMAB [Suspect]
     Active Substance: INFLIXIMAB
     Route: 065
  62. INFLIXIMAB [Suspect]
     Active Substance: INFLIXIMAB
     Route: 042
  63. ASACOL [Suspect]
     Active Substance: MESALAMINE
     Indication: Colitis ulcerative
     Route: 065
  64. ASACOL [Suspect]
     Active Substance: MESALAMINE
     Route: 065
  65. ASACOL [Suspect]
     Active Substance: MESALAMINE
     Route: 065
  66. ASACOL [Suspect]
     Active Substance: MESALAMINE
     Route: 065
  67. ASACOL [Suspect]
     Active Substance: MESALAMINE
     Route: 065
  68. ASACOL [Suspect]
     Active Substance: MESALAMINE
     Route: 065
  69. ASACOL [Suspect]
     Active Substance: MESALAMINE
     Route: 065
  70. ASACOL [Suspect]
     Active Substance: MESALAMINE
     Route: 065
  71. ASACOL [Suspect]
     Active Substance: MESALAMINE
     Route: 065
  72. ASACOL [Suspect]
     Active Substance: MESALAMINE
     Route: 065
  73. ASACOL [Suspect]
     Active Substance: MESALAMINE
     Route: 065
  74. ASACOL [Suspect]
     Active Substance: MESALAMINE
     Route: 065
  75. ASACOL [Suspect]
     Active Substance: MESALAMINE
     Route: 065
  76. ASACOL [Suspect]
     Active Substance: MESALAMINE
     Route: 065
  77. ASACOL [Suspect]
     Active Substance: MESALAMINE
     Route: 065
  78. ASACOL [Suspect]
     Active Substance: MESALAMINE
     Route: 065
  79. ASACOL [Suspect]
     Active Substance: MESALAMINE
     Route: 065
  80. ASACOL [Suspect]
     Active Substance: MESALAMINE
     Route: 065
  81. ASACOL [Suspect]
     Active Substance: MESALAMINE
     Route: 065
  82. ASACOL [Suspect]
     Active Substance: MESALAMINE
     Route: 065
  83. ASACOL [Suspect]
     Active Substance: MESALAMINE
     Route: 065
  84. ASACOL [Suspect]
     Active Substance: MESALAMINE
     Route: 065
  85. ASACOL [Suspect]
     Active Substance: MESALAMINE
     Route: 065
  86. ASACOL [Suspect]
     Active Substance: MESALAMINE
     Route: 065
  87. ASACOL [Suspect]
     Active Substance: MESALAMINE
     Route: 065
  88. ASACOL [Suspect]
     Active Substance: MESALAMINE
     Route: 065
  89. ASACOL [Suspect]
     Active Substance: MESALAMINE
     Route: 065
  90. ASACOL [Suspect]
     Active Substance: MESALAMINE
     Route: 065
  91. ASACOL [Suspect]
     Active Substance: MESALAMINE
     Route: 065
  92. ASACOL [Suspect]
     Active Substance: MESALAMINE
     Route: 065
  93. ASACOL [Suspect]
     Active Substance: MESALAMINE
     Route: 065
  94. ASACOL [Suspect]
     Active Substance: MESALAMINE
     Route: 065
  95. ASACOL [Suspect]
     Active Substance: MESALAMINE
     Indication: Colitis ulcerative
     Route: 065
  96. ASACOL [Suspect]
     Active Substance: MESALAMINE
     Route: 065
  97. ASACOL [Suspect]
     Active Substance: MESALAMINE
     Route: 065
  98. ASACOL [Suspect]
     Active Substance: MESALAMINE
     Route: 065
  99. ASACOL [Suspect]
     Active Substance: MESALAMINE
     Route: 065
  100. ASACOL [Suspect]
     Active Substance: MESALAMINE
     Route: 065
  101. ASACOL [Suspect]
     Active Substance: MESALAMINE
     Route: 065
  102. ASACOL [Suspect]
     Active Substance: MESALAMINE
     Route: 065
  103. ASACOL [Suspect]
     Active Substance: MESALAMINE
     Route: 065
  104. ASACOL [Suspect]
     Active Substance: MESALAMINE
     Route: 065
  105. ASACOL [Suspect]
     Active Substance: MESALAMINE
     Route: 065
  106. ASACOL [Suspect]
     Active Substance: MESALAMINE
     Route: 065
  107. ASACOL [Suspect]
     Active Substance: MESALAMINE
     Route: 065
  108. ASACOL [Suspect]
     Active Substance: MESALAMINE
     Route: 065
  109. ASACOL [Suspect]
     Active Substance: MESALAMINE
     Route: 065
  110. ASACOL [Suspect]
     Active Substance: MESALAMINE
     Route: 065
  111. ASACOL [Suspect]
     Active Substance: MESALAMINE
     Route: 065
  112. ASACOL [Suspect]
     Active Substance: MESALAMINE
     Route: 065
  113. ASACOL [Suspect]
     Active Substance: MESALAMINE
     Route: 065
  114. ASACOL [Suspect]
     Active Substance: MESALAMINE
     Route: 065
  115. ASACOL [Suspect]
     Active Substance: MESALAMINE
     Route: 065
  116. ASACOL [Suspect]
     Active Substance: MESALAMINE
     Route: 065
  117. ASACOL [Suspect]
     Active Substance: MESALAMINE
     Route: 065
  118. ASACOL [Suspect]
     Active Substance: MESALAMINE
     Route: 065
  119. ASACOL [Suspect]
     Active Substance: MESALAMINE
     Route: 065
  120. ASACOL [Suspect]
     Active Substance: MESALAMINE
     Route: 065
  121. ASACOL [Suspect]
     Active Substance: MESALAMINE
     Route: 048
  122. ASACOL [Suspect]
     Active Substance: MESALAMINE
     Route: 065
  123. ASACOL [Suspect]
     Active Substance: MESALAMINE
     Route: 065
  124. ASACOL [Suspect]
     Active Substance: MESALAMINE
     Route: 065
  125. ASACOL [Suspect]
     Active Substance: MESALAMINE
     Route: 065
  126. ASACOL [Suspect]
     Active Substance: MESALAMINE
     Route: 065
  127. ASACOL [Suspect]
     Active Substance: MESALAMINE
     Route: 065
  128. ASACOL [Suspect]
     Active Substance: MESALAMINE
     Route: 065
  129. ASACOL [Suspect]
     Active Substance: MESALAMINE
     Route: 065
  130. ASACOL [Suspect]
     Active Substance: MESALAMINE
     Route: 065
  131. ASACOL [Suspect]
     Active Substance: MESALAMINE
     Route: 065
  132. ASACOL [Suspect]
     Active Substance: MESALAMINE
  133. ASACOL [Suspect]
     Active Substance: MESALAMINE
  134. ASACOL [Suspect]
     Active Substance: MESALAMINE
  135. ASACOL [Suspect]
     Active Substance: MESALAMINE
  136. ASACOL [Suspect]
     Active Substance: MESALAMINE
  137. ASACOL [Suspect]
     Active Substance: MESALAMINE
  138. ASACOL [Suspect]
     Active Substance: MESALAMINE
  139. ASACOL [Suspect]
     Active Substance: MESALAMINE
  140. ASACOL [Suspect]
     Active Substance: MESALAMINE
  141. ASACOL [Suspect]
     Active Substance: MESALAMINE
     Route: 048
  142. ASACOL [Suspect]
     Active Substance: MESALAMINE
     Route: 048
  143. ASACOL [Suspect]
     Active Substance: MESALAMINE
     Route: 065
  144. ASACOL [Suspect]
     Active Substance: MESALAMINE
  145. ASACOL [Suspect]
     Active Substance: MESALAMINE
     Indication: Colitis ulcerative
     Route: 065
  146. BUDESONIDE [Suspect]
     Active Substance: BUDESONIDE
     Indication: Colitis ulcerative
     Route: 048
  147. BUDESONIDE [Suspect]
     Active Substance: BUDESONIDE
     Route: 048
  148. BUDESONIDE [Suspect]
     Active Substance: BUDESONIDE
     Route: 065
  149. BUDESONIDE [Suspect]
     Active Substance: BUDESONIDE
     Route: 048
  150. BUDESONIDE [Suspect]
     Active Substance: BUDESONIDE
     Route: 048
  151. BUDESONIDE [Suspect]
     Active Substance: BUDESONIDE
     Route: 048
  152. BUDESONIDE [Suspect]
     Active Substance: BUDESONIDE
     Route: 048
  153. BUDESONIDE [Suspect]
     Active Substance: BUDESONIDE
     Route: 048
  154. BUDESONIDE [Suspect]
     Active Substance: BUDESONIDE
     Route: 048
  155. BUDESONIDE [Suspect]
     Active Substance: BUDESONIDE
     Route: 048
  156. BUDESONIDE [Suspect]
     Active Substance: BUDESONIDE
     Route: 048
  157. BUDESONIDE [Suspect]
     Active Substance: BUDESONIDE
     Route: 048
  158. BUDESONIDE [Suspect]
     Active Substance: BUDESONIDE
     Route: 048
  159. BUDESONIDE [Suspect]
     Active Substance: BUDESONIDE
     Route: 048
  160. BUDESONIDE [Suspect]
     Active Substance: BUDESONIDE
     Route: 048
  161. BUDESONIDE [Suspect]
     Active Substance: BUDESONIDE
     Route: 048
  162. BUDESONIDE [Suspect]
     Active Substance: BUDESONIDE
     Route: 048
  163. BUDESONIDE [Suspect]
     Active Substance: BUDESONIDE
     Route: 048
  164. BUDESONIDE [Suspect]
     Active Substance: BUDESONIDE
     Route: 048
  165. BUDESONIDE [Suspect]
     Active Substance: BUDESONIDE
     Route: 048
  166. BUDESONIDE [Suspect]
     Active Substance: BUDESONIDE
     Route: 048
  167. BUDESONIDE [Suspect]
     Active Substance: BUDESONIDE
     Route: 048
  168. BUDESONIDE [Suspect]
     Active Substance: BUDESONIDE
     Route: 048
  169. BUDESONIDE [Suspect]
     Active Substance: BUDESONIDE
     Route: 048
  170. BUDESONIDE [Suspect]
     Active Substance: BUDESONIDE
     Route: 048
  171. BUDESONIDE [Suspect]
     Active Substance: BUDESONIDE
     Route: 048
  172. BUDESONIDE [Suspect]
     Active Substance: BUDESONIDE
     Route: 048
  173. BUDESONIDE [Suspect]
     Active Substance: BUDESONIDE
     Route: 048
  174. BUDESONIDE [Suspect]
     Active Substance: BUDESONIDE
     Route: 048
  175. BUDESONIDE [Suspect]
     Active Substance: BUDESONIDE
     Route: 048
  176. BUDESONIDE [Suspect]
     Active Substance: BUDESONIDE
     Route: 048
  177. BUDESONIDE [Suspect]
     Active Substance: BUDESONIDE
     Route: 048
  178. BUDESONIDE [Suspect]
     Active Substance: BUDESONIDE
     Route: 048
  179. BUDESONIDE [Suspect]
     Active Substance: BUDESONIDE
     Route: 048
  180. BUDESONIDE [Suspect]
     Active Substance: BUDESONIDE
     Route: 065
  181. BUDESONIDE [Suspect]
     Active Substance: BUDESONIDE
     Route: 048
  182. BUDESONIDE [Suspect]
     Active Substance: BUDESONIDE
     Route: 048
  183. BUDESONIDE [Suspect]
     Active Substance: BUDESONIDE
     Route: 065
  184. BUDESONIDE [Suspect]
     Active Substance: BUDESONIDE
     Route: 065
  185. BUDESONIDE [Suspect]
     Active Substance: BUDESONIDE
     Route: 065
  186. BUDESONIDE [Suspect]
     Active Substance: BUDESONIDE
     Route: 048
  187. BUDESONIDE [Suspect]
     Active Substance: BUDESONIDE
     Route: 048
  188. BUDESONIDE [Suspect]
     Active Substance: BUDESONIDE
     Route: 048
  189. BUDESONIDE [Suspect]
     Active Substance: BUDESONIDE
     Route: 048
  190. BUDESONIDE [Suspect]
     Active Substance: BUDESONIDE
     Route: 048
  191. BUDESONIDE [Suspect]
     Active Substance: BUDESONIDE
     Route: 048
  192. BUDESONIDE [Suspect]
     Active Substance: BUDESONIDE
     Route: 048
  193. BUDESONIDE [Suspect]
     Active Substance: BUDESONIDE
     Route: 048
  194. BUDESONIDE [Suspect]
     Active Substance: BUDESONIDE
     Route: 048
  195. BUDESONIDE [Suspect]
     Active Substance: BUDESONIDE
     Route: 048
  196. CORTISONE ACETATE [Suspect]
     Active Substance: CORTISONE ACETATE
     Indication: Product used for unknown indication
     Route: 065
  197. CORTIFOAM [Suspect]
     Active Substance: HYDROCORTISONE ACETATE
     Indication: Colitis ulcerative
     Route: 065
  198. CORTIFOAM [Suspect]
     Active Substance: HYDROCORTISONE ACETATE
     Indication: Deep vein thrombosis
     Route: 048
  199. CORTIFOAM [Suspect]
     Active Substance: HYDROCORTISONE ACETATE
     Route: 048
  200. CORTIFOAM [Suspect]
     Active Substance: HYDROCORTISONE ACETATE
     Route: 065
  201. CORTIFOAM [Suspect]
     Active Substance: HYDROCORTISONE ACETATE
     Route: 065
  202. CORTIFOAM [Suspect]
     Active Substance: HYDROCORTISONE ACETATE
     Route: 048
  203. CORTIFOAM [Suspect]
     Active Substance: HYDROCORTISONE ACETATE
     Route: 048
  204. CORTIFOAM [Suspect]
     Active Substance: HYDROCORTISONE ACETATE
     Route: 048
  205. CORTIFOAM [Suspect]
     Active Substance: HYDROCORTISONE ACETATE
     Route: 065
  206. CORTIFOAM [Suspect]
     Active Substance: HYDROCORTISONE ACETATE
     Route: 048
  207. CORTIFOAM [Suspect]
     Active Substance: HYDROCORTISONE ACETATE
     Route: 048
  208. CORTIFOAM [Suspect]
     Active Substance: HYDROCORTISONE ACETATE
     Route: 065
  209. CORTIFOAM [Suspect]
     Active Substance: HYDROCORTISONE ACETATE
     Route: 065
  210. CORTIFOAM [Suspect]
     Active Substance: HYDROCORTISONE ACETATE
     Route: 048
  211. CORTIFOAM [Suspect]
     Active Substance: HYDROCORTISONE ACETATE
     Route: 065
  212. CORTIFOAM [Suspect]
     Active Substance: HYDROCORTISONE ACETATE
     Route: 065
  213. CORTIFOAM [Suspect]
     Active Substance: HYDROCORTISONE ACETATE
     Route: 048
  214. CORTIFOAM [Suspect]
     Active Substance: HYDROCORTISONE ACETATE
     Route: 048
  215. CORTIFOAM [Suspect]
     Active Substance: HYDROCORTISONE ACETATE
     Route: 065
  216. CORTIFOAM [Suspect]
     Active Substance: HYDROCORTISONE ACETATE
     Route: 065
  217. CORTIFOAM [Suspect]
     Active Substance: HYDROCORTISONE ACETATE
     Route: 065
  218. CORTIFOAM [Suspect]
     Active Substance: HYDROCORTISONE ACETATE
     Route: 065
  219. CORTIFOAM [Suspect]
     Active Substance: HYDROCORTISONE ACETATE
     Route: 048
  220. CORTIFOAM [Suspect]
     Active Substance: HYDROCORTISONE ACETATE
     Route: 048
  221. CORTIFOAM [Suspect]
     Active Substance: HYDROCORTISONE ACETATE
     Route: 065
  222. CORTIFOAM [Suspect]
     Active Substance: HYDROCORTISONE ACETATE
     Route: 048
  223. CORTIFOAM [Suspect]
     Active Substance: HYDROCORTISONE ACETATE
     Route: 048
  224. CORTIFOAM [Suspect]
     Active Substance: HYDROCORTISONE ACETATE
     Route: 065
  225. CORTIFOAM [Suspect]
     Active Substance: HYDROCORTISONE ACETATE
     Route: 048
  226. CORTIFOAM [Suspect]
     Active Substance: HYDROCORTISONE ACETATE
     Route: 065
  227. CORTIFOAM [Suspect]
     Active Substance: HYDROCORTISONE ACETATE
     Route: 048
  228. CORTIFOAM [Suspect]
     Active Substance: HYDROCORTISONE ACETATE
     Route: 065
  229. CORTIFOAM [Suspect]
     Active Substance: HYDROCORTISONE ACETATE
     Route: 048
  230. CORTIFOAM [Suspect]
     Active Substance: HYDROCORTISONE ACETATE
     Route: 065
  231. CORTIFOAM [Suspect]
     Active Substance: HYDROCORTISONE ACETATE
     Indication: Colitis ulcerative
     Route: 048
  232. CORTIFOAM [Suspect]
     Active Substance: HYDROCORTISONE ACETATE
     Indication: Deep vein thrombosis
     Route: 048
  233. CORTIFOAM [Suspect]
     Active Substance: HYDROCORTISONE ACETATE
     Indication: Crohn^s disease
     Route: 065
  234. CORTIFOAM [Suspect]
     Active Substance: HYDROCORTISONE ACETATE
     Route: 065
  235. CORTIFOAM [Suspect]
     Active Substance: HYDROCORTISONE ACETATE
     Route: 065
  236. CORTIFOAM [Suspect]
     Active Substance: HYDROCORTISONE ACETATE
     Route: 065
  237. CORTIFOAM [Suspect]
     Active Substance: HYDROCORTISONE ACETATE
     Route: 048
  238. CORTIFOAM [Suspect]
     Active Substance: HYDROCORTISONE ACETATE
     Route: 048
  239. CORTIFOAM [Suspect]
     Active Substance: HYDROCORTISONE ACETATE
     Route: 048
  240. CORTIFOAM [Suspect]
     Active Substance: HYDROCORTISONE ACETATE
     Route: 048
  241. CORTIFOAM [Suspect]
     Active Substance: HYDROCORTISONE ACETATE
     Route: 065
  242. CORTIFOAM [Suspect]
     Active Substance: HYDROCORTISONE ACETATE
     Route: 065
  243. CORTIFOAM [Suspect]
     Active Substance: HYDROCORTISONE ACETATE
     Route: 048
  244. CORTIFOAM [Suspect]
     Active Substance: HYDROCORTISONE ACETATE
     Route: 048
  245. CORTIFOAM [Suspect]
     Active Substance: HYDROCORTISONE ACETATE
     Route: 048
  246. CORTIFOAM [Suspect]
     Active Substance: HYDROCORTISONE ACETATE
     Route: 065
  247. CORTIFOAM [Suspect]
     Active Substance: HYDROCORTISONE ACETATE
     Route: 065
  248. CORTIFOAM [Suspect]
     Active Substance: HYDROCORTISONE ACETATE
     Route: 065
  249. CORTIFOAM [Suspect]
     Active Substance: HYDROCORTISONE ACETATE
     Route: 048
  250. CORTIFOAM [Suspect]
     Active Substance: HYDROCORTISONE ACETATE
     Route: 048
  251. CORTIFOAM [Suspect]
     Active Substance: HYDROCORTISONE ACETATE
     Route: 048
  252. CORTIFOAM [Suspect]
     Active Substance: HYDROCORTISONE ACETATE
     Route: 065
  253. CORTIFOAM [Suspect]
     Active Substance: HYDROCORTISONE ACETATE
  254. CORTIFOAM [Suspect]
     Active Substance: HYDROCORTISONE ACETATE
  255. CORTIFOAM [Suspect]
     Active Substance: HYDROCORTISONE ACETATE
  256. CORTIFOAM [Suspect]
     Active Substance: HYDROCORTISONE ACETATE
  257. CORTIFOAM [Suspect]
     Active Substance: HYDROCORTISONE ACETATE
     Route: 065
  258. CORTIFOAM [Suspect]
     Active Substance: HYDROCORTISONE ACETATE
     Route: 065
  259. CORTIFOAM [Suspect]
     Active Substance: HYDROCORTISONE ACETATE
  260. CORTIFOAM [Suspect]
     Active Substance: HYDROCORTISONE ACETATE
  261. CORTIFOAM [Suspect]
     Active Substance: HYDROCORTISONE ACETATE
  262. CORTIFOAM [Suspect]
     Active Substance: HYDROCORTISONE ACETATE
  263. CORTIFOAM [Suspect]
     Active Substance: HYDROCORTISONE ACETATE
  264. CORTIFOAM [Suspect]
     Active Substance: HYDROCORTISONE ACETATE
  265. CORTIFOAM [Suspect]
     Active Substance: HYDROCORTISONE ACETATE
  266. CORTIFOAM [Suspect]
     Active Substance: HYDROCORTISONE ACETATE
  267. CORTIFOAM [Suspect]
     Active Substance: HYDROCORTISONE ACETATE
     Route: 065
  268. CORTIFOAM [Suspect]
     Active Substance: HYDROCORTISONE ACETATE
     Route: 065
  269. CORTIFOAM [Suspect]
     Active Substance: HYDROCORTISONE ACETATE
     Route: 065
  270. CORTIFOAM [Suspect]
     Active Substance: HYDROCORTISONE ACETATE
     Route: 065
  271. CORTIFOAM [Suspect]
     Active Substance: HYDROCORTISONE ACETATE
     Route: 065
  272. CORTIFOAM [Suspect]
     Active Substance: HYDROCORTISONE ACETATE
     Route: 065
  273. CORTIFOAM [Suspect]
     Active Substance: HYDROCORTISONE ACETATE
     Route: 065
  274. CORTIFOAM [Suspect]
     Active Substance: HYDROCORTISONE ACETATE
     Route: 065
  275. CORTIFOAM [Suspect]
     Active Substance: HYDROCORTISONE ACETATE
     Route: 065
  276. CORTIFOAM [Suspect]
     Active Substance: HYDROCORTISONE ACETATE
     Route: 065
  277. CORTIFOAM [Suspect]
     Active Substance: HYDROCORTISONE ACETATE
     Route: 065
  278. ENTYVIO [Suspect]
     Active Substance: VEDOLIZUMAB
     Indication: Deep vein thrombosis
     Route: 065
  279. ENTYVIO [Suspect]
     Active Substance: VEDOLIZUMAB
     Indication: Colitis ulcerative
     Route: 042
  280. ENTYVIO [Suspect]
     Active Substance: VEDOLIZUMAB
     Route: 042
  281. ENTYVIO [Suspect]
     Active Substance: VEDOLIZUMAB
     Route: 065
  282. ENTYVIO [Suspect]
     Active Substance: VEDOLIZUMAB
     Route: 048
  283. ENTYVIO [Suspect]
     Active Substance: VEDOLIZUMAB
     Route: 065
  284. ENTYVIO [Suspect]
     Active Substance: VEDOLIZUMAB
     Route: 042
  285. ENTYVIO [Suspect]
     Active Substance: VEDOLIZUMAB
     Route: 042
  286. ENTYVIO [Suspect]
     Active Substance: VEDOLIZUMAB
     Route: 048
  287. ENTYVIO [Suspect]
     Active Substance: VEDOLIZUMAB
     Route: 048
  288. ENTYVIO [Suspect]
     Active Substance: VEDOLIZUMAB
     Route: 048
  289. ENTYVIO [Suspect]
     Active Substance: VEDOLIZUMAB
     Route: 048
  290. ENTYVIO [Suspect]
     Active Substance: VEDOLIZUMAB
     Route: 042
  291. ENTYVIO [Suspect]
     Active Substance: VEDOLIZUMAB
     Route: 065
  292. ENTYVIO [Suspect]
     Active Substance: VEDOLIZUMAB
     Route: 065
  293. ENTYVIO [Suspect]
     Active Substance: VEDOLIZUMAB
     Route: 065
  294. ENTYVIO [Suspect]
     Active Substance: VEDOLIZUMAB
     Route: 048
  295. ENTYVIO [Suspect]
     Active Substance: VEDOLIZUMAB
     Route: 065
  296. ENTYVIO [Suspect]
     Active Substance: VEDOLIZUMAB
     Route: 048
  297. ENTYVIO [Suspect]
     Active Substance: VEDOLIZUMAB
     Route: 065
  298. ENTYVIO [Suspect]
     Active Substance: VEDOLIZUMAB
     Route: 048
  299. ENTYVIO [Suspect]
     Active Substance: VEDOLIZUMAB
     Route: 065
  300. ENTYVIO [Suspect]
     Active Substance: VEDOLIZUMAB
     Route: 048
  301. ENTYVIO [Suspect]
     Active Substance: VEDOLIZUMAB
  302. ENTYVIO [Suspect]
     Active Substance: VEDOLIZUMAB
     Route: 042
  303. ENTYVIO [Suspect]
     Active Substance: VEDOLIZUMAB
     Route: 042
  304. ENTYVIO [Suspect]
     Active Substance: VEDOLIZUMAB
     Route: 048
  305. ENTYVIO [Suspect]
     Active Substance: VEDOLIZUMAB
     Route: 048
  306. ENTYVIO [Suspect]
     Active Substance: VEDOLIZUMAB
     Indication: Colitis ulcerative
     Route: 048
  307. ENTYVIO [Suspect]
     Active Substance: VEDOLIZUMAB
     Indication: Deep vein thrombosis
     Route: 048
  308. ENTYVIO [Suspect]
     Active Substance: VEDOLIZUMAB
     Route: 042
  309. ENTYVIO [Suspect]
     Active Substance: VEDOLIZUMAB
     Route: 042
  310. ENTYVIO [Suspect]
     Active Substance: VEDOLIZUMAB
     Route: 042
  311. ENTYVIO [Suspect]
     Active Substance: VEDOLIZUMAB
     Route: 065
  312. ENTYVIO [Suspect]
     Active Substance: VEDOLIZUMAB
     Route: 042
  313. ENTYVIO [Suspect]
     Active Substance: VEDOLIZUMAB
     Route: 065
  314. ENTYVIO [Suspect]
     Active Substance: VEDOLIZUMAB
     Route: 048
  315. ENTYVIO [Suspect]
     Active Substance: VEDOLIZUMAB
     Route: 048
  316. ENTYVIO [Suspect]
     Active Substance: VEDOLIZUMAB
     Route: 042
  317. ENTYVIO [Suspect]
     Active Substance: VEDOLIZUMAB
     Route: 048
  318. ENTYVIO [Suspect]
     Active Substance: VEDOLIZUMAB
     Route: 042
  319. ENTYVIO [Suspect]
     Active Substance: VEDOLIZUMAB
     Route: 042
  320. ENTYVIO [Suspect]
     Active Substance: VEDOLIZUMAB
     Route: 042
  321. ENTYVIO [Suspect]
     Active Substance: VEDOLIZUMAB
     Route: 065
  322. ENTYVIO [Suspect]
     Active Substance: VEDOLIZUMAB
     Route: 065
  323. ENTYVIO [Suspect]
     Active Substance: VEDOLIZUMAB
     Route: 065
  324. ENTYVIO [Suspect]
     Active Substance: VEDOLIZUMAB
     Route: 042
  325. ENTYVIO [Suspect]
     Active Substance: VEDOLIZUMAB
     Route: 065
  326. ENTYVIO [Suspect]
     Active Substance: VEDOLIZUMAB
     Route: 042
  327. ENTYVIO [Suspect]
     Active Substance: VEDOLIZUMAB
     Route: 065
  328. ENTYVIO [Suspect]
     Active Substance: VEDOLIZUMAB
     Route: 042
  329. ENTYVIO [Suspect]
     Active Substance: VEDOLIZUMAB
     Route: 042
  330. ENTYVIO [Suspect]
     Active Substance: VEDOLIZUMAB
     Route: 042
  331. ENTYVIO [Suspect]
     Active Substance: VEDOLIZUMAB
     Route: 048
  332. ENTYVIO [Suspect]
     Active Substance: VEDOLIZUMAB
     Route: 048
  333. ENTYVIO [Suspect]
     Active Substance: VEDOLIZUMAB
     Route: 048
  334. ENTYVIO [Suspect]
     Active Substance: VEDOLIZUMAB
     Indication: Deep vein thrombosis
     Route: 065
  335. ENTYVIO [Suspect]
     Active Substance: VEDOLIZUMAB
     Indication: Colitis ulcerative
     Route: 042
  336. ENTYVIO [Suspect]
     Active Substance: VEDOLIZUMAB
     Route: 048
  337. ENTYVIO [Suspect]
     Active Substance: VEDOLIZUMAB
     Route: 048
  338. ENTYVIO [Suspect]
     Active Substance: VEDOLIZUMAB
     Route: 048
  339. ENTYVIO [Suspect]
     Active Substance: VEDOLIZUMAB
     Route: 048
  340. ENTYVIO [Suspect]
     Active Substance: VEDOLIZUMAB
     Route: 042
  341. ENTYVIO [Suspect]
     Active Substance: VEDOLIZUMAB
     Route: 042
  342. ENTYVIO [Suspect]
     Active Substance: VEDOLIZUMAB
     Route: 042
  343. ENTYVIO [Suspect]
     Active Substance: VEDOLIZUMAB
     Route: 065
  344. ENTYVIO [Suspect]
     Active Substance: VEDOLIZUMAB
     Route: 048
  345. ENTYVIO [Suspect]
     Active Substance: VEDOLIZUMAB
     Route: 065
  346. ENTYVIO [Suspect]
     Active Substance: VEDOLIZUMAB
     Route: 042
  347. ENTYVIO [Suspect]
     Active Substance: VEDOLIZUMAB
     Route: 048
  348. ENTYVIO [Suspect]
     Active Substance: VEDOLIZUMAB
     Route: 048
  349. ENTYVIO [Suspect]
     Active Substance: VEDOLIZUMAB
     Route: 048
  350. ENTYVIO [Suspect]
     Active Substance: VEDOLIZUMAB
     Route: 065
  351. ENTYVIO [Suspect]
     Active Substance: VEDOLIZUMAB
     Route: 065
  352. ENTYVIO [Suspect]
     Active Substance: VEDOLIZUMAB
     Route: 048
  353. ENTYVIO [Suspect]
     Active Substance: VEDOLIZUMAB
     Route: 048
  354. ENTYVIO [Suspect]
     Active Substance: VEDOLIZUMAB
     Route: 048
  355. ENTYVIO [Suspect]
     Active Substance: VEDOLIZUMAB
     Route: 065
  356. ENTYVIO [Suspect]
     Active Substance: VEDOLIZUMAB
     Route: 048
  357. ENTYVIO [Suspect]
     Active Substance: VEDOLIZUMAB
     Route: 048
  358. ENTYVIO [Suspect]
     Active Substance: VEDOLIZUMAB
     Route: 042
  359. HUMIRA [Suspect]
     Active Substance: ADALIMUMAB
     Indication: Crohn^s disease
     Route: 048
  360. HUMIRA [Suspect]
     Active Substance: ADALIMUMAB
     Indication: Deep vein thrombosis
     Route: 048
  361. HUMIRA [Suspect]
     Active Substance: ADALIMUMAB
     Indication: Colitis ulcerative
     Route: 048
  362. HUMIRA [Suspect]
     Active Substance: ADALIMUMAB
     Route: 048
  363. HUMIRA [Suspect]
     Active Substance: ADALIMUMAB
     Route: 048
  364. HUMIRA [Suspect]
     Active Substance: ADALIMUMAB
     Route: 048
  365. HUMIRA [Suspect]
     Active Substance: ADALIMUMAB
     Route: 048
  366. HUMIRA [Suspect]
     Active Substance: ADALIMUMAB
     Route: 065
  367. HUMIRA [Suspect]
     Active Substance: ADALIMUMAB
     Route: 065
  368. HUMIRA [Suspect]
     Active Substance: ADALIMUMAB
     Route: 065
  369. HUMIRA [Suspect]
     Active Substance: ADALIMUMAB
     Route: 058
  370. HUMIRA [Suspect]
     Active Substance: ADALIMUMAB
     Route: 065
  371. HUMIRA [Suspect]
     Active Substance: ADALIMUMAB
     Route: 065
  372. HUMIRA [Suspect]
     Active Substance: ADALIMUMAB
     Route: 065
  373. HUMIRA [Suspect]
     Active Substance: ADALIMUMAB
     Route: 048
  374. HUMIRA [Suspect]
     Active Substance: ADALIMUMAB
     Route: 058
  375. HUMIRA [Suspect]
     Active Substance: ADALIMUMAB
     Route: 065
  376. HUMIRA [Suspect]
     Active Substance: ADALIMUMAB
     Route: 065
  377. HUMIRA [Suspect]
     Active Substance: ADALIMUMAB
     Route: 065
  378. HUMIRA [Suspect]
     Active Substance: ADALIMUMAB
     Route: 065
  379. HUMIRA [Suspect]
     Active Substance: ADALIMUMAB
     Route: 065
  380. HUMIRA [Suspect]
     Active Substance: ADALIMUMAB
     Route: 065
  381. HYDROCORTISONE [Suspect]
     Active Substance: HYDROCORTISONE
     Indication: Colitis ulcerative
     Route: 048
  382. HYDROCORTISONE [Suspect]
     Active Substance: HYDROCORTISONE
     Indication: Crohn^s disease
     Route: 048
  383. HYDROCORTISONE [Suspect]
     Active Substance: HYDROCORTISONE
     Route: 048
  384. HYDROCORTISONE [Suspect]
     Active Substance: HYDROCORTISONE
     Route: 048
  385. HYDROCORTISONE [Suspect]
     Active Substance: HYDROCORTISONE
     Route: 048
  386. HYDROCORTISONE [Suspect]
     Active Substance: HYDROCORTISONE
     Route: 048
  387. HYDROCORTISONE [Suspect]
     Active Substance: HYDROCORTISONE
     Route: 065
  388. HYDROCORTISONE [Suspect]
     Active Substance: HYDROCORTISONE
     Route: 048
  389. HYDROCORTISONE [Suspect]
     Active Substance: HYDROCORTISONE
     Route: 048
  390. HYDROCORTISONE [Suspect]
     Active Substance: HYDROCORTISONE
     Route: 048
  391. HYDROCORTISONE [Suspect]
     Active Substance: HYDROCORTISONE
     Route: 048
  392. HYDROCORTISONE [Suspect]
     Active Substance: HYDROCORTISONE
     Route: 048
  393. HYDROCORTISONE [Suspect]
     Active Substance: HYDROCORTISONE
     Route: 048
  394. HYDROCORTISONE [Suspect]
     Active Substance: HYDROCORTISONE
     Route: 048
  395. HYDROCORTISONE [Suspect]
     Active Substance: HYDROCORTISONE
     Route: 048
  396. HYDROCORTISONE [Suspect]
     Active Substance: HYDROCORTISONE
     Route: 048
  397. HYDROCORTISONE [Suspect]
     Active Substance: HYDROCORTISONE
     Route: 048
  398. HYDROCORTISONE [Suspect]
     Active Substance: HYDROCORTISONE
     Route: 048
  399. HYDROCORTISONE [Suspect]
     Active Substance: HYDROCORTISONE
     Route: 061
  400. HYDROCORTISONE [Suspect]
     Active Substance: HYDROCORTISONE
     Route: 048
  401. HYDROCORTISONE [Suspect]
     Active Substance: HYDROCORTISONE
     Route: 065
  402. HYDROCORTISONE [Suspect]
     Active Substance: HYDROCORTISONE
     Route: 048
  403. HYDROCORTISONE [Suspect]
     Active Substance: HYDROCORTISONE
     Route: 048
  404. HYDROCORTISONE [Suspect]
     Active Substance: HYDROCORTISONE
     Route: 048
  405. HYDROCORTISONE [Suspect]
     Active Substance: HYDROCORTISONE
     Route: 048
  406. HYDROCORTISONE [Suspect]
     Active Substance: HYDROCORTISONE
     Route: 048
  407. HYDROCORTISONE [Suspect]
     Active Substance: HYDROCORTISONE
     Route: 048
  408. HYDROCORTISONE [Suspect]
     Active Substance: HYDROCORTISONE
     Route: 048
  409. HYDROCORTISONE [Suspect]
     Active Substance: HYDROCORTISONE
     Route: 048
  410. HYDROCORTISONE [Suspect]
     Active Substance: HYDROCORTISONE
     Route: 048
  411. HYDROCORTISONE [Suspect]
     Active Substance: HYDROCORTISONE
     Route: 065
  412. HYDROCORTISONE [Suspect]
     Active Substance: HYDROCORTISONE
     Route: 048
  413. HYDROCORTISONE [Suspect]
     Active Substance: HYDROCORTISONE
     Route: 048
  414. HYDROCORTISONE [Suspect]
     Active Substance: HYDROCORTISONE
     Route: 048
  415. HYDROCORTISONE [Suspect]
     Active Substance: HYDROCORTISONE
     Dosage: 1 DOSAGE FORM 1 EVERY 2 WEEKS
     Route: 048
  416. HYDROCORTISONE [Suspect]
     Active Substance: HYDROCORTISONE
     Route: 061
  417. HYDROCORTISONE [Suspect]
     Active Substance: HYDROCORTISONE
     Route: 048
  418. HYDROCORTISONE [Suspect]
     Active Substance: HYDROCORTISONE
     Route: 065
  419. HYDROCORTISONE [Suspect]
     Active Substance: HYDROCORTISONE
     Route: 048
  420. HYDROCORTISONE [Suspect]
     Active Substance: HYDROCORTISONE
     Route: 065
  421. HYDROCORTISONE [Suspect]
     Active Substance: HYDROCORTISONE
     Route: 048
  422. HYDROCORTISONE [Suspect]
     Active Substance: HYDROCORTISONE
     Route: 065
  423. HYDROCORTISONE [Suspect]
     Active Substance: HYDROCORTISONE
     Route: 065
  424. HYDROCORTISONE [Suspect]
     Active Substance: HYDROCORTISONE
     Route: 048
  425. HYDROCORTISONE [Suspect]
     Active Substance: HYDROCORTISONE
  426. HYDROCORTISONE [Suspect]
     Active Substance: HYDROCORTISONE
     Route: 048
  427. HYDROCORTISONE [Suspect]
     Active Substance: HYDROCORTISONE
     Route: 048
  428. HYDROCORTISONE [Suspect]
     Active Substance: HYDROCORTISONE
     Route: 048
  429. HYDROCORTISONE [Suspect]
     Active Substance: HYDROCORTISONE
     Route: 065
  430. HYDROCORTISONE [Suspect]
     Active Substance: HYDROCORTISONE
     Route: 048
  431. HYDROCORTISONE SODIUM SUCCINATE [Suspect]
     Active Substance: HYDROCORTISONE SODIUM SUCCINATE
     Indication: Colitis ulcerative
     Route: 065
  432. HYDROCORTISONE ACETATE [Suspect]
     Active Substance: HYDROCORTISONE ACETATE
     Indication: Colitis ulcerative
     Route: 048
  433. HYDROCORTISONE ACETATE [Suspect]
     Active Substance: HYDROCORTISONE ACETATE
     Indication: Crohn^s disease
     Route: 048
  434. HYDROCORTISONE ACETATE [Suspect]
     Active Substance: HYDROCORTISONE ACETATE
     Indication: Deep vein thrombosis
     Route: 042
  435. HYDROCORTISONE ACETATE [Suspect]
     Active Substance: HYDROCORTISONE ACETATE
     Route: 048
  436. HYDROCORTISONE ACETATE [Suspect]
     Active Substance: HYDROCORTISONE ACETATE
     Route: 065
  437. HYDROCORTISONE ACETATE [Suspect]
     Active Substance: HYDROCORTISONE ACETATE
     Route: 048
  438. HYDROCORTISONE ACETATE [Suspect]
     Active Substance: HYDROCORTISONE ACETATE
     Route: 065
  439. HYDROCORTISONE ACETATE [Suspect]
     Active Substance: HYDROCORTISONE ACETATE
     Route: 048
  440. HYDROCORTISONE ACETATE [Suspect]
     Active Substance: HYDROCORTISONE ACETATE
     Route: 048
  441. HYDROCORTISONE ACETATE [Suspect]
     Active Substance: HYDROCORTISONE ACETATE
     Route: 065
  442. HYDROCORTISONE ACETATE [Suspect]
     Active Substance: HYDROCORTISONE ACETATE
     Route: 042
  443. HYDROCORTISONE ACETATE [Suspect]
     Active Substance: HYDROCORTISONE ACETATE
     Route: 048
  444. HYDROCORTISONE ACETATE [Suspect]
     Active Substance: HYDROCORTISONE ACETATE
     Route: 065
  445. HYDROCORTISONE ACETATE [Suspect]
     Active Substance: HYDROCORTISONE ACETATE
     Route: 048
  446. HYDROCORTISONE ACETATE [Suspect]
     Active Substance: HYDROCORTISONE ACETATE
     Route: 048
  447. HYDROCORTISONE ACETATE [Suspect]
     Active Substance: HYDROCORTISONE ACETATE
     Route: 065
  448. HYDROCORTISONE ACETATE [Suspect]
     Active Substance: HYDROCORTISONE ACETATE
     Route: 048
  449. HYDROCORTISONE ACETATE [Suspect]
     Active Substance: HYDROCORTISONE ACETATE
     Route: 048
  450. HYDROCORTISONE ACETATE [Suspect]
     Active Substance: HYDROCORTISONE ACETATE
     Route: 048
  451. HYDROCORTISONE ACETATE [Suspect]
     Active Substance: HYDROCORTISONE ACETATE
     Route: 048
  452. HYDROCORTISONE ACETATE [Suspect]
     Active Substance: HYDROCORTISONE ACETATE
     Route: 048
  453. HYDROCORTISONE ACETATE [Suspect]
     Active Substance: HYDROCORTISONE ACETATE
     Route: 048
  454. HYDROCORTISONE ACETATE [Suspect]
     Active Substance: HYDROCORTISONE ACETATE
     Route: 048
  455. HYDROCORTISONE ACETATE [Suspect]
     Active Substance: HYDROCORTISONE ACETATE
     Route: 065
  456. HYDROCORTISONE ACETATE [Suspect]
     Active Substance: HYDROCORTISONE ACETATE
     Route: 065
  457. HYDROCORTISONE ACETATE [Suspect]
     Active Substance: HYDROCORTISONE ACETATE
     Route: 048
  458. HYDROCORTISONE ACETATE [Suspect]
     Active Substance: HYDROCORTISONE ACETATE
     Route: 048
  459. HYDROCORTISONE ACETATE [Suspect]
     Active Substance: HYDROCORTISONE ACETATE
     Route: 048
  460. HYDROCORTISONE ACETATE [Suspect]
     Active Substance: HYDROCORTISONE ACETATE
     Route: 048
  461. HYDROCORTISONE ACETATE [Suspect]
     Active Substance: HYDROCORTISONE ACETATE
     Route: 048
  462. HYDROCORTISONE ACETATE [Suspect]
     Active Substance: HYDROCORTISONE ACETATE
     Route: 048
  463. HYDROCORTISONE ACETATE [Suspect]
     Active Substance: HYDROCORTISONE ACETATE
     Route: 048
  464. HYDROCORTISONE ACETATE [Suspect]
     Active Substance: HYDROCORTISONE ACETATE
     Route: 048
  465. HYDROCORTISONE ACETATE [Suspect]
     Active Substance: HYDROCORTISONE ACETATE
  466. HYDROCORTISONE ACETATE [Suspect]
     Active Substance: HYDROCORTISONE ACETATE
  467. HYDROCORTISONE ACETATE [Suspect]
     Active Substance: HYDROCORTISONE ACETATE
  468. HYDROCORTISONE ACETATE [Suspect]
     Active Substance: HYDROCORTISONE ACETATE
  469. HYDROCORTISONE ACETATE [Suspect]
     Active Substance: HYDROCORTISONE ACETATE
  470. HYDROCORTISONE ACETATE [Suspect]
     Active Substance: HYDROCORTISONE ACETATE
  471. HYDROCORTISONE ACETATE [Suspect]
     Active Substance: HYDROCORTISONE ACETATE
  472. HYDROCORTISONE ACETATE [Suspect]
     Active Substance: HYDROCORTISONE ACETATE
     Route: 048
  473. HYDROCORTISONE ACETATE [Suspect]
     Active Substance: HYDROCORTISONE ACETATE
     Route: 048
  474. HYDROCORTISONE ACETATE [Suspect]
     Active Substance: HYDROCORTISONE ACETATE
     Route: 048
  475. HYDROCORTISONE ACETATE [Suspect]
     Active Substance: HYDROCORTISONE ACETATE
     Route: 048
  476. HYDROCORTISONE ACETATE [Suspect]
     Active Substance: HYDROCORTISONE ACETATE
     Route: 048
  477. HYDROCORTISONE ACETATE [Suspect]
     Active Substance: HYDROCORTISONE ACETATE
     Route: 048
  478. HYDROCORTISONE ACETATE [Suspect]
     Active Substance: HYDROCORTISONE ACETATE
     Route: 048
  479. HYDROCORTISONE ACETATE [Suspect]
     Active Substance: HYDROCORTISONE ACETATE
  480. HYDROCORTISONE ACETATE [Suspect]
     Active Substance: HYDROCORTISONE ACETATE
  481. HYDROCORTISONE ACETATE [Suspect]
     Active Substance: HYDROCORTISONE ACETATE
     Route: 065
  482. INFLIXIMAB [Suspect]
     Active Substance: INFLIXIMAB
     Indication: Crohn^s disease
     Route: 042
  483. INFLIXIMAB [Suspect]
     Active Substance: INFLIXIMAB
     Indication: Colitis ulcerative
     Route: 042
  484. INFLIXIMAB [Suspect]
     Active Substance: INFLIXIMAB
     Route: 042
  485. INFLIXIMAB [Suspect]
     Active Substance: INFLIXIMAB
     Route: 042
  486. INFLIXIMAB [Suspect]
     Active Substance: INFLIXIMAB
     Route: 042
  487. INFLIXIMAB [Suspect]
     Active Substance: INFLIXIMAB
     Route: 042
  488. INFLIXIMAB [Suspect]
     Active Substance: INFLIXIMAB
     Route: 042
  489. INFLIXIMAB [Suspect]
     Active Substance: INFLIXIMAB
     Route: 042
  490. INFLIXIMAB [Suspect]
     Active Substance: INFLIXIMAB
     Route: 042
  491. INFLIXIMAB [Suspect]
     Active Substance: INFLIXIMAB
     Route: 042
  492. INFLIXIMAB [Suspect]
     Active Substance: INFLIXIMAB
     Route: 042
  493. INFLIXIMAB [Suspect]
     Active Substance: INFLIXIMAB
     Indication: Crohn^s disease
     Route: 042
  494. INFLIXIMAB [Suspect]
     Active Substance: INFLIXIMAB
     Indication: Colitis ulcerative
     Route: 065
  495. INFLIXIMAB [Suspect]
     Active Substance: INFLIXIMAB
     Route: 042
  496. INFLIXIMAB [Suspect]
     Active Substance: INFLIXIMAB
     Route: 042
  497. INFLIXIMAB [Suspect]
     Active Substance: INFLIXIMAB
     Route: 042
  498. INFLIXIMAB [Suspect]
     Active Substance: INFLIXIMAB
     Route: 042
  499. INFLIXIMAB [Suspect]
     Active Substance: INFLIXIMAB
     Route: 042
  500. INFLIXIMAB [Suspect]
     Active Substance: INFLIXIMAB
     Route: 042
  501. INFLIXIMAB [Suspect]
     Active Substance: INFLIXIMAB
     Route: 042
  502. INFLIXIMAB [Suspect]
     Active Substance: INFLIXIMAB
     Route: 042
  503. INFLIXIMAB [Suspect]
     Active Substance: INFLIXIMAB
     Route: 042
  504. INFLIXIMAB [Suspect]
     Active Substance: INFLIXIMAB
     Route: 042
  505. INFLIXIMAB [Suspect]
     Active Substance: INFLIXIMAB
     Route: 048
  506. INFLIXIMAB [Suspect]
     Active Substance: INFLIXIMAB
     Route: 041
  507. INFLIXIMAB [Suspect]
     Active Substance: INFLIXIMAB
     Route: 041
  508. INFLIXIMAB [Suspect]
     Active Substance: INFLIXIMAB
     Route: 041
  509. INFLIXIMAB [Suspect]
     Active Substance: INFLIXIMAB
     Route: 041
  510. INFLIXIMAB [Suspect]
     Active Substance: INFLIXIMAB
     Route: 040
  511. INFLIXIMAB [Suspect]
     Active Substance: INFLIXIMAB
     Route: 041
  512. INFLIXIMAB [Suspect]
     Active Substance: INFLIXIMAB
     Route: 041
  513. INFLIXIMAB [Suspect]
     Active Substance: INFLIXIMAB
     Route: 041
  514. INFLIXIMAB [Suspect]
     Active Substance: INFLIXIMAB
     Route: 041
  515. INFLIXIMAB [Suspect]
     Active Substance: INFLIXIMAB
     Route: 041
  516. INFLIXIMAB [Suspect]
     Active Substance: INFLIXIMAB
     Route: 042
  517. INFLIXIMAB [Suspect]
     Active Substance: INFLIXIMAB
     Dosage: 1 DOSAGE FORM, 1 EVERY 2 WEEKS
     Route: 065
  518. INFLIXIMAB [Suspect]
     Active Substance: INFLIXIMAB
     Dosage: 1 DOSAGE FORM, 1 EVERY 2 WEEKS
     Route: 042
  519. INFLIXIMAB [Suspect]
     Active Substance: INFLIXIMAB
     Route: 042
  520. INFLIXIMAB [Suspect]
     Active Substance: INFLIXIMAB
     Route: 042
  521. INFLIXIMAB [Suspect]
     Active Substance: INFLIXIMAB
     Route: 042
  522. INFLIXIMAB [Suspect]
     Active Substance: INFLIXIMAB
     Route: 042
  523. INFLIXIMAB [Suspect]
     Active Substance: INFLIXIMAB
     Route: 042
  524. INFLIXIMAB [Suspect]
     Active Substance: INFLIXIMAB
     Route: 065
  525. INFLIXIMAB [Suspect]
     Active Substance: INFLIXIMAB
     Route: 042
  526. INFLIXIMAB [Suspect]
     Active Substance: INFLIXIMAB
     Route: 065
  527. INFLIXIMAB [Suspect]
     Active Substance: INFLIXIMAB
     Route: 042
  528. INFLIXIMAB [Suspect]
     Active Substance: INFLIXIMAB
     Route: 048
  529. INFLIXIMAB [Suspect]
     Active Substance: INFLIXIMAB
     Route: 065
  530. INFLIXIMAB [Suspect]
     Active Substance: INFLIXIMAB
     Route: 065
  531. INFLIXIMAB [Suspect]
     Active Substance: INFLIXIMAB
     Route: 065
  532. INFLIXIMAB [Suspect]
     Active Substance: INFLIXIMAB
     Route: 042
  533. INFLIXIMAB [Suspect]
     Active Substance: INFLIXIMAB
     Route: 042
  534. INFLIXIMAB [Suspect]
     Active Substance: INFLIXIMAB
  535. INFLIXIMAB [Suspect]
     Active Substance: INFLIXIMAB
  536. INFLIXIMAB [Suspect]
     Active Substance: INFLIXIMAB
  537. INFLIXIMAB [Suspect]
     Active Substance: INFLIXIMAB
  538. INFLIXIMAB [Suspect]
     Active Substance: INFLIXIMAB
  539. INFLIXIMAB [Suspect]
     Active Substance: INFLIXIMAB
     Route: 065
  540. INFLIXIMAB [Suspect]
     Active Substance: INFLIXIMAB
     Route: 042
  541. INFLIXIMAB [Suspect]
     Active Substance: INFLIXIMAB
     Route: 042
  542. INFLIXIMAB [Suspect]
     Active Substance: INFLIXIMAB
     Route: 065
  543. MESALAMINE [Suspect]
     Active Substance: MESALAMINE
     Indication: Colitis ulcerative
     Route: 065
  544. MESALAMINE [Suspect]
     Active Substance: MESALAMINE
     Route: 065
  545. MESALAMINE [Suspect]
     Active Substance: MESALAMINE
     Route: 048
  546. MESALAMINE [Suspect]
     Active Substance: MESALAMINE
     Route: 048
  547. MESALAMINE [Suspect]
     Active Substance: MESALAMINE
     Route: 048
  548. MESALAMINE [Suspect]
     Active Substance: MESALAMINE
     Route: 048
  549. MESALAMINE [Suspect]
     Active Substance: MESALAMINE
     Route: 065
  550. MESALAMINE [Suspect]
     Active Substance: MESALAMINE
     Route: 065
  551. MESALAMINE [Suspect]
     Active Substance: MESALAMINE
     Route: 065
  552. MESALAMINE [Suspect]
     Active Substance: MESALAMINE
     Route: 065
  553. MESALAMINE [Suspect]
     Active Substance: MESALAMINE
     Route: 065
  554. MESALAMINE [Suspect]
     Active Substance: MESALAMINE
     Route: 048
  555. MESALAMINE [Suspect]
     Active Substance: MESALAMINE
     Route: 065
  556. MESALAMINE [Suspect]
     Active Substance: MESALAMINE
     Route: 048
  557. MESALAMINE [Suspect]
     Active Substance: MESALAMINE
     Route: 065
  558. MESALAMINE [Suspect]
     Active Substance: MESALAMINE
     Route: 065
  559. MESALAMINE [Suspect]
     Active Substance: MESALAMINE
     Route: 065
  560. MESALAMINE [Suspect]
     Active Substance: MESALAMINE
     Route: 065
  561. MESALAMINE [Suspect]
     Active Substance: MESALAMINE
     Route: 065
  562. MESALAMINE [Suspect]
     Active Substance: MESALAMINE
     Route: 065
  563. MESALAMINE [Suspect]
     Active Substance: MESALAMINE
     Route: 065
  564. MESALAMINE [Suspect]
     Active Substance: MESALAMINE
     Route: 048
  565. MESALAMINE [Suspect]
     Active Substance: MESALAMINE
     Route: 065
  566. MESALAMINE [Suspect]
     Active Substance: MESALAMINE
     Route: 065
  567. MESALAMINE [Suspect]
     Active Substance: MESALAMINE
     Route: 065
  568. MESALAMINE [Suspect]
     Active Substance: MESALAMINE
     Route: 048
  569. MESALAMINE [Suspect]
     Active Substance: MESALAMINE
     Route: 065
  570. MESALAMINE [Suspect]
     Active Substance: MESALAMINE
     Route: 065
  571. MESALAMINE [Suspect]
     Active Substance: MESALAMINE
     Route: 065
  572. MESALAMINE [Suspect]
     Active Substance: MESALAMINE
     Route: 065
  573. MESALAMINE [Suspect]
     Active Substance: MESALAMINE
     Route: 065
  574. MESALAMINE [Suspect]
     Active Substance: MESALAMINE
     Route: 048
  575. MESALAMINE [Suspect]
     Active Substance: MESALAMINE
     Route: 048
  576. MESALAMINE [Suspect]
     Active Substance: MESALAMINE
     Route: 065
  577. MESALAMINE [Suspect]
     Active Substance: MESALAMINE
     Route: 065
  578. MESALAMINE [Suspect]
     Active Substance: MESALAMINE
     Route: 065
  579. MESALAMINE [Suspect]
     Active Substance: MESALAMINE
     Route: 065
  580. MESALAMINE [Suspect]
     Active Substance: MESALAMINE
     Route: 065
  581. MESALAMINE [Suspect]
     Active Substance: MESALAMINE
     Route: 065
  582. MESALAMINE [Suspect]
     Active Substance: MESALAMINE
     Route: 065
  583. MESALAMINE [Suspect]
     Active Substance: MESALAMINE
     Route: 065
  584. MESALAMINE [Suspect]
     Active Substance: MESALAMINE
     Route: 065
  585. MESALAMINE [Suspect]
     Active Substance: MESALAMINE
     Route: 065
  586. MESALAMINE [Suspect]
     Active Substance: MESALAMINE
     Route: 065
  587. MESALAMINE [Suspect]
     Active Substance: MESALAMINE
     Route: 065
  588. MESALAMINE [Suspect]
     Active Substance: MESALAMINE
     Route: 065
  589. MESALAMINE [Suspect]
     Active Substance: MESALAMINE
     Route: 065
  590. MESALAMINE [Suspect]
     Active Substance: MESALAMINE
     Route: 065
  591. MESALAMINE [Suspect]
     Active Substance: MESALAMINE
     Route: 065
  592. MESALAMINE [Suspect]
     Active Substance: MESALAMINE
     Route: 065
  593. MESALAMINE [Suspect]
     Active Substance: MESALAMINE
     Indication: Colitis ulcerative
     Route: 065
  594. MESALAMINE [Suspect]
     Active Substance: MESALAMINE
     Route: 065
  595. MESALAMINE [Suspect]
     Active Substance: MESALAMINE
     Route: 065
  596. MESALAMINE [Suspect]
     Active Substance: MESALAMINE
     Route: 065
  597. MESALAMINE [Suspect]
     Active Substance: MESALAMINE
     Route: 048
  598. MESALAMINE [Suspect]
     Active Substance: MESALAMINE
     Route: 065
  599. MESALAMINE [Suspect]
     Active Substance: MESALAMINE
     Route: 065
  600. MESALAMINE [Suspect]
     Active Substance: MESALAMINE
     Route: 065
  601. MESALAMINE [Suspect]
     Active Substance: MESALAMINE
     Route: 065
  602. MESALAMINE [Suspect]
     Active Substance: MESALAMINE
     Route: 065
  603. MESALAMINE [Suspect]
     Active Substance: MESALAMINE
     Route: 065
  604. MESALAMINE [Suspect]
     Active Substance: MESALAMINE
     Route: 065
  605. MESALAMINE [Suspect]
     Active Substance: MESALAMINE
     Route: 065
  606. MESALAMINE [Suspect]
     Active Substance: MESALAMINE
     Route: 065
  607. MESALAMINE [Suspect]
     Active Substance: MESALAMINE
     Route: 048
  608. MESALAMINE [Suspect]
     Active Substance: MESALAMINE
     Route: 048
  609. MESALAMINE [Suspect]
     Active Substance: MESALAMINE
     Route: 065
  610. MESALAMINE [Suspect]
     Active Substance: MESALAMINE
     Route: 065
  611. MESALAMINE [Suspect]
     Active Substance: MESALAMINE
     Route: 065
  612. MESALAMINE [Suspect]
     Active Substance: MESALAMINE
     Route: 048
  613. MESALAMINE [Suspect]
     Active Substance: MESALAMINE
     Route: 065
  614. MESALAMINE [Suspect]
     Active Substance: MESALAMINE
     Route: 048
  615. MESALAMINE [Suspect]
     Active Substance: MESALAMINE
     Route: 065
  616. MESALAMINE [Suspect]
     Active Substance: MESALAMINE
     Route: 065
  617. MESALAMINE [Suspect]
     Active Substance: MESALAMINE
     Route: 065
  618. MESALAMINE [Suspect]
     Active Substance: MESALAMINE
     Route: 065
  619. MESALAMINE [Suspect]
     Active Substance: MESALAMINE
     Route: 065
  620. MESALAMINE [Suspect]
     Active Substance: MESALAMINE
  621. MESALAMINE [Suspect]
     Active Substance: MESALAMINE
  622. MESALAMINE [Suspect]
     Active Substance: MESALAMINE
  623. MESALAMINE [Suspect]
     Active Substance: MESALAMINE
  624. MESALAMINE [Suspect]
     Active Substance: MESALAMINE
  625. MESALAMINE [Suspect]
     Active Substance: MESALAMINE
  626. MESALAMINE [Suspect]
     Active Substance: MESALAMINE
     Route: 065
  627. MESALAMINE [Suspect]
     Active Substance: MESALAMINE
  628. MESALAMINE [Suspect]
     Active Substance: MESALAMINE
     Route: 065
  629. MESALAMINE [Suspect]
     Active Substance: MESALAMINE
     Route: 065
  630. MESALAMINE [Suspect]
     Active Substance: MESALAMINE
     Route: 065
  631. MESALAMINE [Suspect]
     Active Substance: MESALAMINE
     Route: 065
  632. MESALAMINE [Suspect]
     Active Substance: MESALAMINE
     Route: 065
  633. MESALAMINE [Suspect]
     Active Substance: MESALAMINE
     Route: 065
  634. MESALAMINE [Suspect]
     Active Substance: MESALAMINE
     Route: 065
  635. MESALAMINE [Suspect]
     Active Substance: MESALAMINE
     Route: 065
  636. MESALAMINE [Suspect]
     Active Substance: MESALAMINE
     Route: 065
  637. MESALAMINE [Suspect]
     Active Substance: MESALAMINE
     Route: 065
  638. MESALAMINE [Suspect]
     Active Substance: MESALAMINE
     Route: 065
  639. MESALAMINE [Suspect]
     Active Substance: MESALAMINE
     Route: 065
  640. MESALAMINE [Suspect]
     Active Substance: MESALAMINE
     Route: 065
  641. MESALAMINE [Suspect]
     Active Substance: MESALAMINE
     Route: 065
  642. MESALAMINE [Suspect]
     Active Substance: MESALAMINE
     Route: 065
  643. MESALAMINE [Suspect]
     Active Substance: MESALAMINE
     Indication: Colitis ulcerative
     Route: 065
  644. MESALAMINE [Suspect]
     Active Substance: MESALAMINE
     Indication: Deep vein thrombosis
     Route: 065
  645. MESALAMINE [Suspect]
     Active Substance: MESALAMINE
     Route: 065
  646. MESALAMINE [Suspect]
     Active Substance: MESALAMINE
     Route: 065
  647. MESALAMINE [Suspect]
     Active Substance: MESALAMINE
     Route: 065
  648. MESALAMINE [Suspect]
     Active Substance: MESALAMINE
     Route: 065
  649. MESALAMINE [Suspect]
     Active Substance: MESALAMINE
     Route: 065
  650. MESALAMINE [Suspect]
     Active Substance: MESALAMINE
     Route: 065
  651. MESALAMINE [Suspect]
     Active Substance: MESALAMINE
     Route: 048
  652. MESALAMINE [Suspect]
     Active Substance: MESALAMINE
     Route: 065
  653. MESALAMINE [Suspect]
     Active Substance: MESALAMINE
     Route: 048
  654. MESALAMINE [Suspect]
     Active Substance: MESALAMINE
     Route: 065
  655. MESALAMINE [Suspect]
     Active Substance: MESALAMINE
     Route: 065
  656. MESALAMINE [Suspect]
     Active Substance: MESALAMINE
     Route: 065
  657. MESALAMINE [Suspect]
     Active Substance: MESALAMINE
     Route: 065
  658. MESALAMINE [Suspect]
     Active Substance: MESALAMINE
     Route: 065
  659. MESALAMINE [Suspect]
     Active Substance: MESALAMINE
     Route: 065
  660. MESALAMINE [Suspect]
     Active Substance: MESALAMINE
     Route: 065
  661. MESALAMINE [Suspect]
     Active Substance: MESALAMINE
  662. MESALAMINE [Suspect]
     Active Substance: MESALAMINE
     Route: 065
  663. MESALAMINE [Suspect]
     Active Substance: MESALAMINE
     Route: 065
  664. MESALAMINE [Suspect]
     Active Substance: MESALAMINE
     Route: 065
  665. MESALAMINE [Suspect]
     Active Substance: MESALAMINE
     Route: 048
  666. MESALAMINE [Suspect]
     Active Substance: MESALAMINE
     Route: 065
  667. MESALAMINE [Suspect]
     Active Substance: MESALAMINE
     Route: 065
  668. MESALAMINE [Suspect]
     Active Substance: MESALAMINE
     Route: 065
  669. MESALAMINE [Suspect]
     Active Substance: MESALAMINE
     Route: 065
  670. MESALAMINE [Suspect]
     Active Substance: MESALAMINE
     Route: 065
  671. MESALAMINE [Suspect]
     Active Substance: MESALAMINE
     Route: 065
  672. MESALAMINE [Suspect]
     Active Substance: MESALAMINE
     Route: 048
  673. MESALAMINE [Suspect]
     Active Substance: MESALAMINE
     Route: 048
  674. MESALAMINE [Suspect]
     Active Substance: MESALAMINE
     Route: 065
  675. MESALAMINE [Suspect]
     Active Substance: MESALAMINE
     Route: 048
  676. MESALAMINE [Suspect]
     Active Substance: MESALAMINE
     Route: 065
  677. MESALAMINE [Suspect]
     Active Substance: MESALAMINE
     Route: 065
  678. MESALAMINE [Suspect]
     Active Substance: MESALAMINE
     Route: 048
  679. MESALAMINE [Suspect]
     Active Substance: MESALAMINE
     Route: 048
  680. MESALAMINE [Suspect]
     Active Substance: MESALAMINE
     Route: 048
  681. MESALAMINE [Suspect]
     Active Substance: MESALAMINE
     Route: 065
  682. MESALAMINE [Suspect]
     Active Substance: MESALAMINE
     Route: 065
  683. MESALAMINE [Suspect]
     Active Substance: MESALAMINE
     Route: 065
  684. MESALAMINE [Suspect]
     Active Substance: MESALAMINE
     Route: 065
  685. MESALAMINE [Suspect]
     Active Substance: MESALAMINE
     Route: 065
  686. MESALAMINE [Suspect]
     Active Substance: MESALAMINE
     Route: 048
  687. MESALAMINE [Suspect]
     Active Substance: MESALAMINE
     Route: 065
  688. MESALAMINE [Suspect]
     Active Substance: MESALAMINE
     Route: 065
  689. MESALAMINE [Suspect]
     Active Substance: MESALAMINE
     Route: 065
  690. MESALAMINE [Suspect]
     Active Substance: MESALAMINE
     Route: 048
  691. MESALAMINE [Suspect]
     Active Substance: MESALAMINE
     Route: 065
  692. MESALAMINE [Suspect]
     Active Substance: MESALAMINE
     Route: 065
  693. MESALAMINE [Suspect]
     Active Substance: MESALAMINE
     Indication: Colitis ulcerative
     Route: 065
  694. MESALAMINE [Suspect]
     Active Substance: MESALAMINE
     Route: 065
  695. MESALAMINE [Suspect]
     Active Substance: MESALAMINE
     Route: 065
  696. MESALAMINE [Suspect]
     Active Substance: MESALAMINE
     Route: 065
  697. MESALAMINE [Suspect]
     Active Substance: MESALAMINE
     Route: 065
  698. MESALAMINE [Suspect]
     Active Substance: MESALAMINE
     Route: 065
  699. MESALAMINE [Suspect]
     Active Substance: MESALAMINE
     Route: 065
  700. MESALAMINE [Suspect]
     Active Substance: MESALAMINE
     Route: 065
  701. MESALAMINE [Suspect]
     Active Substance: MESALAMINE
     Route: 065
  702. MESALAMINE [Suspect]
     Active Substance: MESALAMINE
     Route: 065
  703. MESALAMINE [Suspect]
     Active Substance: MESALAMINE
     Route: 065
  704. MESALAMINE [Suspect]
     Active Substance: MESALAMINE
     Route: 065
  705. MESALAMINE [Suspect]
     Active Substance: MESALAMINE
     Route: 065
  706. MESALAMINE [Suspect]
     Active Substance: MESALAMINE
     Route: 065
  707. MESALAMINE [Suspect]
     Active Substance: MESALAMINE
     Route: 065
  708. MESALAMINE [Suspect]
     Active Substance: MESALAMINE
     Route: 065
  709. MESALAMINE [Suspect]
     Active Substance: MESALAMINE
     Route: 048
  710. MESALAMINE [Suspect]
     Active Substance: MESALAMINE
     Route: 065
  711. MESALAMINE [Suspect]
     Active Substance: MESALAMINE
     Route: 048
  712. MESALAMINE [Suspect]
     Active Substance: MESALAMINE
     Route: 065
  713. MESALAMINE [Suspect]
     Active Substance: MESALAMINE
     Route: 065
  714. MESALAMINE [Suspect]
     Active Substance: MESALAMINE
     Route: 065
  715. MESALAMINE [Suspect]
     Active Substance: MESALAMINE
     Route: 065
  716. MESALAMINE [Suspect]
     Active Substance: MESALAMINE
     Route: 065
  717. MESALAMINE [Suspect]
     Active Substance: MESALAMINE
     Route: 048
  718. MESALAMINE [Suspect]
     Active Substance: MESALAMINE
     Route: 065
  719. MESALAMINE [Suspect]
     Active Substance: MESALAMINE
     Route: 065
  720. MESALAMINE [Suspect]
     Active Substance: MESALAMINE
     Route: 065
  721. MESALAMINE [Suspect]
     Active Substance: MESALAMINE
     Route: 048
  722. MESALAMINE [Suspect]
     Active Substance: MESALAMINE
     Route: 048
  723. MESALAMINE [Suspect]
     Active Substance: MESALAMINE
     Route: 065
  724. MESALAMINE [Suspect]
     Active Substance: MESALAMINE
     Route: 065
  725. MESALAMINE [Suspect]
     Active Substance: MESALAMINE
     Route: 065
  726. MESALAMINE [Suspect]
     Active Substance: MESALAMINE
     Route: 065
  727. MESALAMINE [Suspect]
     Active Substance: MESALAMINE
     Route: 065
  728. MESALAMINE [Suspect]
     Active Substance: MESALAMINE
     Route: 048
  729. MESALAMINE [Suspect]
     Active Substance: MESALAMINE
     Route: 065
  730. MESALAMINE [Suspect]
     Active Substance: MESALAMINE
     Route: 065
  731. MESALAMINE [Suspect]
     Active Substance: MESALAMINE
     Route: 048
  732. MESALAMINE [Suspect]
     Active Substance: MESALAMINE
     Route: 065
  733. MESALAMINE [Suspect]
     Active Substance: MESALAMINE
     Route: 065
  734. MESALAMINE [Suspect]
     Active Substance: MESALAMINE
     Route: 065
  735. MESALAMINE [Suspect]
     Active Substance: MESALAMINE
     Route: 048
  736. MESALAMINE [Suspect]
     Active Substance: MESALAMINE
     Route: 065
  737. MESALAMINE [Suspect]
     Active Substance: MESALAMINE
     Route: 065
  738. MESALAMINE [Suspect]
     Active Substance: MESALAMINE
     Route: 065
  739. MESALAMINE [Suspect]
     Active Substance: MESALAMINE
     Route: 065
  740. MESALAMINE [Suspect]
     Active Substance: MESALAMINE
     Route: 065
  741. MESALAMINE [Suspect]
     Active Substance: MESALAMINE
     Route: 065
  742. MESALAMINE [Suspect]
     Active Substance: MESALAMINE
     Route: 065
  743. MESALAMINE [Suspect]
     Active Substance: MESALAMINE
     Indication: Colitis ulcerative
     Route: 048
  744. MESALAMINE [Suspect]
     Active Substance: MESALAMINE
     Indication: Deep vein thrombosis
     Route: 065
  745. MESALAMINE [Suspect]
     Active Substance: MESALAMINE
     Route: 065
  746. MESALAMINE [Suspect]
     Active Substance: MESALAMINE
     Route: 065
  747. MESALAMINE [Suspect]
     Active Substance: MESALAMINE
     Route: 065
  748. MESALAMINE [Suspect]
     Active Substance: MESALAMINE
     Route: 065
  749. MESALAMINE [Suspect]
     Active Substance: MESALAMINE
     Route: 065
  750. MESALAMINE [Suspect]
     Active Substance: MESALAMINE
     Route: 065
  751. MESALAMINE [Suspect]
     Active Substance: MESALAMINE
     Route: 065
  752. MESALAMINE [Suspect]
     Active Substance: MESALAMINE
     Route: 065
  753. MESALAMINE [Suspect]
     Active Substance: MESALAMINE
     Route: 065
  754. MESALAMINE [Suspect]
     Active Substance: MESALAMINE
     Route: 065
  755. MESALAMINE [Suspect]
     Active Substance: MESALAMINE
     Route: 065
  756. MESALAMINE [Suspect]
     Active Substance: MESALAMINE
     Route: 065
  757. MESALAMINE [Suspect]
     Active Substance: MESALAMINE
     Route: 065
  758. MESALAMINE [Suspect]
     Active Substance: MESALAMINE
     Route: 065
  759. MESALAMINE [Suspect]
     Active Substance: MESALAMINE
     Route: 065
  760. MESALAMINE [Suspect]
     Active Substance: MESALAMINE
     Route: 065
  761. MESALAMINE [Suspect]
     Active Substance: MESALAMINE
     Route: 065
  762. MESALAMINE [Suspect]
     Active Substance: MESALAMINE
     Route: 065
  763. MESALAMINE [Suspect]
     Active Substance: MESALAMINE
     Route: 048
  764. MESALAMINE [Suspect]
     Active Substance: MESALAMINE
     Route: 048
  765. MESALAMINE [Suspect]
     Active Substance: MESALAMINE
     Route: 048
  766. MESALAMINE [Suspect]
     Active Substance: MESALAMINE
     Route: 065
  767. MESALAMINE [Suspect]
     Active Substance: MESALAMINE
     Route: 065
  768. MESALAMINE [Suspect]
     Active Substance: MESALAMINE
     Route: 065
  769. MESALAMINE [Suspect]
     Active Substance: MESALAMINE
     Route: 065
  770. MESALAMINE [Suspect]
     Active Substance: MESALAMINE
     Route: 065
  771. MESALAMINE [Suspect]
     Active Substance: MESALAMINE
     Route: 065
  772. MESALAMINE [Suspect]
     Active Substance: MESALAMINE
     Route: 048
  773. MESALAMINE [Suspect]
     Active Substance: MESALAMINE
     Route: 065
  774. MESALAMINE [Suspect]
     Active Substance: MESALAMINE
     Route: 065
  775. MESALAMINE [Suspect]
     Active Substance: MESALAMINE
     Route: 065
  776. MESALAMINE [Suspect]
     Active Substance: MESALAMINE
     Route: 065
  777. MESALAMINE [Suspect]
     Active Substance: MESALAMINE
     Route: 065
  778. MESALAMINE [Suspect]
     Active Substance: MESALAMINE
     Route: 065
  779. MESALAMINE [Suspect]
     Active Substance: MESALAMINE
     Route: 065
  780. MESALAMINE [Suspect]
     Active Substance: MESALAMINE
     Route: 065
  781. MESALAMINE [Suspect]
     Active Substance: MESALAMINE
     Route: 065
  782. MESALAMINE [Suspect]
     Active Substance: MESALAMINE
     Route: 065
  783. MESALAMINE [Suspect]
     Active Substance: MESALAMINE
     Route: 065
  784. MESALAMINE [Suspect]
     Active Substance: MESALAMINE
     Route: 065
  785. MESALAMINE [Suspect]
     Active Substance: MESALAMINE
     Route: 065
  786. MESALAMINE [Suspect]
     Active Substance: MESALAMINE
     Route: 065
  787. MESALAMINE [Suspect]
     Active Substance: MESALAMINE
     Route: 065
  788. MESALAMINE [Suspect]
     Active Substance: MESALAMINE
     Route: 048
  789. MESALAMINE [Suspect]
     Active Substance: MESALAMINE
     Route: 048
  790. MESALAMINE [Suspect]
     Active Substance: MESALAMINE
     Route: 065
  791. MESALAMINE [Suspect]
     Active Substance: MESALAMINE
     Route: 065
  792. MESALAMINE [Suspect]
     Active Substance: MESALAMINE
     Route: 065
  793. MESALAMINE [Suspect]
     Active Substance: MESALAMINE
     Indication: Colitis ulcerative
     Route: 065
  794. MESALAMINE [Suspect]
     Active Substance: MESALAMINE
     Route: 065
  795. MESALAMINE [Suspect]
     Active Substance: MESALAMINE
     Route: 048
  796. MESALAMINE [Suspect]
     Active Substance: MESALAMINE
     Route: 065
  797. MESALAMINE [Suspect]
     Active Substance: MESALAMINE
     Route: 048
  798. MESALAMINE [Suspect]
     Active Substance: MESALAMINE
     Route: 065
  799. MESALAMINE [Suspect]
     Active Substance: MESALAMINE
     Route: 048
  800. MESALAMINE [Suspect]
     Active Substance: MESALAMINE
     Route: 065
  801. MESALAMINE [Suspect]
     Active Substance: MESALAMINE
     Route: 065
  802. MESALAMINE [Suspect]
     Active Substance: MESALAMINE
     Route: 065
  803. MESALAMINE [Suspect]
     Active Substance: MESALAMINE
     Route: 065
  804. MESALAMINE [Suspect]
     Active Substance: MESALAMINE
     Route: 065
  805. MESALAMINE [Suspect]
     Active Substance: MESALAMINE
     Route: 065
  806. MESALAMINE [Suspect]
     Active Substance: MESALAMINE
     Route: 065
  807. MESALAMINE [Suspect]
     Active Substance: MESALAMINE
     Route: 065
  808. MESALAMINE [Suspect]
     Active Substance: MESALAMINE
     Route: 065
  809. MESALAMINE [Suspect]
     Active Substance: MESALAMINE
     Route: 065
  810. MESALAMINE [Suspect]
     Active Substance: MESALAMINE
     Route: 065
  811. MESALAMINE [Suspect]
     Active Substance: MESALAMINE
     Route: 048
  812. MESALAMINE [Suspect]
     Active Substance: MESALAMINE
     Route: 048
  813. MESALAMINE [Suspect]
     Active Substance: MESALAMINE
     Route: 048
  814. MESALAMINE [Suspect]
     Active Substance: MESALAMINE
     Route: 065
  815. MESALAMINE [Suspect]
     Active Substance: MESALAMINE
     Route: 065
  816. MESALAMINE [Suspect]
     Active Substance: MESALAMINE
     Route: 065
  817. MESALAMINE [Suspect]
     Active Substance: MESALAMINE
     Route: 048
  818. MESALAMINE [Suspect]
     Active Substance: MESALAMINE
     Route: 065
  819. MESALAMINE [Suspect]
     Active Substance: MESALAMINE
     Route: 048
  820. MESALAMINE [Suspect]
     Active Substance: MESALAMINE
     Route: 065
  821. MESALAMINE [Suspect]
     Active Substance: MESALAMINE
     Route: 065
  822. MESALAMINE [Suspect]
     Active Substance: MESALAMINE
     Route: 048
  823. MESALAMINE [Suspect]
     Active Substance: MESALAMINE
     Route: 065
  824. MESALAMINE [Suspect]
     Active Substance: MESALAMINE
     Route: 065
  825. MESALAMINE [Suspect]
     Active Substance: MESALAMINE
     Route: 065
  826. MESALAMINE [Suspect]
     Active Substance: MESALAMINE
     Route: 065
  827. MESALAMINE [Suspect]
     Active Substance: MESALAMINE
     Route: 065
  828. MESALAMINE [Suspect]
     Active Substance: MESALAMINE
     Route: 065
  829. MESALAMINE [Suspect]
     Active Substance: MESALAMINE
     Route: 048
  830. MESALAMINE [Suspect]
     Active Substance: MESALAMINE
     Route: 065
  831. MESALAMINE [Suspect]
     Active Substance: MESALAMINE
     Route: 065
  832. MESALAMINE [Suspect]
     Active Substance: MESALAMINE
     Route: 065
  833. MESALAMINE [Suspect]
     Active Substance: MESALAMINE
     Route: 048
  834. MESALAMINE [Suspect]
     Active Substance: MESALAMINE
     Route: 048
  835. MESALAMINE [Suspect]
     Active Substance: MESALAMINE
     Route: 048
  836. MESALAMINE [Suspect]
     Active Substance: MESALAMINE
     Dosage: 2.4 GRAM, 1 EVERY 1 MONTH
     Route: 065
  837. MESALAMINE [Suspect]
     Active Substance: MESALAMINE
     Route: 065
  838. MESALAMINE [Suspect]
     Active Substance: MESALAMINE
     Route: 065
  839. MESALAMINE [Suspect]
     Active Substance: MESALAMINE
     Route: 065
  840. MESALAMINE [Suspect]
     Active Substance: MESALAMINE
     Route: 065
  841. MESALAMINE [Suspect]
     Active Substance: MESALAMINE
     Route: 065
  842. MESALAMINE [Suspect]
     Active Substance: MESALAMINE
     Route: 065
  843. MESALAMINE [Suspect]
     Active Substance: MESALAMINE
     Indication: Colitis ulcerative
     Route: 065
  844. PREDNISONE [Suspect]
     Active Substance: PREDNISONE
     Indication: Colitis ulcerative
     Route: 065
  845. PREDNISONE [Suspect]
     Active Substance: PREDNISONE
     Route: 065
  846. PREDNISONE [Suspect]
     Active Substance: PREDNISONE
     Route: 065
  847. PREDNISONE [Suspect]
     Active Substance: PREDNISONE
     Route: 065
  848. PREDNISONE [Suspect]
     Active Substance: PREDNISONE
     Route: 065
  849. PREDNISONE [Suspect]
     Active Substance: PREDNISONE
     Route: 065
  850. PREDNISONE [Suspect]
     Active Substance: PREDNISONE
     Route: 065
  851. PREDNISONE [Suspect]
     Active Substance: PREDNISONE
     Route: 065
  852. PREDNISONE [Suspect]
     Active Substance: PREDNISONE
     Route: 065
  853. PREDNISONE [Suspect]
     Active Substance: PREDNISONE
     Route: 065
  854. PREDNISONE [Suspect]
     Active Substance: PREDNISONE
     Route: 065
  855. PREDNISONE [Suspect]
     Active Substance: PREDNISONE
     Route: 048
  856. PREDNISONE [Suspect]
     Active Substance: PREDNISONE
     Route: 065
  857. PREDNISONE [Suspect]
     Active Substance: PREDNISONE
     Route: 065
  858. PREDNISONE [Suspect]
     Active Substance: PREDNISONE
     Route: 048
  859. PREDNISONE [Suspect]
     Active Substance: PREDNISONE
     Route: 065
  860. PREDNISONE [Suspect]
     Active Substance: PREDNISONE
     Route: 065
  861. PREDNISONE [Suspect]
     Active Substance: PREDNISONE
     Route: 065
  862. PREDNISONE [Suspect]
     Active Substance: PREDNISONE
     Route: 065
  863. PREDNISONE [Suspect]
     Active Substance: PREDNISONE
     Route: 065
  864. PREDNISONE [Suspect]
     Active Substance: PREDNISONE
     Route: 065
  865. PREDNISONE [Suspect]
     Active Substance: PREDNISONE
     Route: 065
  866. PREDNISONE [Suspect]
     Active Substance: PREDNISONE
     Route: 065
  867. PREDNISONE [Suspect]
     Active Substance: PREDNISONE
     Route: 065
  868. PREDNISONE [Suspect]
     Active Substance: PREDNISONE
     Indication: Colitis ulcerative
     Route: 065
  869. PREDNISONE [Suspect]
     Active Substance: PREDNISONE
     Route: 065
  870. PREDNISONE [Suspect]
     Active Substance: PREDNISONE
     Route: 065
  871. PREDNISONE [Suspect]
     Active Substance: PREDNISONE
     Route: 048
  872. PREDNISONE [Suspect]
     Active Substance: PREDNISONE
     Route: 065
  873. PREDNISONE [Suspect]
     Active Substance: PREDNISONE
     Route: 065
  874. PREDNISONE [Suspect]
     Active Substance: PREDNISONE
     Route: 048
  875. PREDNISONE [Suspect]
     Active Substance: PREDNISONE
     Route: 065
  876. PREDNISONE [Suspect]
     Active Substance: PREDNISONE
     Route: 065
  877. PREDNISONE [Suspect]
     Active Substance: PREDNISONE
  878. PREDNISONE [Suspect]
     Active Substance: PREDNISONE
     Route: 065
  879. PREDNISONE [Suspect]
     Active Substance: PREDNISONE
     Route: 048
  880. PREDNISONE [Suspect]
     Active Substance: PREDNISONE
  881. PREDNISONE [Suspect]
     Active Substance: PREDNISONE
  882. PREDNISONE [Suspect]
     Active Substance: PREDNISONE
  883. PREDNISONE [Suspect]
     Active Substance: PREDNISONE
  884. PREDNISONE [Suspect]
     Active Substance: PREDNISONE
  885. PREDNISONE [Suspect]
     Active Substance: PREDNISONE
  886. PREDNISONE [Suspect]
     Active Substance: PREDNISONE
  887. PREDNISONE [Suspect]
     Active Substance: PREDNISONE
  888. PREDNISONE [Suspect]
     Active Substance: PREDNISONE
  889. PREDNISONE [Suspect]
     Active Substance: PREDNISONE
  890. PREDNISONE [Suspect]
     Active Substance: PREDNISONE
     Indication: Colitis ulcerative
     Route: 065
  891. PREDNISONE [Suspect]
     Active Substance: PREDNISONE
     Route: 065
  892. PREDNISONE [Suspect]
     Active Substance: PREDNISONE
     Route: 048
  893. PREDNISONE [Suspect]
     Active Substance: PREDNISONE
     Route: 065
  894. PREDNISONE [Suspect]
     Active Substance: PREDNISONE
     Route: 065
  895. PREDNISONE [Suspect]
     Active Substance: PREDNISONE
     Route: 048
  896. PREDNISONE [Suspect]
     Active Substance: PREDNISONE
     Route: 048
  897. PREDNISONE [Suspect]
     Active Substance: PREDNISONE
     Route: 065
  898. PREDNISONE [Suspect]
     Active Substance: PREDNISONE
     Route: 048
  899. PREDNISONE [Suspect]
     Active Substance: PREDNISONE
     Route: 065
  900. PREDNISONE [Suspect]
     Active Substance: PREDNISONE
     Route: 065
  901. PREDNISONE [Suspect]
     Active Substance: PREDNISONE
     Route: 065
  902. PREDNISONE [Suspect]
     Active Substance: PREDNISONE
  903. PREDNISONE [Suspect]
     Active Substance: PREDNISONE
     Route: 065
  904. PREDNISONE [Suspect]
     Active Substance: PREDNISONE
  905. PREDNISONE [Suspect]
     Active Substance: PREDNISONE
  906. PREDNISONE [Suspect]
     Active Substance: PREDNISONE
  907. PREDNISONE [Suspect]
     Active Substance: PREDNISONE
     Route: 065
  908. MESALAMINE [Suspect]
     Active Substance: MESALAMINE
     Indication: Colitis ulcerative
     Route: 065
  909. MESALAMINE [Suspect]
     Active Substance: MESALAMINE
     Route: 065
  910. MESALAMINE [Suspect]
     Active Substance: MESALAMINE
     Route: 065
  911. SULFASALAZINE [Suspect]
     Active Substance: SULFASALAZINE
     Indication: Colitis ulcerative
     Route: 065
  912. SULFASALAZINE [Suspect]
     Active Substance: SULFASALAZINE
     Route: 048
  913. SULFASALAZINE [Suspect]
     Active Substance: SULFASALAZINE
     Route: 065
  914. SULFASALAZINE [Suspect]
     Active Substance: SULFASALAZINE
     Route: 065
  915. SULFASALAZINE [Suspect]
     Active Substance: SULFASALAZINE
     Route: 048
  916. SULFASALAZINE [Suspect]
     Active Substance: SULFASALAZINE
     Route: 065
  917. SULFASALAZINE [Suspect]
     Active Substance: SULFASALAZINE
     Route: 065
  918. SULFASALAZINE [Suspect]
     Active Substance: SULFASALAZINE
     Indication: Colitis ulcerative
     Route: 065
  919. SULFASALAZINE [Suspect]
     Active Substance: SULFASALAZINE
     Indication: Arthritis
     Route: 065
  920. SULFASALAZINE [Suspect]
     Active Substance: SULFASALAZINE
     Route: 065
  921. SULFASALAZINE [Suspect]
     Active Substance: SULFASALAZINE
     Route: 065
  922. SULFASALAZINE [Suspect]
     Active Substance: SULFASALAZINE
     Route: 065
  923. SULFASALAZINE [Suspect]
     Active Substance: SULFASALAZINE
     Route: 048
  924. SULFASALAZINE [Suspect]
     Active Substance: SULFASALAZINE
     Route: 048
  925. SULFASALAZINE [Suspect]
     Active Substance: SULFASALAZINE
     Route: 065
  926. SULFASALAZINE [Suspect]
     Active Substance: SULFASALAZINE
     Route: 065
  927. SULFASALAZINE [Suspect]
     Active Substance: SULFASALAZINE
     Route: 065
  928. SULFASALAZINE [Suspect]
     Active Substance: SULFASALAZINE
     Route: 065
  929. SULFASALAZINE [Suspect]
     Active Substance: SULFASALAZINE
     Route: 065
  930. SULFASALAZINE [Suspect]
     Active Substance: SULFASALAZINE
     Route: 065
  931. SULFASALAZINE [Suspect]
     Active Substance: SULFASALAZINE
     Route: 065
  932. SULFASALAZINE [Suspect]
     Active Substance: SULFASALAZINE
     Route: 065
  933. SULFASALAZINE [Suspect]
     Active Substance: SULFASALAZINE
     Route: 065
  934. SULFASALAZINE [Suspect]
     Active Substance: SULFASALAZINE
     Route: 048
  935. SULFASALAZINE [Suspect]
     Active Substance: SULFASALAZINE
     Route: 065
  936. SULFASALAZINE [Suspect]
     Active Substance: SULFASALAZINE
     Route: 048
  937. SULFASALAZINE [Suspect]
     Active Substance: SULFASALAZINE
     Route: 048
  938. SULFASALAZINE [Suspect]
     Active Substance: SULFASALAZINE
     Route: 065
  939. SULFASALAZINE [Suspect]
     Active Substance: SULFASALAZINE
     Route: 065
  940. SULFASALAZINE [Suspect]
     Active Substance: SULFASALAZINE
     Route: 065
  941. SULFASALAZINE [Suspect]
     Active Substance: SULFASALAZINE
     Route: 065
  942. SULFASALAZINE [Suspect]
     Active Substance: SULFASALAZINE
     Route: 065
  943. SULFASALAZINE [Suspect]
     Active Substance: SULFASALAZINE
     Route: 048
  944. SULFASALAZINE [Suspect]
     Active Substance: SULFASALAZINE
     Route: 065
  945. SULFASALAZINE [Suspect]
     Active Substance: SULFASALAZINE
     Route: 048
  946. SULFASALAZINE [Suspect]
     Active Substance: SULFASALAZINE
     Route: 048
  947. SULFASALAZINE [Suspect]
     Active Substance: SULFASALAZINE
     Route: 048
  948. SULFASALAZINE [Suspect]
     Active Substance: SULFASALAZINE
     Route: 048
  949. SULFASALAZINE [Suspect]
     Active Substance: SULFASALAZINE
     Route: 048
  950. SULFASALAZINE [Suspect]
     Active Substance: SULFASALAZINE
     Route: 048
  951. SULFASALAZINE [Suspect]
     Active Substance: SULFASALAZINE
     Route: 048
  952. SULFASALAZINE [Suspect]
     Active Substance: SULFASALAZINE
     Route: 065
  953. SULFASALAZINE [Suspect]
     Active Substance: SULFASALAZINE
     Route: 065
  954. SULFASALAZINE [Suspect]
     Active Substance: SULFASALAZINE
     Route: 065
  955. SULFASALAZINE [Suspect]
     Active Substance: SULFASALAZINE
     Route: 065
  956. SULFASALAZINE [Suspect]
     Active Substance: SULFASALAZINE
     Route: 065
  957. SULFASALAZINE [Suspect]
     Active Substance: SULFASALAZINE
     Route: 065
  958. SULFASALAZINE [Suspect]
     Active Substance: SULFASALAZINE
     Route: 048
  959. SULFASALAZINE [Suspect]
     Active Substance: SULFASALAZINE
     Route: 065
  960. SULFASALAZINE [Suspect]
     Active Substance: SULFASALAZINE
     Route: 048
  961. SULFASALAZINE [Suspect]
     Active Substance: SULFASALAZINE
     Route: 048
  962. SULFASALAZINE [Suspect]
     Active Substance: SULFASALAZINE
     Route: 048
  963. SULFASALAZINE [Suspect]
     Active Substance: SULFASALAZINE
     Route: 048
  964. SULFASALAZINE [Suspect]
     Active Substance: SULFASALAZINE
     Route: 065
  965. SULFASALAZINE [Suspect]
     Active Substance: SULFASALAZINE
  966. SULFASALAZINE [Suspect]
     Active Substance: SULFASALAZINE
     Route: 065
  967. SULFASALAZINE [Suspect]
     Active Substance: SULFASALAZINE
  968. VEDOLIZUMAB [Suspect]
     Active Substance: VEDOLIZUMAB
     Indication: Colitis ulcerative
     Route: 042
  969. VEDOLIZUMAB [Suspect]
     Active Substance: VEDOLIZUMAB
     Route: 042
  970. VEDOLIZUMAB [Suspect]
     Active Substance: VEDOLIZUMAB
     Route: 048
  971. VEDOLIZUMAB [Suspect]
     Active Substance: VEDOLIZUMAB
     Route: 048
  972. VEDOLIZUMAB [Suspect]
     Active Substance: VEDOLIZUMAB
     Route: 042
  973. VEDOLIZUMAB [Suspect]
     Active Substance: VEDOLIZUMAB
     Indication: Colitis ulcerative
     Route: 048
  974. VEDOLIZUMAB [Suspect]
     Active Substance: VEDOLIZUMAB
     Indication: Deep vein thrombosis
     Route: 048
  975. VEDOLIZUMAB [Suspect]
     Active Substance: VEDOLIZUMAB
     Route: 065
  976. VEDOLIZUMAB [Suspect]
     Active Substance: VEDOLIZUMAB
     Route: 065
  977. VEDOLIZUMAB [Suspect]
     Active Substance: VEDOLIZUMAB
     Route: 042
  978. VEDOLIZUMAB [Suspect]
     Active Substance: VEDOLIZUMAB
     Route: 042
  979. VEDOLIZUMAB [Suspect]
     Active Substance: VEDOLIZUMAB
     Route: 048
  980. VEDOLIZUMAB [Suspect]
     Active Substance: VEDOLIZUMAB
     Route: 048
  981. VEDOLIZUMAB [Suspect]
     Active Substance: VEDOLIZUMAB
     Route: 048
  982. VEDOLIZUMAB [Suspect]
     Active Substance: VEDOLIZUMAB
     Route: 042
  983. VEDOLIZUMAB [Suspect]
     Active Substance: VEDOLIZUMAB
     Route: 065
  984. VEDOLIZUMAB [Suspect]
     Active Substance: VEDOLIZUMAB
     Route: 048
  985. VEDOLIZUMAB [Suspect]
     Active Substance: VEDOLIZUMAB
     Route: 065
  986. VEDOLIZUMAB [Suspect]
     Active Substance: VEDOLIZUMAB
     Route: 065
  987. VEDOLIZUMAB [Suspect]
     Active Substance: VEDOLIZUMAB
     Route: 065
  988. VEDOLIZUMAB [Suspect]
     Active Substance: VEDOLIZUMAB
     Route: 065
  989. VEDOLIZUMAB [Suspect]
     Active Substance: VEDOLIZUMAB
     Route: 065
  990. VEDOLIZUMAB [Suspect]
     Active Substance: VEDOLIZUMAB
     Route: 042
  991. VEDOLIZUMAB [Suspect]
     Active Substance: VEDOLIZUMAB
     Route: 042
  992. VEDOLIZUMAB [Suspect]
     Active Substance: VEDOLIZUMAB
     Route: 042
  993. VEDOLIZUMAB [Suspect]
     Active Substance: VEDOLIZUMAB
     Route: 048
  994. VEDOLIZUMAB [Suspect]
     Active Substance: VEDOLIZUMAB
     Route: 048
  995. VEDOLIZUMAB [Suspect]
     Active Substance: VEDOLIZUMAB
     Route: 048
  996. VEDOLIZUMAB [Suspect]
     Active Substance: VEDOLIZUMAB
     Route: 048
  997. VEDOLIZUMAB [Suspect]
     Active Substance: VEDOLIZUMAB
     Route: 048
  998. VEDOLIZUMAB [Suspect]
     Active Substance: VEDOLIZUMAB
     Route: 048
  999. VEDOLIZUMAB [Suspect]
     Active Substance: VEDOLIZUMAB
     Route: 048
  1000. WARFARIN [Suspect]
     Active Substance: WARFARIN
     Indication: Deep vein thrombosis
     Route: 065
  1001. WARFARIN SODIUM [Suspect]
     Active Substance: WARFARIN SODIUM
     Indication: Deep vein thrombosis
     Route: 048
  1002. WARFARIN SODIUM [Suspect]
     Active Substance: WARFARIN SODIUM
     Indication: Colitis ulcerative
     Route: 065
  1003. WARFARIN SODIUM [Suspect]
     Active Substance: WARFARIN SODIUM
     Route: 048
  1004. WARFARIN SODIUM [Suspect]
     Active Substance: WARFARIN SODIUM
     Route: 048
  1005. WARFARIN SODIUM [Suspect]
     Active Substance: WARFARIN SODIUM
     Route: 065
  1006. WARFARIN SODIUM [Suspect]
     Active Substance: WARFARIN SODIUM
     Indication: Product used for unknown indication
     Route: 065
  1007. WARFARIN SODIUM [Suspect]
     Active Substance: WARFARIN SODIUM
     Route: 048
  1008. WARFARIN SODIUM [Suspect]
     Active Substance: WARFARIN SODIUM
     Route: 065
  1009. WARFARIN SODIUM [Suspect]
     Active Substance: WARFARIN SODIUM
     Route: 065
  1010. ADALIMUMAB [Suspect]
     Active Substance: ADALIMUMAB
     Indication: Crohn^s disease
     Route: 065
  1011. ADALIMUMAB [Suspect]
     Active Substance: ADALIMUMAB
     Indication: Colitis ulcerative
     Route: 065
  1012. ADALIMUMAB [Suspect]
     Active Substance: ADALIMUMAB
     Indication: Deep vein thrombosis
     Route: 048
  1013. ADALIMUMAB [Suspect]
     Active Substance: ADALIMUMAB
     Route: 065
  1014. ADALIMUMAB [Suspect]
     Active Substance: ADALIMUMAB
     Route: 058
  1015. ADALIMUMAB [Suspect]
     Active Substance: ADALIMUMAB
     Route: 065
  1016. ADALIMUMAB [Suspect]
     Active Substance: ADALIMUMAB
     Route: 065
  1017. ADALIMUMAB [Suspect]
     Active Substance: ADALIMUMAB
     Route: 058
  1018. ADALIMUMAB [Suspect]
     Active Substance: ADALIMUMAB
     Route: 065
  1019. ADALIMUMAB [Suspect]
     Active Substance: ADALIMUMAB
     Route: 058
  1020. ADALIMUMAB [Suspect]
     Active Substance: ADALIMUMAB
     Indication: Crohn^s disease
     Route: 042
  1021. ADALIMUMAB [Suspect]
     Active Substance: ADALIMUMAB
     Indication: Colitis ulcerative
     Route: 058
  1022. ADALIMUMAB [Suspect]
     Active Substance: ADALIMUMAB
     Route: 048
  1023. ADALIMUMAB [Suspect]
     Active Substance: ADALIMUMAB
     Indication: Deep vein thrombosis
     Route: 065
  1024. ADALIMUMAB [Suspect]
     Active Substance: ADALIMUMAB
     Indication: Crohn^s disease
  1025. ADALIMUMAB [Suspect]
     Active Substance: ADALIMUMAB
     Indication: Colitis ulcerative
  1026. ADALIMUMAB [Suspect]
     Active Substance: ADALIMUMAB
     Route: 065
  1027. ADALIMUMAB [Suspect]
     Active Substance: ADALIMUMAB
     Route: 065
  1028. ADALIMUMAB [Suspect]
     Active Substance: ADALIMUMAB
     Route: 058
  1029. ADALIMUMAB [Suspect]
     Active Substance: ADALIMUMAB
     Route: 048
  1030. ADALIMUMAB [Suspect]
     Active Substance: ADALIMUMAB
     Route: 065
  1031. ADALIMUMAB [Suspect]
     Active Substance: ADALIMUMAB
     Route: 065
  1032. ADALIMUMAB [Suspect]
     Active Substance: ADALIMUMAB
     Route: 065
  1033. ADALIMUMAB [Suspect]
     Active Substance: ADALIMUMAB
     Route: 058
  1034. ADALIMUMAB [Suspect]
     Active Substance: ADALIMUMAB
     Route: 065
  1035. ACETAMINOPHEN [Suspect]
     Active Substance: ACETAMINOPHEN
     Indication: Ill-defined disorder
     Route: 065
  1036. ACETAMINOPHEN [Suspect]
     Active Substance: ACETAMINOPHEN
     Route: 065
  1037. ACETAMINOPHEN [Suspect]
     Active Substance: ACETAMINOPHEN
     Route: 065
  1038. ACETAMINOPHEN [Suspect]
     Active Substance: ACETAMINOPHEN
     Route: 065
  1039. ACETAMINOPHEN [Suspect]
     Active Substance: ACETAMINOPHEN
     Route: 065
  1040. ACETAMINOPHEN [Suspect]
     Active Substance: ACETAMINOPHEN
     Route: 065
  1041. ACETAMINOPHEN [Suspect]
     Active Substance: ACETAMINOPHEN
     Route: 065
  1042. ACETAMINOPHEN [Suspect]
     Active Substance: ACETAMINOPHEN
     Route: 065
  1043. ACETAMINOPHEN [Suspect]
     Active Substance: ACETAMINOPHEN
     Indication: Ill-defined disorder
     Route: 065
  1044. ACETAMINOPHEN [Suspect]
     Active Substance: ACETAMINOPHEN
     Route: 065
  1045. ACETAMINOPHEN [Suspect]
     Active Substance: ACETAMINOPHEN
     Route: 065
  1046. ACETAMINOPHEN [Suspect]
     Active Substance: ACETAMINOPHEN
     Route: 065
  1047. ASPIRIN [Suspect]
     Active Substance: ASPIRIN
     Indication: Ill-defined disorder
  1048. ASPIRIN [Suspect]
     Active Substance: ASPIRIN
  1049. ASPIRIN [Suspect]
     Active Substance: ASPIRIN
  1050. ASPIRIN [Suspect]
     Active Substance: ASPIRIN
  1051. ASPIRIN [Suspect]
     Active Substance: ASPIRIN
  1052. ASPIRIN [Suspect]
     Active Substance: ASPIRIN
  1053. ALBENDAZOLE [Suspect]
     Active Substance: ALBENDAZOLE
     Indication: Deep vein thrombosis
     Route: 042
  1054. ALBENDAZOLE [Suspect]
     Active Substance: ALBENDAZOLE
     Indication: Colitis ulcerative
     Route: 042
  1055. ALBENDAZOLE [Suspect]
     Active Substance: ALBENDAZOLE
     Indication: Crohn^s disease
     Route: 042
  1056. ALBENDAZOLE [Suspect]
     Active Substance: ALBENDAZOLE
     Route: 048
  1057. ALBENDAZOLE [Suspect]
     Active Substance: ALBENDAZOLE
     Route: 065
  1058. ALBENDAZOLE [Suspect]
     Active Substance: ALBENDAZOLE
     Route: 048
  1059. ASACOL [Suspect]
     Active Substance: MESALAMINE
     Indication: Colitis ulcerative
     Route: 065
  1060. ASACOL [Suspect]
     Active Substance: MESALAMINE
     Route: 065
  1061. ASACOL [Suspect]
     Active Substance: MESALAMINE
     Route: 065
  1062. ASACOL [Suspect]
     Active Substance: MESALAMINE
     Route: 065
  1063. ASACOL [Suspect]
     Active Substance: MESALAMINE
     Route: 065
  1064. ASACOL [Suspect]
     Active Substance: MESALAMINE
     Route: 065
  1065. ASACOL [Suspect]
     Active Substance: MESALAMINE
     Route: 065
  1066. ASACOL [Suspect]
     Active Substance: MESALAMINE
     Route: 065
  1067. ASACOL [Suspect]
     Active Substance: MESALAMINE
     Route: 065
  1068. ASACOL [Suspect]
     Active Substance: MESALAMINE
     Route: 065
  1069. ASACOL [Suspect]
     Active Substance: MESALAMINE
     Route: 065
  1070. ASACOL [Suspect]
     Active Substance: MESALAMINE
     Route: 065
  1071. ASACOL [Suspect]
     Active Substance: MESALAMINE
     Route: 065
  1072. ASACOL [Suspect]
     Active Substance: MESALAMINE
  1073. ASACOL [Suspect]
     Active Substance: MESALAMINE
     Route: 065
  1074. ASACOL [Suspect]
     Active Substance: MESALAMINE
     Route: 048
  1075. ASACOL [Suspect]
     Active Substance: MESALAMINE
     Route: 048
  1076. ASACOL [Suspect]
     Active Substance: MESALAMINE
     Route: 048
  1077. ASACOL [Suspect]
     Active Substance: MESALAMINE
     Route: 065
  1078. ASACOL [Suspect]
     Active Substance: MESALAMINE
     Route: 065
  1079. ASACOL [Suspect]
     Active Substance: MESALAMINE
     Route: 065
  1080. ASACOL [Suspect]
     Active Substance: MESALAMINE
     Route: 065
  1081. ASACOL [Suspect]
     Active Substance: MESALAMINE
     Route: 065
  1082. ASACOL [Suspect]
     Active Substance: MESALAMINE
     Route: 065
  1083. ASACOL [Suspect]
     Active Substance: MESALAMINE
  1084. ASACOL [Suspect]
     Active Substance: MESALAMINE
  1085. ASACOL [Suspect]
     Active Substance: MESALAMINE
  1086. ASACOL [Suspect]
     Active Substance: MESALAMINE
     Route: 065
  1087. ASACOL [Suspect]
     Active Substance: MESALAMINE
  1088. ASACOL [Suspect]
     Active Substance: MESALAMINE
     Route: 065
  1089. ASACOL [Suspect]
     Active Substance: MESALAMINE
     Route: 065
  1090. ASACOL [Suspect]
     Active Substance: MESALAMINE
     Route: 065
  1091. ASACOL [Suspect]
     Active Substance: MESALAMINE
     Route: 065
  1092. ASACOL [Suspect]
     Active Substance: MESALAMINE
     Route: 065
  1093. ASACOL [Suspect]
     Active Substance: MESALAMINE
     Route: 065
  1094. ASACOL [Suspect]
     Active Substance: MESALAMINE
     Route: 065
  1095. ASACOL [Suspect]
     Active Substance: MESALAMINE
     Route: 048
  1096. ASACOL [Suspect]
     Active Substance: MESALAMINE
     Route: 048
  1097. ASACOL [Suspect]
     Active Substance: MESALAMINE
     Route: 065
  1098. ASACOL [Suspect]
     Active Substance: MESALAMINE
     Route: 065
  1099. ASACOL [Suspect]
     Active Substance: MESALAMINE
     Route: 048
  1100. ASACOL [Suspect]
     Active Substance: MESALAMINE
     Route: 065
  1101. ASACOL [Suspect]
     Active Substance: MESALAMINE
     Route: 065
  1102. ASACOL [Suspect]
     Active Substance: MESALAMINE
     Indication: Colitis ulcerative
     Route: 065
  1103. ASACOL [Suspect]
     Active Substance: MESALAMINE
     Route: 065
  1104. ASACOL [Suspect]
     Active Substance: MESALAMINE
     Route: 065
  1105. ASACOL [Suspect]
     Active Substance: MESALAMINE
     Route: 065
  1106. ASACOL [Suspect]
     Active Substance: MESALAMINE
     Route: 065
  1107. ASACOL [Suspect]
     Active Substance: MESALAMINE
     Route: 065
  1108. ASACOL [Suspect]
     Active Substance: MESALAMINE
     Route: 065
  1109. ASACOL [Suspect]
     Active Substance: MESALAMINE
     Route: 065
  1110. ASACOL [Suspect]
     Active Substance: MESALAMINE
     Route: 048
  1111. ASACOL [Suspect]
     Active Substance: MESALAMINE
     Route: 065
  1112. ASACOL [Suspect]
     Active Substance: MESALAMINE
     Route: 065
  1113. ASACOL [Suspect]
     Active Substance: MESALAMINE
     Route: 065
  1114. ASACOL [Suspect]
     Active Substance: MESALAMINE
     Route: 065
  1115. ASACOL [Suspect]
     Active Substance: MESALAMINE
     Route: 048
  1116. ASACOL [Suspect]
     Active Substance: MESALAMINE
     Route: 065
  1117. ASACOL [Suspect]
     Active Substance: MESALAMINE
     Route: 065
  1118. ASACOL [Suspect]
     Active Substance: MESALAMINE
     Route: 065
  1119. ASACOL [Suspect]
     Active Substance: MESALAMINE
     Route: 065
  1120. ASACOL [Suspect]
     Active Substance: MESALAMINE
     Route: 065
  1121. ASACOL [Suspect]
     Active Substance: MESALAMINE
     Route: 065
  1122. ASACOL [Suspect]
     Active Substance: MESALAMINE
     Route: 065
  1123. ASACOL [Suspect]
     Active Substance: MESALAMINE
     Route: 065
  1124. ASACOL [Suspect]
     Active Substance: MESALAMINE
     Route: 065
  1125. ASACOL [Suspect]
     Active Substance: MESALAMINE
     Route: 065
  1126. ASACOL [Suspect]
     Active Substance: MESALAMINE
     Route: 065
  1127. ASACOL [Suspect]
     Active Substance: MESALAMINE
     Route: 065
  1128. ASACOL [Suspect]
     Active Substance: MESALAMINE
     Route: 065
  1129. ASACOL [Suspect]
     Active Substance: MESALAMINE
     Route: 065
  1130. ASACOL [Suspect]
     Active Substance: MESALAMINE
     Route: 065
  1131. ASACOL [Suspect]
     Active Substance: MESALAMINE
     Route: 065
  1132. ASACOL [Suspect]
     Active Substance: MESALAMINE
     Route: 065
  1133. ASACOL [Suspect]
     Active Substance: MESALAMINE
     Route: 048
  1134. ASACOL [Suspect]
     Active Substance: MESALAMINE
     Route: 048
  1135. ASACOL [Suspect]
     Active Substance: MESALAMINE
     Route: 065
  1136. ASACOL [Suspect]
     Active Substance: MESALAMINE
     Route: 048
  1137. ASACOL [Suspect]
     Active Substance: MESALAMINE
     Route: 065
  1138. ASACOL [Suspect]
     Active Substance: MESALAMINE
     Route: 065
  1139. ASACOL [Suspect]
     Active Substance: MESALAMINE
     Route: 065
  1140. ASACOL [Suspect]
     Active Substance: MESALAMINE
     Route: 065
  1141. ASACOL [Suspect]
     Active Substance: MESALAMINE
     Route: 065
  1142. ASACOL [Suspect]
     Active Substance: MESALAMINE
     Route: 048
  1143. ASACOL [Suspect]
     Active Substance: MESALAMINE
     Route: 048
  1144. ASACOL [Suspect]
     Active Substance: MESALAMINE
     Route: 065
  1145. ASACOL [Suspect]
     Active Substance: MESALAMINE
     Route: 065
  1146. ASACOL [Suspect]
     Active Substance: MESALAMINE
     Route: 065
  1147. ASACOL [Suspect]
     Active Substance: MESALAMINE
     Route: 065
  1148. ASACOL [Suspect]
     Active Substance: MESALAMINE
     Route: 065
  1149. ASACOL [Suspect]
     Active Substance: MESALAMINE
     Route: 048
  1150. ASACOL [Suspect]
     Active Substance: MESALAMINE
     Route: 065
  1151. ASACOL [Suspect]
     Active Substance: MESALAMINE
     Indication: Colitis ulcerative
  1152. BUDESONIDE [Suspect]
     Active Substance: BUDESONIDE
     Indication: Colitis ulcerative
     Route: 048
  1153. BUDESONIDE [Suspect]
     Active Substance: BUDESONIDE
     Route: 048
  1154. BUDESONIDE [Suspect]
     Active Substance: BUDESONIDE
     Route: 048
  1155. BUDESONIDE [Suspect]
     Active Substance: BUDESONIDE
     Route: 048
  1156. BUDESONIDE [Suspect]
     Active Substance: BUDESONIDE
     Route: 048
  1157. BUDESONIDE [Suspect]
     Active Substance: BUDESONIDE
     Route: 048
  1158. BUDESONIDE [Suspect]
     Active Substance: BUDESONIDE
     Route: 048
  1159. BUDESONIDE [Suspect]
     Active Substance: BUDESONIDE
     Route: 048
  1160. BUDESONIDE [Suspect]
     Active Substance: BUDESONIDE
     Route: 048
  1161. BUDESONIDE [Suspect]
     Active Substance: BUDESONIDE
     Route: 048
  1162. BUDESONIDE [Suspect]
     Active Substance: BUDESONIDE
     Route: 048
  1163. BUDESONIDE [Suspect]
     Active Substance: BUDESONIDE
     Route: 048
  1164. BUDESONIDE [Suspect]
     Active Substance: BUDESONIDE
     Route: 048
  1165. BUDESONIDE [Suspect]
     Active Substance: BUDESONIDE
     Route: 065
  1166. BUDESONIDE [Suspect]
     Active Substance: BUDESONIDE
     Route: 065
  1167. BUDESONIDE [Suspect]
     Active Substance: BUDESONIDE
     Route: 048
  1168. BUDESONIDE [Suspect]
     Active Substance: BUDESONIDE
     Route: 048
  1169. BUDESONIDE [Suspect]
     Active Substance: BUDESONIDE
     Route: 048
  1170. BUDESONIDE [Suspect]
     Active Substance: BUDESONIDE
     Route: 065
  1171. BUDESONIDE [Suspect]
     Active Substance: BUDESONIDE
     Route: 048
  1172. BUDESONIDE [Suspect]
     Active Substance: BUDESONIDE
     Route: 048
  1173. BUDESONIDE [Suspect]
     Active Substance: BUDESONIDE
     Route: 048
  1174. BUDESONIDE [Suspect]
     Active Substance: BUDESONIDE
     Route: 048
  1175. BUDESONIDE [Suspect]
     Active Substance: BUDESONIDE
     Route: 048
  1176. BUDESONIDE [Suspect]
     Active Substance: BUDESONIDE
     Route: 048
  1177. BUDESONIDE [Suspect]
     Active Substance: BUDESONIDE
     Route: 048
  1178. BUDESONIDE [Suspect]
     Active Substance: BUDESONIDE
     Route: 048
  1179. BUDESONIDE [Suspect]
     Active Substance: BUDESONIDE
     Route: 048
  1180. BUDESONIDE [Suspect]
     Active Substance: BUDESONIDE
     Route: 065
  1181. BUDESONIDE [Suspect]
     Active Substance: BUDESONIDE
     Route: 048
  1182. BUDESONIDE [Suspect]
     Active Substance: BUDESONIDE
     Route: 048
  1183. BUDESONIDE [Suspect]
     Active Substance: BUDESONIDE
     Route: 048
  1184. BUDESONIDE [Suspect]
     Active Substance: BUDESONIDE
     Route: 048
  1185. BUDESONIDE [Suspect]
     Active Substance: BUDESONIDE
     Route: 065
  1186. BUDESONIDE [Suspect]
     Active Substance: BUDESONIDE
     Route: 048
  1187. BUDESONIDE [Suspect]
     Active Substance: BUDESONIDE
     Route: 048
  1188. BUDESONIDE [Suspect]
     Active Substance: BUDESONIDE
     Route: 048
  1189. BUDESONIDE [Suspect]
     Active Substance: BUDESONIDE
     Route: 065
  1190. BUDESONIDE [Suspect]
     Active Substance: BUDESONIDE
     Route: 048
  1191. BUDESONIDE [Suspect]
     Active Substance: BUDESONIDE
     Route: 048
  1192. BUDESONIDE [Suspect]
     Active Substance: BUDESONIDE
     Route: 065
  1193. BUDESONIDE [Suspect]
     Active Substance: BUDESONIDE
     Route: 065
  1194. BUDESONIDE [Suspect]
     Active Substance: BUDESONIDE
     Route: 065
  1195. BUDESONIDE [Suspect]
     Active Substance: BUDESONIDE
     Route: 048
  1196. BUDESONIDE [Suspect]
     Active Substance: BUDESONIDE
     Route: 065
  1197. BUDESONIDE [Suspect]
     Active Substance: BUDESONIDE
     Route: 065
  1198. BUDESONIDE [Suspect]
     Active Substance: BUDESONIDE
     Route: 065
  1199. BUDESONIDE [Suspect]
     Active Substance: BUDESONIDE
     Route: 048
  1200. BUDESONIDE [Suspect]
     Active Substance: BUDESONIDE
     Route: 048
  1201. BUDESONIDE [Suspect]
     Active Substance: BUDESONIDE
  1202. BUDESONIDE [Suspect]
     Active Substance: BUDESONIDE
     Indication: Colitis ulcerative
     Route: 048
  1203. BUDESONIDE [Suspect]
     Active Substance: BUDESONIDE
     Route: 048
  1204. BUDESONIDE [Suspect]
     Active Substance: BUDESONIDE
     Route: 048
  1205. BUDESONIDE [Suspect]
     Active Substance: BUDESONIDE
     Route: 048
  1206. BUDESONIDE [Suspect]
     Active Substance: BUDESONIDE
     Route: 048
  1207. BUDESONIDE [Suspect]
     Active Substance: BUDESONIDE
  1208. BUDESONIDE [Suspect]
     Active Substance: BUDESONIDE
     Route: 048
  1209. BUDESONIDE [Suspect]
     Active Substance: BUDESONIDE
     Route: 048
  1210. BUDESONIDE [Suspect]
     Active Substance: BUDESONIDE
     Route: 048
  1211. BUDESONIDE [Suspect]
     Active Substance: BUDESONIDE
     Route: 048
  1212. BUDESONIDE [Suspect]
     Active Substance: BUDESONIDE
     Route: 048
  1213. BUDESONIDE [Suspect]
     Active Substance: BUDESONIDE
     Route: 048
  1214. BUDESONIDE [Suspect]
     Active Substance: BUDESONIDE
     Route: 048
  1215. BUDESONIDE [Suspect]
     Active Substance: BUDESONIDE
     Route: 048
  1216. BUDESONIDE [Suspect]
     Active Substance: BUDESONIDE
     Route: 048
  1217. BUDESONIDE [Suspect]
     Active Substance: BUDESONIDE
     Indication: Colitis ulcerative
     Route: 048
  1218. BUDESONIDE [Suspect]
     Active Substance: BUDESONIDE
     Route: 048
  1219. BUDESONIDE [Suspect]
     Active Substance: BUDESONIDE
     Route: 048
  1220. BUDESONIDE [Suspect]
     Active Substance: BUDESONIDE
     Route: 048
  1221. BUDESONIDE [Suspect]
     Active Substance: BUDESONIDE
     Route: 048
  1222. BUDESONIDE [Suspect]
     Active Substance: BUDESONIDE
     Route: 048
  1223. BUDESONIDE [Suspect]
     Active Substance: BUDESONIDE
     Route: 048
  1224. BUDESONIDE [Suspect]
     Active Substance: BUDESONIDE
     Route: 048
  1225. BUDESONIDE [Suspect]
     Active Substance: BUDESONIDE
     Route: 048
  1226. BUDESONIDE [Suspect]
     Active Substance: BUDESONIDE
     Route: 048
  1227. BUDESONIDE [Suspect]
     Active Substance: BUDESONIDE
     Route: 048
  1228. BUDESONIDE [Suspect]
     Active Substance: BUDESONIDE
     Route: 048
  1229. BUDESONIDE [Suspect]
     Active Substance: BUDESONIDE
     Route: 048
  1230. BUDESONIDE [Suspect]
     Active Substance: BUDESONIDE
     Route: 048
  1231. BUDESONIDE [Suspect]
     Active Substance: BUDESONIDE
     Route: 048
  1232. BUDESONIDE [Suspect]
     Active Substance: BUDESONIDE
     Route: 065
  1233. BUDESONIDE [Suspect]
     Active Substance: BUDESONIDE
     Route: 065
  1234. BUDESONIDE [Suspect]
     Active Substance: BUDESONIDE
     Route: 065
  1235. BUDESONIDE [Suspect]
     Active Substance: BUDESONIDE
     Route: 048
  1236. BUDESONIDE [Suspect]
     Active Substance: BUDESONIDE
     Route: 048
  1237. BUDESONIDE [Suspect]
     Active Substance: BUDESONIDE
     Route: 048
  1238. BUDESONIDE [Suspect]
     Active Substance: BUDESONIDE
     Route: 048
  1239. BUDESONIDE [Suspect]
     Active Substance: BUDESONIDE
     Route: 048
  1240. BUDESONIDE [Suspect]
     Active Substance: BUDESONIDE
     Route: 065
  1241. BUDESONIDE [Suspect]
     Active Substance: BUDESONIDE
     Route: 065
  1242. BUDESONIDE [Suspect]
     Active Substance: BUDESONIDE
     Route: 065
  1243. BUDESONIDE [Suspect]
     Active Substance: BUDESONIDE
     Route: 048
  1244. BUDESONIDE [Suspect]
     Active Substance: BUDESONIDE
     Route: 048
  1245. BUDESONIDE [Suspect]
     Active Substance: BUDESONIDE
     Route: 048
  1246. BUDESONIDE [Suspect]
     Active Substance: BUDESONIDE
     Route: 048
  1247. BUDESONIDE [Suspect]
     Active Substance: BUDESONIDE
     Route: 048
  1248. BUDESONIDE [Suspect]
     Active Substance: BUDESONIDE
     Route: 048
  1249. BUDESONIDE [Suspect]
     Active Substance: BUDESONIDE
     Route: 048
  1250. BUDESONIDE [Suspect]
     Active Substance: BUDESONIDE
     Route: 048
  1251. BUDESONIDE [Suspect]
     Active Substance: BUDESONIDE
     Route: 048
  1252. BUDESONIDE [Suspect]
     Active Substance: BUDESONIDE
     Route: 048
  1253. BUDESONIDE [Suspect]
     Active Substance: BUDESONIDE
     Route: 048
  1254. BUDESONIDE [Suspect]
     Active Substance: BUDESONIDE
     Route: 048
  1255. BUDESONIDE [Suspect]
     Active Substance: BUDESONIDE
     Route: 065
  1256. BUDESONIDE [Suspect]
     Active Substance: BUDESONIDE
     Route: 065
  1257. BUDESONIDE [Suspect]
     Active Substance: BUDESONIDE
     Route: 065
  1258. BUDESONIDE [Suspect]
     Active Substance: BUDESONIDE
     Route: 065
  1259. BUDESONIDE [Suspect]
     Active Substance: BUDESONIDE
     Route: 065
  1260. BUDESONIDE [Suspect]
     Active Substance: BUDESONIDE
     Route: 065
  1261. BUDESONIDE [Suspect]
     Active Substance: BUDESONIDE
     Route: 065
  1262. BUDESONIDE [Suspect]
     Active Substance: BUDESONIDE
     Route: 048
  1263. BUDESONIDE [Suspect]
     Active Substance: BUDESONIDE
     Route: 048
  1264. BUDESONIDE [Suspect]
     Active Substance: BUDESONIDE
  1265. BUDESONIDE [Suspect]
     Active Substance: BUDESONIDE
     Route: 065
  1266. BUDESONIDE [Suspect]
     Active Substance: BUDESONIDE
  1267. BUDESONIDE [Suspect]
     Active Substance: BUDESONIDE
     Indication: Colitis ulcerative
     Route: 048
  1268. BUDESONIDE [Suspect]
     Active Substance: BUDESONIDE
     Route: 048
  1269. BUDESONIDE [Suspect]
     Active Substance: BUDESONIDE
     Route: 048
  1270. BUDESONIDE [Suspect]
     Active Substance: BUDESONIDE
     Route: 048
  1271. BUDESONIDE [Suspect]
     Active Substance: BUDESONIDE
     Route: 048
  1272. BUDESONIDE [Suspect]
     Active Substance: BUDESONIDE
     Route: 048
  1273. BUDESONIDE [Suspect]
     Active Substance: BUDESONIDE
     Route: 048
  1274. BUDESONIDE [Suspect]
     Active Substance: BUDESONIDE
     Route: 048
  1275. BUDESONIDE [Suspect]
     Active Substance: BUDESONIDE
     Route: 048
  1276. BUDESONIDE [Suspect]
     Active Substance: BUDESONIDE
     Route: 048
  1277. BUDESONIDE [Suspect]
     Active Substance: BUDESONIDE
     Route: 048
  1278. BUDESONIDE [Suspect]
     Active Substance: BUDESONIDE
     Route: 048
  1279. BUDESONIDE [Suspect]
     Active Substance: BUDESONIDE
     Route: 048
  1280. BUDESONIDE [Suspect]
     Active Substance: BUDESONIDE
     Route: 048
  1281. BUDESONIDE [Suspect]
     Active Substance: BUDESONIDE
     Route: 048
  1282. BUDESONIDE [Suspect]
     Active Substance: BUDESONIDE
     Route: 048
  1283. BUDESONIDE [Suspect]
     Active Substance: BUDESONIDE
     Indication: Colitis ulcerative
     Route: 048
  1284. BUDESONIDE [Suspect]
     Active Substance: BUDESONIDE
     Route: 048
  1285. BUDESONIDE [Suspect]
     Active Substance: BUDESONIDE
     Route: 048
  1286. BUDESONIDE [Suspect]
     Active Substance: BUDESONIDE
     Route: 048
  1287. BUDESONIDE [Suspect]
     Active Substance: BUDESONIDE
     Route: 048
  1288. BUDESONIDE [Suspect]
     Active Substance: BUDESONIDE
     Route: 048
  1289. BUDESONIDE [Suspect]
     Active Substance: BUDESONIDE
     Route: 065
  1290. BUDESONIDE [Suspect]
     Active Substance: BUDESONIDE
     Route: 048
  1291. BUDESONIDE [Suspect]
     Active Substance: BUDESONIDE
     Route: 048
  1292. BUDESONIDE [Suspect]
     Active Substance: BUDESONIDE
     Route: 065
  1293. BUDESONIDE [Suspect]
     Active Substance: BUDESONIDE
     Route: 048
  1294. BUDESONIDE [Suspect]
     Active Substance: BUDESONIDE
     Route: 050
  1295. BUDESONIDE [Suspect]
     Active Substance: BUDESONIDE
     Route: 065
  1296. BUDESONIDE [Suspect]
     Active Substance: BUDESONIDE
     Route: 065
  1297. BUDESONIDE [Suspect]
     Active Substance: BUDESONIDE
     Route: 065
  1298. BUDESONIDE [Suspect]
     Active Substance: BUDESONIDE
     Route: 065
  1299. BUDESONIDE [Suspect]
     Active Substance: BUDESONIDE
     Route: 048
  1300. BUDESONIDE [Suspect]
     Active Substance: BUDESONIDE
     Route: 048
  1301. BUDESONIDE [Suspect]
     Active Substance: BUDESONIDE
     Route: 048
  1302. BUDESONIDE [Suspect]
     Active Substance: BUDESONIDE
     Route: 065
  1303. BUDESONIDE [Suspect]
     Active Substance: BUDESONIDE
     Route: 065
  1304. AZD-1222 [Suspect]
     Active Substance: AZD-1222
     Indication: COVID-19 immunisation
     Route: 065
  1305. AZD-1222 [Suspect]
     Active Substance: AZD-1222
     Indication: Adverse drug reaction
     Route: 065
  1306. AZD-1222 [Suspect]
     Active Substance: AZD-1222
     Route: 065
  1307. AZD-1222 [Suspect]
     Active Substance: AZD-1222
     Route: 065
  1308. AZD-1222 [Suspect]
     Active Substance: AZD-1222
     Route: 065
  1309. AZD-1222 [Suspect]
     Active Substance: AZD-1222
     Route: 065
  1310. AZD-1222 [Suspect]
     Active Substance: AZD-1222
     Route: 065
  1311. AZD-1222 [Suspect]
     Active Substance: AZD-1222
     Route: 065
  1312. AZD-1222 [Suspect]
     Active Substance: AZD-1222
     Route: 065
  1313. AZD-1222 [Suspect]
     Active Substance: AZD-1222
     Route: 065
  1314. AZD-1222 [Suspect]
     Active Substance: AZD-1222
     Route: 065
  1315. AZD-1222 [Suspect]
     Active Substance: AZD-1222
     Route: 065
  1316. AZD-1222 [Suspect]
     Active Substance: AZD-1222
     Route: 065
  1317. AZD-1222 [Suspect]
     Active Substance: AZD-1222
     Route: 065
  1318. AZD-1222 [Suspect]
     Active Substance: AZD-1222
     Route: 065
  1319. AZD-1222 [Suspect]
     Active Substance: AZD-1222
     Route: 065
  1320. AZD-1222 [Suspect]
     Active Substance: AZD-1222
  1321. AZD-1222 [Suspect]
     Active Substance: AZD-1222
  1322. AZD-1222 [Suspect]
     Active Substance: AZD-1222
  1323. AZD-1222 [Suspect]
     Active Substance: AZD-1222
  1324. AZD-1222 [Suspect]
     Active Substance: AZD-1222
  1325. AZD-1222 [Suspect]
     Active Substance: AZD-1222
  1326. AZD-1222 [Suspect]
     Active Substance: AZD-1222
  1327. AZD-1222 [Suspect]
     Active Substance: AZD-1222
  1328. AZD-1222 [Suspect]
     Active Substance: AZD-1222
  1329. AZD-1222 [Suspect]
     Active Substance: AZD-1222
  1330. AZD-1222 [Suspect]
     Active Substance: AZD-1222
  1331. AZD-1222 [Suspect]
     Active Substance: AZD-1222
  1332. AZD-1222 [Suspect]
     Active Substance: AZD-1222
  1333. AZD-1222 [Suspect]
     Active Substance: AZD-1222
  1334. AZD-1222 [Suspect]
     Active Substance: AZD-1222
  1335. AZD-1222 [Suspect]
     Active Substance: AZD-1222
  1336. AZD-1222 [Suspect]
     Active Substance: AZD-1222
  1337. AZD-1222 [Suspect]
     Active Substance: AZD-1222
     Route: 065
  1338. AZD-1222 [Suspect]
     Active Substance: AZD-1222
     Route: 065
  1339. AZD-1222 [Suspect]
     Active Substance: AZD-1222
     Route: 065
  1340. AZD-1222 [Suspect]
     Active Substance: AZD-1222
     Route: 065
  1341. AZD-1222 [Suspect]
     Active Substance: AZD-1222
     Route: 065
  1342. AZD-1222 [Suspect]
     Active Substance: AZD-1222
     Route: 065
  1343. AZD-1222 [Suspect]
     Active Substance: AZD-1222
     Route: 065
  1344. AZD-1222 [Suspect]
     Active Substance: AZD-1222
     Route: 065
  1345. AZD-1222 [Suspect]
     Active Substance: AZD-1222
     Route: 065
  1346. AZD-1222 [Suspect]
     Active Substance: AZD-1222
     Route: 065
  1347. AZD-1222 [Suspect]
     Active Substance: AZD-1222
     Route: 065
  1348. AZD-1222 [Suspect]
     Active Substance: AZD-1222
     Route: 065
  1349. AZD-1222 [Suspect]
     Active Substance: AZD-1222
     Route: 065
  1350. AZD-1222 [Suspect]
     Active Substance: AZD-1222
     Route: 065
  1351. AZD-1222 [Suspect]
     Active Substance: AZD-1222
     Route: 065
  1352. AZD-1222 [Suspect]
     Active Substance: AZD-1222
     Indication: COVID-19 immunisation
     Route: 065
  1353. AZD-1222 [Suspect]
     Active Substance: AZD-1222
     Indication: Adverse drug reaction
     Route: 065
  1354. AZD-1222 [Suspect]
     Active Substance: AZD-1222
     Route: 065
  1355. AZD-1222 [Suspect]
     Active Substance: AZD-1222
     Route: 065
  1356. AZD-1222 [Suspect]
     Active Substance: AZD-1222
     Route: 065
  1357. AZD-1222 [Suspect]
     Active Substance: AZD-1222
     Route: 065
  1358. AZD-1222 [Suspect]
     Active Substance: AZD-1222
     Route: 065
  1359. AZD-1222 [Suspect]
     Active Substance: AZD-1222
     Route: 065
  1360. AZD-1222 [Suspect]
     Active Substance: AZD-1222
     Route: 065
  1361. AZD-1222 [Suspect]
     Active Substance: AZD-1222
     Route: 065
  1362. AZD-1222 [Suspect]
     Active Substance: AZD-1222
     Route: 065
  1363. AZD-1222 [Suspect]
     Active Substance: AZD-1222
  1364. AZD-1222 [Suspect]
     Active Substance: AZD-1222
  1365. AZD-1222 [Suspect]
     Active Substance: AZD-1222
  1366. AZD-1222 [Suspect]
     Active Substance: AZD-1222
     Route: 065
  1367. AZD-1222 [Suspect]
     Active Substance: AZD-1222
     Route: 065
  1368. AZD-1222 [Suspect]
     Active Substance: AZD-1222
     Route: 065
  1369. AZD-1222 [Suspect]
     Active Substance: AZD-1222
  1370. AZD-1222 [Suspect]
     Active Substance: AZD-1222
  1371. AZD-1222 [Suspect]
     Active Substance: AZD-1222
     Route: 065
  1372. AZD-1222 [Suspect]
     Active Substance: AZD-1222
  1373. AZD-1222 [Suspect]
     Active Substance: AZD-1222
  1374. AZD-1222 [Suspect]
     Active Substance: AZD-1222
  1375. AZD-1222 [Suspect]
     Active Substance: AZD-1222
  1376. AZD-1222 [Suspect]
     Active Substance: AZD-1222
  1377. AZD-1222 [Suspect]
     Active Substance: AZD-1222
     Route: 065
  1378. AZD-1222 [Suspect]
     Active Substance: AZD-1222
     Route: 065
  1379. AZD-1222 [Suspect]
     Active Substance: AZD-1222
     Route: 065
  1380. AZD-1222 [Suspect]
     Active Substance: AZD-1222
     Route: 065
  1381. AZD-1222 [Suspect]
     Active Substance: AZD-1222
     Route: 065
  1382. AZD-1222 [Suspect]
     Active Substance: AZD-1222
     Route: 065
  1383. AZD-1222 [Suspect]
     Active Substance: AZD-1222
     Route: 065
  1384. AZD-1222 [Suspect]
     Active Substance: AZD-1222
     Route: 065
  1385. AZD-1222 [Suspect]
     Active Substance: AZD-1222
     Route: 065
  1386. AZD-1222 [Suspect]
     Active Substance: AZD-1222
     Route: 065
  1387. AZD-1222 [Suspect]
     Active Substance: AZD-1222
     Route: 065
  1388. AZD-1222 [Suspect]
     Active Substance: AZD-1222
  1389. AZD-1222 [Suspect]
     Active Substance: AZD-1222
     Route: 050
  1390. AZD-1222 [Suspect]
     Active Substance: AZD-1222
  1391. AZD-1222 [Suspect]
     Active Substance: AZD-1222
  1392. CORTIFOAM [Suspect]
     Active Substance: HYDROCORTISONE ACETATE
     Indication: Colitis ulcerative
     Route: 065
  1393. CORTIFOAM [Suspect]
     Active Substance: HYDROCORTISONE ACETATE
     Indication: Deep vein thrombosis
     Route: 065
  1394. CORTIFOAM [Suspect]
     Active Substance: HYDROCORTISONE ACETATE
     Indication: Crohn^s disease
     Route: 065
  1395. CORTIFOAM [Suspect]
     Active Substance: HYDROCORTISONE ACETATE
     Route: 065
  1396. CORTIFOAM [Suspect]
     Active Substance: HYDROCORTISONE ACETATE
     Route: 048
  1397. CORTIFOAM [Suspect]
     Active Substance: HYDROCORTISONE ACETATE
     Route: 048
  1398. CORTIFOAM [Suspect]
     Active Substance: HYDROCORTISONE ACETATE
     Route: 048
  1399. CORTIFOAM [Suspect]
     Active Substance: HYDROCORTISONE ACETATE
     Route: 048
  1400. CORTIFOAM [Suspect]
     Active Substance: HYDROCORTISONE ACETATE
     Route: 048
  1401. CORTIFOAM [Suspect]
     Active Substance: HYDROCORTISONE ACETATE
     Route: 065
  1402. CORTIFOAM [Suspect]
     Active Substance: HYDROCORTISONE ACETATE
     Route: 065
  1403. CORTIFOAM [Suspect]
     Active Substance: HYDROCORTISONE ACETATE
     Route: 065
  1404. CORTIFOAM [Suspect]
     Active Substance: HYDROCORTISONE ACETATE
     Route: 048
  1405. CORTIFOAM [Suspect]
     Active Substance: HYDROCORTISONE ACETATE
     Route: 065
  1406. CORTIFOAM [Suspect]
     Active Substance: HYDROCORTISONE ACETATE
     Route: 065
  1407. CORTIFOAM [Suspect]
     Active Substance: HYDROCORTISONE ACETATE
  1408. CORTIFOAM [Suspect]
     Active Substance: HYDROCORTISONE ACETATE
     Route: 048
  1409. CORTIFOAM [Suspect]
     Active Substance: HYDROCORTISONE ACETATE
     Route: 048
  1410. CORTIFOAM [Suspect]
     Active Substance: HYDROCORTISONE ACETATE
     Route: 048
  1411. CORTIFOAM [Suspect]
     Active Substance: HYDROCORTISONE ACETATE
     Route: 048
  1412. CORTIFOAM [Suspect]
     Active Substance: HYDROCORTISONE ACETATE
     Route: 048
  1413. CORTIFOAM [Suspect]
     Active Substance: HYDROCORTISONE ACETATE
     Route: 065
  1414. CORTIFOAM [Suspect]
     Active Substance: HYDROCORTISONE ACETATE
     Route: 065
  1415. CORTIFOAM [Suspect]
     Active Substance: HYDROCORTISONE ACETATE
     Route: 048
  1416. CORTIFOAM [Suspect]
     Active Substance: HYDROCORTISONE ACETATE
     Route: 065
  1417. CORTIFOAM [Suspect]
     Active Substance: HYDROCORTISONE ACETATE
     Route: 065
  1418. CORTIFOAM [Suspect]
     Active Substance: HYDROCORTISONE ACETATE
     Route: 048
  1419. CORTIFOAM [Suspect]
     Active Substance: HYDROCORTISONE ACETATE
     Route: 048
  1420. CORTIFOAM [Suspect]
     Active Substance: HYDROCORTISONE ACETATE
     Indication: Colitis ulcerative
  1421. CORTIFOAM [Suspect]
     Active Substance: HYDROCORTISONE ACETATE
     Route: 048
  1422. CORTIFOAM [Suspect]
     Active Substance: HYDROCORTISONE ACETATE
     Route: 048
  1423. CORTIFOAM [Suspect]
     Active Substance: HYDROCORTISONE ACETATE
     Route: 048
  1424. CORTIFOAM [Suspect]
     Active Substance: HYDROCORTISONE ACETATE
     Route: 065
  1425. CORTIFOAM [Suspect]
     Active Substance: HYDROCORTISONE ACETATE
     Indication: Colitis ulcerative
     Route: 065
  1426. CORTIFOAM [Suspect]
     Active Substance: HYDROCORTISONE ACETATE
     Indication: Crohn^s disease
  1427. CORTIFOAM [Suspect]
     Active Substance: HYDROCORTISONE ACETATE
     Indication: Deep vein thrombosis
  1428. CORTATE [Suspect]
     Active Substance: HYDROCORTISONE
     Indication: Colitis ulcerative
     Route: 048
  1429. CORTATE [Suspect]
     Active Substance: HYDROCORTISONE
     Route: 048
  1430. CORTATE [Suspect]
     Active Substance: HYDROCORTISONE
     Route: 048
  1431. CORTATE [Suspect]
     Active Substance: HYDROCORTISONE
     Route: 048
  1432. BUDESONIDE [Suspect]
     Active Substance: BUDESONIDE
     Indication: Colitis ulcerative
     Route: 048
  1433. BUDESONIDE [Suspect]
     Active Substance: BUDESONIDE
     Indication: Crohn^s disease
     Route: 048
  1434. BUDESONIDE [Suspect]
     Active Substance: BUDESONIDE
     Route: 048
  1435. BUDESONIDE [Suspect]
     Active Substance: BUDESONIDE
     Route: 048
  1436. BUDESONIDE [Suspect]
     Active Substance: BUDESONIDE
     Route: 048
  1437. BUDESONIDE [Suspect]
     Active Substance: BUDESONIDE
     Route: 048
  1438. BUDESONIDE [Suspect]
     Active Substance: BUDESONIDE
     Route: 048
  1439. BUDESONIDE [Suspect]
     Active Substance: BUDESONIDE
     Route: 048
  1440. BUDESONIDE [Suspect]
     Active Substance: BUDESONIDE
     Route: 048
  1441. BUDESONIDE [Suspect]
     Active Substance: BUDESONIDE
     Route: 048
  1442. BUDESONIDE [Suspect]
     Active Substance: BUDESONIDE
     Route: 048
  1443. BUDESONIDE [Suspect]
     Active Substance: BUDESONIDE
     Route: 048
  1444. BUDESONIDE [Suspect]
     Active Substance: BUDESONIDE
     Route: 048
  1445. BUDESONIDE [Suspect]
     Active Substance: BUDESONIDE
     Route: 048
  1446. BUDESONIDE [Suspect]
     Active Substance: BUDESONIDE
     Route: 048
  1447. BUDESONIDE [Suspect]
     Active Substance: BUDESONIDE
     Route: 048
  1448. BUDESONIDE [Suspect]
     Active Substance: BUDESONIDE
     Route: 048
  1449. BUDESONIDE [Suspect]
     Active Substance: BUDESONIDE
     Route: 048
  1450. BUDESONIDE [Suspect]
     Active Substance: BUDESONIDE
     Route: 048
  1451. BUDESONIDE [Suspect]
     Active Substance: BUDESONIDE
     Route: 048
  1452. BUDESONIDE [Suspect]
     Active Substance: BUDESONIDE
     Route: 065
  1453. BUDESONIDE [Suspect]
     Active Substance: BUDESONIDE
     Route: 065
  1454. BUDESONIDE [Suspect]
     Active Substance: BUDESONIDE
     Route: 065
  1455. BUDESONIDE [Suspect]
     Active Substance: BUDESONIDE
     Route: 065
  1456. BUDESONIDE [Suspect]
     Active Substance: BUDESONIDE
     Route: 065
  1457. BUDESONIDE [Suspect]
     Active Substance: BUDESONIDE
     Route: 065
  1458. BUDESONIDE [Suspect]
     Active Substance: BUDESONIDE
     Route: 065
  1459. BUDESONIDE [Suspect]
     Active Substance: BUDESONIDE
     Route: 065
  1460. BUDESONIDE [Suspect]
     Active Substance: BUDESONIDE
     Indication: Colitis ulcerative
     Route: 048
  1461. BUDESONIDE [Suspect]
     Active Substance: BUDESONIDE
     Route: 048
  1462. BUDESONIDE [Suspect]
     Active Substance: BUDESONIDE
     Route: 048
  1463. BUDESONIDE [Suspect]
     Active Substance: BUDESONIDE
     Route: 048
  1464. BUDESONIDE [Suspect]
     Active Substance: BUDESONIDE
     Route: 048
  1465. BUDESONIDE [Suspect]
     Active Substance: BUDESONIDE
     Route: 048
  1466. BUDESONIDE [Suspect]
     Active Substance: BUDESONIDE
     Route: 048
  1467. BUDESONIDE [Suspect]
     Active Substance: BUDESONIDE
     Route: 048
  1468. BUDESONIDE [Suspect]
     Active Substance: BUDESONIDE
     Route: 048
  1469. BUDESONIDE [Suspect]
     Active Substance: BUDESONIDE
     Route: 065
  1470. BUDESONIDE [Suspect]
     Active Substance: BUDESONIDE
     Route: 048
  1471. BUDESONIDE [Suspect]
     Active Substance: BUDESONIDE
     Route: 065
  1472. BUDESONIDE [Suspect]
     Active Substance: BUDESONIDE
     Route: 048
  1473. BUDESONIDE [Suspect]
     Active Substance: BUDESONIDE
     Route: 065
  1474. BUDESONIDE [Suspect]
     Active Substance: BUDESONIDE
     Route: 065
  1475. BUDESONIDE [Suspect]
     Active Substance: BUDESONIDE
     Route: 065
  1476. BUDESONIDE [Suspect]
     Active Substance: BUDESONIDE
     Route: 065
  1477. BUDESONIDE [Suspect]
     Active Substance: BUDESONIDE
     Route: 065
  1478. BUDESONIDE [Suspect]
     Active Substance: BUDESONIDE
     Route: 048
  1479. BUDESONIDE [Suspect]
     Active Substance: BUDESONIDE
     Route: 048
  1480. BUDESONIDE [Suspect]
     Active Substance: BUDESONIDE
     Route: 048
  1481. BUDESONIDE [Suspect]
     Active Substance: BUDESONIDE
     Route: 048
  1482. BUDESONIDE [Suspect]
     Active Substance: BUDESONIDE
     Route: 048
  1483. BUDESONIDE [Suspect]
     Active Substance: BUDESONIDE
     Route: 048
  1484. BUDESONIDE [Suspect]
     Active Substance: BUDESONIDE
     Route: 048
  1485. BUDESONIDE [Suspect]
     Active Substance: BUDESONIDE
     Route: 048
  1486. BUDESONIDE [Suspect]
     Active Substance: BUDESONIDE
     Route: 048
  1487. BUDESONIDE [Suspect]
     Active Substance: BUDESONIDE
     Route: 048
  1488. BUDESONIDE [Suspect]
     Active Substance: BUDESONIDE
     Route: 048
  1489. BUDESONIDE [Suspect]
     Active Substance: BUDESONIDE
     Route: 048
  1490. BUDESONIDE [Suspect]
     Active Substance: BUDESONIDE
     Route: 048
  1491. BUDESONIDE [Suspect]
     Active Substance: BUDESONIDE
     Route: 048
  1492. BUDESONIDE [Suspect]
     Active Substance: BUDESONIDE
     Route: 048
  1493. BUDESONIDE [Suspect]
     Active Substance: BUDESONIDE
     Route: 048
  1494. BUDESONIDE [Suspect]
     Active Substance: BUDESONIDE
     Route: 048
  1495. BUDESONIDE [Suspect]
     Active Substance: BUDESONIDE
     Route: 048
  1496. BUDESONIDE [Suspect]
     Active Substance: BUDESONIDE
     Route: 048
  1497. BUDESONIDE [Suspect]
     Active Substance: BUDESONIDE
     Route: 048
  1498. BUDESONIDE [Suspect]
     Active Substance: BUDESONIDE
     Route: 048
  1499. BUDESONIDE [Suspect]
     Active Substance: BUDESONIDE
     Route: 048
  1500. BUDESONIDE [Suspect]
     Active Substance: BUDESONIDE
     Indication: Colitis ulcerative
     Route: 048
  1501. BUDESONIDE [Suspect]
     Active Substance: BUDESONIDE
     Route: 048
  1502. BUDESONIDE [Suspect]
     Active Substance: BUDESONIDE
     Route: 048
  1503. BUDESONIDE [Suspect]
     Active Substance: BUDESONIDE
     Route: 065
  1504. BUDESONIDE [Suspect]
     Active Substance: BUDESONIDE
     Route: 065
  1505. BUDESONIDE [Suspect]
     Active Substance: BUDESONIDE
     Route: 065
  1506. BUDESONIDE [Suspect]
     Active Substance: BUDESONIDE
     Route: 065
  1507. BUDESONIDE [Suspect]
     Active Substance: BUDESONIDE
     Route: 048
  1508. BUDESONIDE [Suspect]
     Active Substance: BUDESONIDE
     Route: 048
  1509. BUDESONIDE [Suspect]
     Active Substance: BUDESONIDE
     Route: 048
  1510. BUDESONIDE [Suspect]
     Active Substance: BUDESONIDE
     Route: 065
  1511. BUDESONIDE [Suspect]
     Active Substance: BUDESONIDE
     Route: 048
  1512. BUDESONIDE [Suspect]
     Active Substance: BUDESONIDE
     Route: 065
  1513. BUDESONIDE [Suspect]
     Active Substance: BUDESONIDE
     Route: 048
  1514. BUDESONIDE [Suspect]
     Active Substance: BUDESONIDE
     Route: 048
  1515. BUDESONIDE [Suspect]
     Active Substance: BUDESONIDE
     Route: 048
  1516. BUDESONIDE [Suspect]
     Active Substance: BUDESONIDE
     Route: 048
  1517. BUDESONIDE [Suspect]
     Active Substance: BUDESONIDE
     Route: 048
  1518. BUDESONIDE [Suspect]
     Active Substance: BUDESONIDE
     Route: 048
  1519. BUDESONIDE [Suspect]
     Active Substance: BUDESONIDE
     Route: 048
  1520. BUDESONIDE [Suspect]
     Active Substance: BUDESONIDE
     Route: 048
  1521. BUDESONIDE [Suspect]
     Active Substance: BUDESONIDE
     Route: 048
  1522. BUDESONIDE [Suspect]
     Active Substance: BUDESONIDE
     Route: 048
  1523. BUDESONIDE [Suspect]
     Active Substance: BUDESONIDE
     Route: 048
  1524. BUDESONIDE [Suspect]
     Active Substance: BUDESONIDE
     Route: 048
  1525. BUDESONIDE [Suspect]
     Active Substance: BUDESONIDE
     Route: 048
  1526. BUDESONIDE [Suspect]
     Active Substance: BUDESONIDE
     Route: 048
  1527. BUDESONIDE [Suspect]
     Active Substance: BUDESONIDE
     Route: 048
  1528. BUDESONIDE [Suspect]
     Active Substance: BUDESONIDE
     Route: 048
  1529. BUDESONIDE [Suspect]
     Active Substance: BUDESONIDE
     Route: 048
  1530. BUDESONIDE [Suspect]
     Active Substance: BUDESONIDE
     Route: 048
  1531. BUDESONIDE [Suspect]
     Active Substance: BUDESONIDE
     Route: 048
  1532. BUDESONIDE [Suspect]
     Active Substance: BUDESONIDE
     Route: 048
  1533. BUDESONIDE [Suspect]
     Active Substance: BUDESONIDE
     Route: 048
  1534. BUDESONIDE [Suspect]
     Active Substance: BUDESONIDE
     Route: 048
  1535. BUDESONIDE [Suspect]
     Active Substance: BUDESONIDE
     Indication: Colitis ulcerative
     Route: 048
  1536. BUDESONIDE [Suspect]
     Active Substance: BUDESONIDE
     Route: 048
  1537. BUDESONIDE [Suspect]
     Active Substance: BUDESONIDE
     Route: 048
  1538. BUDESONIDE [Suspect]
     Active Substance: BUDESONIDE
     Route: 065
  1539. BUDESONIDE [Suspect]
     Active Substance: BUDESONIDE
     Route: 065
  1540. BUDESONIDE [Suspect]
     Active Substance: BUDESONIDE
     Route: 065
  1541. BUDESONIDE [Suspect]
     Active Substance: BUDESONIDE
     Route: 048
  1542. BUDESONIDE [Suspect]
     Active Substance: BUDESONIDE
     Route: 048
  1543. BUDESONIDE [Suspect]
     Active Substance: BUDESONIDE
     Route: 065
  1544. BUDESONIDE [Suspect]
     Active Substance: BUDESONIDE
     Route: 048
  1545. HYDROCORTISONE [Suspect]
     Active Substance: HYDROCORTISONE
     Indication: Crohn^s disease
     Route: 065
  1546. HYDROCORTISONE [Suspect]
     Active Substance: HYDROCORTISONE
     Indication: Colitis ulcerative
     Route: 048
  1547. HYDROCORTISONE [Suspect]
     Active Substance: HYDROCORTISONE
     Route: 048
  1548. HYDROCORTISONE [Suspect]
     Active Substance: HYDROCORTISONE
     Route: 065
  1549. HYDROCORTISONE [Suspect]
     Active Substance: HYDROCORTISONE
     Route: 042
  1550. HYDROCORTISONE [Suspect]
     Active Substance: HYDROCORTISONE
     Route: 048
  1551. HYDROCORTISONE [Suspect]
     Active Substance: HYDROCORTISONE
     Route: 065
  1552. HYDROCORTISONE [Suspect]
     Active Substance: HYDROCORTISONE
     Route: 048
  1553. HYDROCORTISONE [Suspect]
     Active Substance: HYDROCORTISONE
     Route: 048
  1554. HYDROCORTISONE [Suspect]
     Active Substance: HYDROCORTISONE
     Route: 048
  1555. HYDROCORTISONE [Suspect]
     Active Substance: HYDROCORTISONE
     Route: 048
  1556. HYDROCORTISONE [Suspect]
     Active Substance: HYDROCORTISONE
     Route: 048
  1557. HYDROCORTISONE [Suspect]
     Active Substance: HYDROCORTISONE
     Route: 048
  1558. HYDROCORTISONE [Suspect]
     Active Substance: HYDROCORTISONE
     Route: 065
  1559. HYDROCORTISONE [Suspect]
     Active Substance: HYDROCORTISONE
     Route: 065
  1560. HYDROCORTISONE [Suspect]
     Active Substance: HYDROCORTISONE
     Route: 042
  1561. HYDROCORTISONE [Suspect]
     Active Substance: HYDROCORTISONE
     Route: 048
  1562. HYDROCORTISONE [Suspect]
     Active Substance: HYDROCORTISONE
     Route: 048
  1563. HYDROCORTISONE [Suspect]
     Active Substance: HYDROCORTISONE
     Route: 048
  1564. HYDROCORTISONE [Suspect]
     Active Substance: HYDROCORTISONE
     Route: 042
  1565. HYDROCORTISONE [Suspect]
     Active Substance: HYDROCORTISONE
     Route: 042
  1566. HYDROCORTISONE [Suspect]
     Active Substance: HYDROCORTISONE
     Route: 048
  1567. HYDROCORTISONE [Suspect]
     Active Substance: HYDROCORTISONE
     Route: 048
  1568. HYDROCORTISONE [Suspect]
     Active Substance: HYDROCORTISONE
     Route: 048
  1569. HYDROCORTISONE [Suspect]
     Active Substance: HYDROCORTISONE
     Route: 048
  1570. HYDROCORTISONE [Suspect]
     Active Substance: HYDROCORTISONE
     Route: 048
  1571. HYDROCORTISONE [Suspect]
     Active Substance: HYDROCORTISONE
     Route: 048
  1572. HYDROCORTISONE [Suspect]
     Active Substance: HYDROCORTISONE
     Route: 042
  1573. HYDROCORTISONE [Suspect]
     Active Substance: HYDROCORTISONE
     Route: 048
  1574. HYDROCORTISONE [Suspect]
     Active Substance: HYDROCORTISONE
     Route: 048
  1575. HYDROCORTISONE [Suspect]
     Active Substance: HYDROCORTISONE
     Route: 048
  1576. HYDROCORTISONE [Suspect]
     Active Substance: HYDROCORTISONE
     Route: 048
  1577. HYDROCORTISONE [Suspect]
     Active Substance: HYDROCORTISONE
     Route: 048
  1578. HYDROCORTISONE [Suspect]
     Active Substance: HYDROCORTISONE
     Route: 048
  1579. HYDROCORTISONE [Suspect]
     Active Substance: HYDROCORTISONE
     Route: 065
  1580. HYDROCORTISONE [Suspect]
     Active Substance: HYDROCORTISONE
     Route: 065
  1581. HYDROCORTISONE [Suspect]
     Active Substance: HYDROCORTISONE
     Route: 048
  1582. HYDROCORTISONE [Suspect]
     Active Substance: HYDROCORTISONE
     Route: 065
  1583. HYDROCORTISONE [Suspect]
     Active Substance: HYDROCORTISONE
     Route: 065
  1584. HYDROCORTISONE [Suspect]
     Active Substance: HYDROCORTISONE
     Route: 065
  1585. HYDROCORTISONE [Suspect]
     Active Substance: HYDROCORTISONE
     Route: 065
  1586. HYDROCORTISONE [Suspect]
     Active Substance: HYDROCORTISONE
     Route: 048
  1587. HYDROCORTISONE [Suspect]
     Active Substance: HYDROCORTISONE
     Route: 048
  1588. HYDROCORTISONE [Suspect]
     Active Substance: HYDROCORTISONE
     Route: 048
  1589. HYDROCORTISONE [Suspect]
     Active Substance: HYDROCORTISONE
     Route: 048
  1590. HYDROCORTISONE [Suspect]
     Active Substance: HYDROCORTISONE
     Route: 042
  1591. HYDROCORTISONE [Suspect]
     Active Substance: HYDROCORTISONE
     Dosage: 6 MG, 1 EVERY 1 WEEKS
     Route: 048
  1592. HYDROCORTISONE [Suspect]
     Active Substance: HYDROCORTISONE
  1593. HYDROCORTISONE [Suspect]
     Active Substance: HYDROCORTISONE
     Route: 065
  1594. HYDROCORTISONE [Suspect]
     Active Substance: HYDROCORTISONE
     Route: 048
  1595. HYDROCORTISONE [Suspect]
     Active Substance: HYDROCORTISONE
     Indication: Crohn^s disease
     Route: 042
  1596. HYDROCORTISONE [Suspect]
     Active Substance: HYDROCORTISONE
     Indication: Colitis ulcerative
     Route: 048
  1597. HYDROCORTISONE [Suspect]
     Active Substance: HYDROCORTISONE
     Route: 048
  1598. HYDROCORTISONE [Suspect]
     Active Substance: HYDROCORTISONE
     Route: 065
  1599. HYDROCORTISONE [Suspect]
     Active Substance: HYDROCORTISONE
     Route: 048
  1600. HYDROCORTISONE [Suspect]
     Active Substance: HYDROCORTISONE
     Route: 048
  1601. HYDROCORTISONE [Suspect]
     Active Substance: HYDROCORTISONE
     Route: 048
  1602. HYDROCORTISONE [Suspect]
     Active Substance: HYDROCORTISONE
     Route: 065
  1603. HYDROCORTISONE [Suspect]
     Active Substance: HYDROCORTISONE
     Route: 048
  1604. HYDROCORTISONE [Suspect]
     Active Substance: HYDROCORTISONE
     Route: 048
  1605. HYDROCORTISONE [Suspect]
     Active Substance: HYDROCORTISONE
     Route: 048
  1606. HYDROCORTISONE [Suspect]
     Active Substance: HYDROCORTISONE
     Route: 048
  1607. HYDROCORTISONE [Suspect]
     Active Substance: HYDROCORTISONE
     Route: 048
  1608. HYDROCORTISONE [Suspect]
     Active Substance: HYDROCORTISONE
     Route: 065
  1609. HYDROCORTISONE [Suspect]
     Active Substance: HYDROCORTISONE
     Route: 065
  1610. HYDROCORTISONE [Suspect]
     Active Substance: HYDROCORTISONE
     Route: 048
  1611. HYDROCORTISONE [Suspect]
     Active Substance: HYDROCORTISONE
     Route: 048
  1612. HYDROCORTISONE [Suspect]
     Active Substance: HYDROCORTISONE
     Route: 048
  1613. HYDROCORTISONE [Suspect]
     Active Substance: HYDROCORTISONE
     Route: 065
  1614. HYDROCORTISONE [Suspect]
     Active Substance: HYDROCORTISONE
     Route: 042
  1615. HYDROCORTISONE [Suspect]
     Active Substance: HYDROCORTISONE
     Route: 048
  1616. HYDROCORTISONE [Suspect]
     Active Substance: HYDROCORTISONE
  1617. HYDROCORTISONE [Suspect]
     Active Substance: HYDROCORTISONE
     Route: 048
  1618. HYDROCORTISONE [Suspect]
     Active Substance: HYDROCORTISONE
     Route: 042
  1619. HYDROCORTISONE [Suspect]
     Active Substance: HYDROCORTISONE
     Route: 065
  1620. HYDROCORTISONE [Suspect]
     Active Substance: HYDROCORTISONE
     Dosage: 6 MILLIGRAM, 1 EVERY 1 WEEK
     Route: 048
  1621. HYDROCORTISONE [Suspect]
     Active Substance: HYDROCORTISONE
     Dosage: 8 MILLIGRAM, 1 EVERY 1 WEEK
     Route: 048
  1622. HYDROCORTISONE [Suspect]
     Active Substance: HYDROCORTISONE
     Dosage: 8 MILLIGRAM, 1 EVERY 1 WEEK
     Route: 048
  1623. HYDROCORTISONE [Suspect]
     Active Substance: HYDROCORTISONE
     Route: 065
  1624. HYDROCORTISONE [Suspect]
     Active Substance: HYDROCORTISONE
     Route: 065
  1625. HYDROCORTISONE [Suspect]
     Active Substance: HYDROCORTISONE
     Route: 065
  1626. HYDROCORTISONE [Suspect]
     Active Substance: HYDROCORTISONE
     Dosage: 6 MILLIGRAM, 1 EVERY 1 WEEK
     Route: 048
  1627. DAPAGLIFLOZIN [Suspect]
     Active Substance: DAPAGLIFLOZIN
     Indication: Ill-defined disorder
     Route: 065
  1628. DAPAGLIFLOZIN [Suspect]
     Active Substance: DAPAGLIFLOZIN
     Indication: Cardiac failure chronic
  1629. ENTYVIO [Suspect]
     Active Substance: VEDOLIZUMAB
     Indication: Deep vein thrombosis
     Route: 065
  1630. ENTYVIO [Suspect]
     Active Substance: VEDOLIZUMAB
     Indication: Colitis ulcerative
     Route: 048
  1631. ENTYVIO [Suspect]
     Active Substance: VEDOLIZUMAB
     Route: 042
  1632. ENTYVIO [Suspect]
     Active Substance: VEDOLIZUMAB
     Route: 042
  1633. ENTYVIO [Suspect]
     Active Substance: VEDOLIZUMAB
     Route: 042
  1634. ENTYVIO [Suspect]
     Active Substance: VEDOLIZUMAB
     Route: 048
  1635. ENTYVIO [Suspect]
     Active Substance: VEDOLIZUMAB
     Indication: Deep vein thrombosis
     Route: 065
  1636. ENTYVIO [Suspect]
     Active Substance: VEDOLIZUMAB
     Indication: Colitis ulcerative
     Route: 042
  1637. ENTYVIO [Suspect]
     Active Substance: VEDOLIZUMAB
     Indication: Product used for unknown indication
     Route: 065
  1638. ENTYVIO [Suspect]
     Active Substance: VEDOLIZUMAB
     Route: 048
  1639. ENTYVIO [Suspect]
     Active Substance: VEDOLIZUMAB
     Route: 065
  1640. ENTYVIO [Suspect]
     Active Substance: VEDOLIZUMAB
     Route: 042
  1641. ENTYVIO [Suspect]
     Active Substance: VEDOLIZUMAB
     Route: 065
  1642. ENTYVIO [Suspect]
     Active Substance: VEDOLIZUMAB
     Route: 065
  1643. ENTYVIO [Suspect]
     Active Substance: VEDOLIZUMAB
     Route: 065
  1644. ENTYVIO [Suspect]
     Active Substance: VEDOLIZUMAB
     Route: 042
  1645. ENTYVIO [Suspect]
     Active Substance: VEDOLIZUMAB
     Route: 048
  1646. ENTYVIO [Suspect]
     Active Substance: VEDOLIZUMAB
     Route: 048
  1647. ENTYVIO [Suspect]
     Active Substance: VEDOLIZUMAB
     Route: 048
  1648. ENTYVIO [Suspect]
     Active Substance: VEDOLIZUMAB
  1649. ENTYVIO [Suspect]
     Active Substance: VEDOLIZUMAB
     Route: 048
  1650. ENTYVIO [Suspect]
     Active Substance: VEDOLIZUMAB
     Route: 048
  1651. ENTYVIO [Suspect]
     Active Substance: VEDOLIZUMAB
     Route: 048
  1652. ENTYVIO [Suspect]
     Active Substance: VEDOLIZUMAB
  1653. ENTYVIO [Suspect]
     Active Substance: VEDOLIZUMAB
     Route: 048
  1654. ENTYVIO [Suspect]
     Active Substance: VEDOLIZUMAB
  1655. ENTYVIO [Suspect]
     Active Substance: VEDOLIZUMAB
  1656. ENTYVIO [Suspect]
     Active Substance: VEDOLIZUMAB
  1657. ENTYVIO [Suspect]
     Active Substance: VEDOLIZUMAB
     Route: 042
  1658. ENTYVIO [Suspect]
     Active Substance: VEDOLIZUMAB
     Route: 065
  1659. ENTYVIO [Suspect]
     Active Substance: VEDOLIZUMAB
     Route: 065
  1660. ENTYVIO [Suspect]
     Active Substance: VEDOLIZUMAB
     Route: 042
  1661. ENTYVIO [Suspect]
     Active Substance: VEDOLIZUMAB
     Route: 042
  1662. ENTYVIO [Suspect]
     Active Substance: VEDOLIZUMAB
     Route: 042
  1663. ENTYVIO [Suspect]
     Active Substance: VEDOLIZUMAB
     Route: 042
  1664. ENTYVIO [Suspect]
     Active Substance: VEDOLIZUMAB
     Route: 042
  1665. ENTYVIO [Suspect]
     Active Substance: VEDOLIZUMAB
     Route: 042
  1666. ENTYVIO [Suspect]
     Active Substance: VEDOLIZUMAB
     Route: 042
  1667. ENTYVIO [Suspect]
     Active Substance: VEDOLIZUMAB
     Route: 042
  1668. ENTYVIO [Suspect]
     Active Substance: VEDOLIZUMAB
     Route: 048
  1669. ENTYVIO [Suspect]
     Active Substance: VEDOLIZUMAB
     Route: 048
  1670. ENTYVIO [Suspect]
     Active Substance: VEDOLIZUMAB
     Route: 048
  1671. ENTYVIO [Suspect]
     Active Substance: VEDOLIZUMAB
     Route: 048
  1672. ENTYVIO [Suspect]
     Active Substance: VEDOLIZUMAB
     Indication: Deep vein thrombosis
     Route: 065
  1673. ENTYVIO [Suspect]
     Active Substance: VEDOLIZUMAB
     Indication: Colitis ulcerative
     Route: 048
  1674. ENTYVIO [Suspect]
     Active Substance: VEDOLIZUMAB
     Route: 042
  1675. ENTYVIO [Suspect]
     Active Substance: VEDOLIZUMAB
     Route: 065
  1676. ENTYVIO [Suspect]
     Active Substance: VEDOLIZUMAB
     Route: 042
  1677. ENTYVIO [Suspect]
     Active Substance: VEDOLIZUMAB
     Route: 048
  1678. ENTYVIO [Suspect]
     Active Substance: VEDOLIZUMAB
     Route: 065
  1679. ENTYVIO [Suspect]
     Active Substance: VEDOLIZUMAB
     Route: 065
  1680. ENTYVIO [Suspect]
     Active Substance: VEDOLIZUMAB
     Route: 065
  1681. ENTYVIO [Suspect]
     Active Substance: VEDOLIZUMAB
     Route: 048
  1682. EPINEPHRINE HYDROCHLORIDE [Suspect]
     Active Substance: EPINEPHRINE HYDROCHLORIDE
     Indication: Product used for unknown indication
     Route: 065
  1683. EPINEPHRINE HYDROCHLORIDE [Suspect]
     Active Substance: EPINEPHRINE HYDROCHLORIDE
     Route: 065
  1684. EPINEPHRINE HYDROCHLORIDE [Suspect]
     Active Substance: EPINEPHRINE HYDROCHLORIDE
  1685. ESCITALOPRAM [Suspect]
     Active Substance: ESCITALOPRAM OXALATE
     Indication: Product used for unknown indication
     Route: 065
  1686. ESCITALOPRAM [Suspect]
     Active Substance: ESCITALOPRAM OXALATE
  1687. ESCITALOPRAM [Suspect]
     Active Substance: ESCITALOPRAM OXALATE
     Route: 065
  1688. ESCITALOPRAM [Suspect]
     Active Substance: ESCITALOPRAM OXALATE
     Route: 065
  1689. ESCITALOPRAM [Suspect]
     Active Substance: ESCITALOPRAM OXALATE
  1690. ESCITALOPRAM [Suspect]
     Active Substance: ESCITALOPRAM OXALATE
  1691. ESCITALOPRAM [Suspect]
     Active Substance: ESCITALOPRAM OXALATE
  1692. ESCITALOPRAM [Suspect]
     Active Substance: ESCITALOPRAM OXALATE
     Route: 065
  1693. ESOMEPRAZOLE [Suspect]
     Active Substance: ESOMEPRAZOLE
     Indication: Gastritis
     Route: 065
  1694. FELODIPINE [Suspect]
     Active Substance: FELODIPINE
     Indication: Hypertension
     Route: 048
  1695. FELODIPINE [Suspect]
     Active Substance: FELODIPINE
     Route: 048
  1696. FELODIPINE [Suspect]
     Active Substance: FELODIPINE
  1697. FELODIPINE [Suspect]
     Active Substance: FELODIPINE
     Route: 048
  1698. FELODIPINE [Suspect]
     Active Substance: FELODIPINE
     Route: 048
  1699. FELODIPINE [Suspect]
     Active Substance: FELODIPINE
     Route: 048
  1700. FELODIPINE [Suspect]
     Active Substance: FELODIPINE
     Route: 048
  1701. FELODIPINE [Suspect]
     Active Substance: FELODIPINE
     Route: 048
  1702. FELODIPINE [Suspect]
     Active Substance: FELODIPINE
     Route: 048
  1703. FELODIPINE [Suspect]
     Active Substance: FELODIPINE
     Route: 048
  1704. FELODIPINE [Suspect]
     Active Substance: FELODIPINE
     Route: 048
  1705. FUROSEMIDE [Suspect]
     Active Substance: FUROSEMIDE
     Indication: Product used for unknown indication
     Route: 065
  1706. FUROSEMIDE [Suspect]
     Active Substance: FUROSEMIDE
  1707. FUROSEMIDE [Suspect]
     Active Substance: FUROSEMIDE
     Route: 065
  1708. GABAPENTIN [Suspect]
     Active Substance: GABAPENTIN
     Indication: Product used for unknown indication
     Route: 065
  1709. GABAPENTIN [Suspect]
     Active Substance: GABAPENTIN
     Route: 065
  1710. GABAPENTIN [Suspect]
     Active Substance: GABAPENTIN
     Route: 065
  1711. GABAPENTIN [Suspect]
     Active Substance: GABAPENTIN
     Route: 065
  1712. GABAPENTIN [Suspect]
     Active Substance: GABAPENTIN
     Route: 065
  1713. GABAPENTIN [Suspect]
     Active Substance: GABAPENTIN
  1714. GABAPENTIN [Suspect]
     Active Substance: GABAPENTIN
     Route: 065
  1715. HUMIRA [Suspect]
     Active Substance: ADALIMUMAB
     Indication: Crohn^s disease
     Route: 065
  1716. HUMIRA [Suspect]
     Active Substance: ADALIMUMAB
     Indication: Deep vein thrombosis
     Route: 058
  1717. HUMIRA [Suspect]
     Active Substance: ADALIMUMAB
     Indication: Colitis ulcerative
  1718. HUMIRA [Suspect]
     Active Substance: ADALIMUMAB
     Route: 048
  1719. HUMIRA [Suspect]
     Active Substance: ADALIMUMAB
  1720. HUMIRA [Suspect]
     Active Substance: ADALIMUMAB
  1721. HUMIRA [Suspect]
     Active Substance: ADALIMUMAB
     Route: 065
  1722. HUMIRA [Suspect]
     Active Substance: ADALIMUMAB
     Route: 048
  1723. HUMIRA [Suspect]
     Active Substance: ADALIMUMAB
     Route: 048
  1724. HUMIRA [Suspect]
     Active Substance: ADALIMUMAB
     Route: 065
  1725. HUMIRA [Suspect]
     Active Substance: ADALIMUMAB
     Route: 065
  1726. HUMIRA [Suspect]
     Active Substance: ADALIMUMAB
     Route: 065
  1727. HUMIRA [Suspect]
     Active Substance: ADALIMUMAB
     Route: 048
  1728. HUMIRA [Suspect]
     Active Substance: ADALIMUMAB
     Route: 048
  1729. HUMIRA [Suspect]
     Active Substance: ADALIMUMAB
     Route: 048
  1730. HUMIRA [Suspect]
     Active Substance: ADALIMUMAB
     Route: 058
  1731. HUMIRA [Suspect]
     Active Substance: ADALIMUMAB
     Route: 058
  1732. HUMIRA [Suspect]
     Active Substance: ADALIMUMAB
     Route: 058
  1733. HUMIRA [Suspect]
     Active Substance: ADALIMUMAB
     Route: 065
  1734. HUMIRA [Suspect]
     Active Substance: ADALIMUMAB
     Route: 065
  1735. HUMIRA [Suspect]
     Active Substance: ADALIMUMAB
     Route: 065
  1736. HUMIRA [Suspect]
     Active Substance: ADALIMUMAB
     Indication: Crohn^s disease
     Route: 065
  1737. HUMIRA [Suspect]
     Active Substance: ADALIMUMAB
     Indication: Deep vein thrombosis
     Route: 048
  1738. HUMIRA [Suspect]
     Active Substance: ADALIMUMAB
     Indication: Colitis ulcerative
     Route: 065
  1739. HUMIRA [Suspect]
     Active Substance: ADALIMUMAB
     Route: 065
  1740. HUMIRA [Suspect]
     Active Substance: ADALIMUMAB
     Route: 065
  1741. HUMIRA [Suspect]
     Active Substance: ADALIMUMAB
     Route: 058
  1742. HUMIRA [Suspect]
     Active Substance: ADALIMUMAB
     Route: 065
  1743. HUMIRA [Suspect]
     Active Substance: ADALIMUMAB
     Route: 065
  1744. HUMIRA [Suspect]
     Active Substance: ADALIMUMAB
     Route: 048
  1745. HUMIRA [Suspect]
     Active Substance: ADALIMUMAB
     Route: 048
  1746. HUMIRA [Suspect]
     Active Substance: ADALIMUMAB
  1747. HUMIRA [Suspect]
     Active Substance: ADALIMUMAB
  1748. HUMIRA [Suspect]
     Active Substance: ADALIMUMAB
     Route: 065
  1749. HUMIRA [Suspect]
     Active Substance: ADALIMUMAB
     Route: 048
  1750. HUMIRA [Suspect]
     Active Substance: ADALIMUMAB
     Route: 048
  1751. HYDROCORTISONE [Suspect]
     Active Substance: HYDROCORTISONE
     Indication: Colitis ulcerative
     Route: 048
  1752. HYDROCORTISONE [Suspect]
     Active Substance: HYDROCORTISONE
     Indication: Crohn^s disease
     Route: 048
  1753. HYDROCORTISONE [Suspect]
     Active Substance: HYDROCORTISONE
     Route: 048
  1754. HYDROCORTISONE [Suspect]
     Active Substance: HYDROCORTISONE
     Route: 065
  1755. HYDROCORTISONE [Suspect]
     Active Substance: HYDROCORTISONE
     Route: 065
  1756. HYDROCORTISONE [Suspect]
     Active Substance: HYDROCORTISONE
     Route: 065
  1757. HYDROCORTISONE [Suspect]
     Active Substance: HYDROCORTISONE
     Indication: Colitis ulcerative
     Route: 048
  1758. HYDROCORTISONE [Suspect]
     Active Substance: HYDROCORTISONE
     Indication: Crohn^s disease
     Route: 048
  1759. HYDROCORTISONE [Suspect]
     Active Substance: HYDROCORTISONE
     Route: 065
  1760. HYDROCORTISONE [Suspect]
     Active Substance: HYDROCORTISONE
     Route: 048
  1761. HYDROCORTISONE [Suspect]
     Active Substance: HYDROCORTISONE
     Route: 048
  1762. HYDROCORTISONE [Suspect]
     Active Substance: HYDROCORTISONE
     Route: 048
  1763. HYDROCORTISONE [Suspect]
     Active Substance: HYDROCORTISONE
     Route: 048
  1764. HYDROCORTISONE [Suspect]
     Active Substance: HYDROCORTISONE
     Route: 048
  1765. HYDROCORTISONE [Suspect]
     Active Substance: HYDROCORTISONE
     Route: 048
  1766. HYDROCORTISONE [Suspect]
     Active Substance: HYDROCORTISONE
     Route: 048
  1767. HYDROCORTISONE [Suspect]
     Active Substance: HYDROCORTISONE
     Route: 048
  1768. HYDROCORTISONE [Suspect]
     Active Substance: HYDROCORTISONE
     Route: 065
  1769. HYDROCORTISONE [Suspect]
     Active Substance: HYDROCORTISONE
     Route: 048
  1770. HYDROCORTISONE [Suspect]
     Active Substance: HYDROCORTISONE
     Route: 048
  1771. HYDROCORTISONE [Suspect]
     Active Substance: HYDROCORTISONE
     Route: 048
  1772. HYDROCORTISONE [Suspect]
     Active Substance: HYDROCORTISONE
     Route: 048
  1773. HYDROCORTISONE [Suspect]
     Active Substance: HYDROCORTISONE
     Route: 065
  1774. HYDROCORTISONE [Suspect]
     Active Substance: HYDROCORTISONE
     Route: 065
  1775. HYDROCORTISONE [Suspect]
     Active Substance: HYDROCORTISONE
     Route: 065
  1776. HYDROCORTISONE [Suspect]
     Active Substance: HYDROCORTISONE
     Route: 065
  1777. HYDROCORTISONE [Suspect]
     Active Substance: HYDROCORTISONE
     Route: 065
  1778. HYDROCORTISONE [Suspect]
     Active Substance: HYDROCORTISONE
     Route: 042
  1779. HYDROCORTISONE [Suspect]
     Active Substance: HYDROCORTISONE
     Route: 065
  1780. HYDROCORTISONE [Suspect]
     Active Substance: HYDROCORTISONE
     Route: 065
  1781. HYDROCORTISONE [Suspect]
     Active Substance: HYDROCORTISONE
  1782. HYDROCORTISONE [Suspect]
     Active Substance: HYDROCORTISONE
     Route: 048
  1783. HYDROCORTISONE [Suspect]
     Active Substance: HYDROCORTISONE
     Route: 048
  1784. HYDROCORTISONE [Suspect]
     Active Substance: HYDROCORTISONE
     Route: 048
  1785. HYDROCORTISONE [Suspect]
     Active Substance: HYDROCORTISONE
     Route: 065
  1786. HYDROCORTISONE [Suspect]
     Active Substance: HYDROCORTISONE
     Dosage: 8 DOSAGE FORM, 1 EVERY 1 WEEK
     Route: 048
  1787. HYDROCORTISONE [Suspect]
     Active Substance: HYDROCORTISONE
     Route: 048
  1788. HYDROCORTISONE [Suspect]
     Active Substance: HYDROCORTISONE
     Route: 048
  1789. HYDROCORTISONE [Suspect]
     Active Substance: HYDROCORTISONE
     Dosage: 8 DOSAGE FORM, 1 EVERY 1 WEEK
     Route: 048
  1790. HYDROCORTISONE [Suspect]
     Active Substance: HYDROCORTISONE
     Route: 065
  1791. HYDROCORTISONE [Suspect]
     Active Substance: HYDROCORTISONE
     Route: 065
  1792. HYDROCORTISONE [Suspect]
     Active Substance: HYDROCORTISONE
     Route: 065
  1793. HYDROCORTISONE [Suspect]
     Active Substance: HYDROCORTISONE
     Route: 065
  1794. HYDROCORTISONE [Suspect]
     Active Substance: HYDROCORTISONE
     Route: 065
  1795. HYDROCORTISONE [Suspect]
     Active Substance: HYDROCORTISONE
     Route: 048
  1796. HYDROCORTISONE [Suspect]
     Active Substance: HYDROCORTISONE
     Route: 048
  1797. HYDROCORTISONE [Suspect]
     Active Substance: HYDROCORTISONE
     Route: 065
  1798. HYDROCORTISONE [Suspect]
     Active Substance: HYDROCORTISONE
     Route: 065
  1799. HYDROCORTISONE [Suspect]
     Active Substance: HYDROCORTISONE
     Route: 065
  1800. HYDROCORTISONE ACETATE [Suspect]
     Active Substance: HYDROCORTISONE ACETATE
     Indication: Colitis ulcerative
     Route: 065
  1801. HYDROCORTISONE ACETATE [Suspect]
     Active Substance: HYDROCORTISONE ACETATE
     Indication: Crohn^s disease
     Route: 065
  1802. HYDROCORTISONE ACETATE [Suspect]
     Active Substance: HYDROCORTISONE ACETATE
     Route: 065
  1803. HYDROCORTISONE ACETATE [Suspect]
     Active Substance: HYDROCORTISONE ACETATE
     Route: 048
  1804. HYDROCORTISONE ACETATE [Suspect]
     Active Substance: HYDROCORTISONE ACETATE
     Route: 048
  1805. HYDROCORTISONE ACETATE [Suspect]
     Active Substance: HYDROCORTISONE ACETATE
     Route: 048
  1806. HYDROCORTISONE ACETATE [Suspect]
     Active Substance: HYDROCORTISONE ACETATE
     Route: 048
  1807. HYDROCORTISONE ACETATE [Suspect]
     Active Substance: HYDROCORTISONE ACETATE
     Route: 048
  1808. HYDROCORTISONE ACETATE [Suspect]
     Active Substance: HYDROCORTISONE ACETATE
     Route: 042
  1809. HYDROCORTISONE ACETATE [Suspect]
     Active Substance: HYDROCORTISONE ACETATE
     Route: 048
  1810. HYDROCORTISONE ACETATE [Suspect]
     Active Substance: HYDROCORTISONE ACETATE
     Route: 048
  1811. HYDROCORTISONE ACETATE [Suspect]
     Active Substance: HYDROCORTISONE ACETATE
     Route: 048
  1812. HYDROCORTISONE ACETATE [Suspect]
     Active Substance: HYDROCORTISONE ACETATE
     Route: 048
  1813. HYDROCORTISONE ACETATE [Suspect]
     Active Substance: HYDROCORTISONE ACETATE
     Route: 065
  1814. HYDROCORTISONE ACETATE [Suspect]
     Active Substance: HYDROCORTISONE ACETATE
     Route: 065
  1815. HYDROCORTISONE ACETATE [Suspect]
     Active Substance: HYDROCORTISONE ACETATE
     Route: 065
  1816. HYDROCORTISONE ACETATE [Suspect]
     Active Substance: HYDROCORTISONE ACETATE
     Route: 048
  1817. HYDROCORTISONE ACETATE [Suspect]
     Active Substance: HYDROCORTISONE ACETATE
     Route: 065
  1818. HYDROCORTISONE ACETATE [Suspect]
     Active Substance: HYDROCORTISONE ACETATE
     Route: 065
  1819. HYDROCORTISONE ACETATE [Suspect]
     Active Substance: HYDROCORTISONE ACETATE
     Indication: Colitis ulcerative
     Route: 065
  1820. HYDROCORTISONE ACETATE [Suspect]
     Active Substance: HYDROCORTISONE ACETATE
     Indication: Crohn^s disease
     Route: 042
  1821. HYDROCORTISONE ACETATE [Suspect]
     Active Substance: HYDROCORTISONE ACETATE
     Indication: Deep vein thrombosis
     Dosage: 6 MILLIGRAM, 1 EVERY 1 WEEK
     Route: 048
  1822. HYDROCORTISONE ACETATE [Suspect]
     Active Substance: HYDROCORTISONE ACETATE
     Route: 065
  1823. HYDROCORTISONE ACETATE [Suspect]
     Active Substance: HYDROCORTISONE ACETATE
     Route: 048
  1824. HYDROCORTISONE ACETATE [Suspect]
     Active Substance: HYDROCORTISONE ACETATE
     Route: 065
  1825. HYDROCORTISONE ACETATE [Suspect]
     Active Substance: HYDROCORTISONE ACETATE
     Route: 048
  1826. HYDROCORTISONE ACETATE [Suspect]
     Active Substance: HYDROCORTISONE ACETATE
     Route: 048
  1827. HYDROCORTISONE ACETATE [Suspect]
     Active Substance: HYDROCORTISONE ACETATE
     Dosage: 8 MILLIGRAM, 1 EVERY 1 WEEK
     Route: 048
  1828. HYDROCORTISONE ACETATE [Suspect]
     Active Substance: HYDROCORTISONE ACETATE
     Dosage: 8 DOSAGE FORM, 1 EVERY 1 WEEK
     Route: 048
  1829. HYDROCORTISONE ACETATE [Suspect]
     Active Substance: HYDROCORTISONE ACETATE
     Indication: Colitis ulcerative
     Route: 048
  1830. HYDROCORTISONE ACETATE [Suspect]
     Active Substance: HYDROCORTISONE ACETATE
     Indication: Crohn^s disease
     Route: 048
  1831. HYDROCORTISONE ACETATE [Suspect]
     Active Substance: HYDROCORTISONE ACETATE
     Route: 048
  1832. HYDROCORTISONE ACETATE [Suspect]
     Active Substance: HYDROCORTISONE ACETATE
     Route: 048
  1833. HYDROCORTISONE ACETATE [Suspect]
     Active Substance: HYDROCORTISONE ACETATE
     Route: 048
  1834. HYDROCORTISONE ACETATE [Suspect]
     Active Substance: HYDROCORTISONE ACETATE
     Route: 048
  1835. HYDROCORTISONE ACETATE [Suspect]
     Active Substance: HYDROCORTISONE ACETATE
     Route: 065
  1836. HYDROCORTISONE ACETATE [Suspect]
     Active Substance: HYDROCORTISONE ACETATE
     Route: 042
  1837. HYDROCORTISONE ACETATE [Suspect]
     Active Substance: HYDROCORTISONE ACETATE
     Route: 042
  1838. HYDROCORTISONE ACETATE [Suspect]
     Active Substance: HYDROCORTISONE ACETATE
     Route: 048
  1839. HYDROCORTISONE ACETATE [Suspect]
     Active Substance: HYDROCORTISONE ACETATE
     Route: 048
  1840. HYDROCORTISONE ACETATE [Suspect]
     Active Substance: HYDROCORTISONE ACETATE
     Route: 048
  1841. HYDROCORTISONE ACETATE [Suspect]
     Active Substance: HYDROCORTISONE ACETATE
     Route: 048
  1842. HYDROCORTISONE ACETATE [Suspect]
     Active Substance: HYDROCORTISONE ACETATE
     Route: 065
  1843. HYDROCORTISONE ACETATE [Suspect]
     Active Substance: HYDROCORTISONE ACETATE
     Route: 065
  1844. HYDROCORTISONE ACETATE [Suspect]
     Active Substance: HYDROCORTISONE ACETATE
     Route: 065
  1845. HYDROCORTISONE ACETATE [Suspect]
     Active Substance: HYDROCORTISONE ACETATE
     Route: 065
  1846. HYDROCORTISONE ACETATE [Suspect]
     Active Substance: HYDROCORTISONE ACETATE
     Route: 065
  1847. HYDROCORTISONE ACETATE [Suspect]
     Active Substance: HYDROCORTISONE ACETATE
     Route: 048
  1848. HYDROCORTISONE ACETATE [Suspect]
     Active Substance: HYDROCORTISONE ACETATE
     Route: 065
  1849. HYDROCORTISONE ACETATE [Suspect]
     Active Substance: HYDROCORTISONE ACETATE
     Route: 065
  1850. HYDROCORTISONE ACETATE [Suspect]
     Active Substance: HYDROCORTISONE ACETATE
     Route: 065
  1851. HYDROCORTISONE ACETATE [Suspect]
     Active Substance: HYDROCORTISONE ACETATE
     Route: 048
  1852. HYDROCORTISONE ACETATE [Suspect]
     Active Substance: HYDROCORTISONE ACETATE
     Route: 048
  1853. HYDROCORTISONE ACETATE [Suspect]
     Active Substance: HYDROCORTISONE ACETATE
     Route: 048
  1854. HYDROCORTISONE ACETATE [Suspect]
     Active Substance: HYDROCORTISONE ACETATE
     Route: 065
  1855. HYDROCORTISONE ACETATE [Suspect]
     Active Substance: HYDROCORTISONE ACETATE
     Route: 048
  1856. HYDROCORTISONE ACETATE [Suspect]
     Active Substance: HYDROCORTISONE ACETATE
     Route: 048
  1857. INFLIXIMAB [Suspect]
     Active Substance: INFLIXIMAB
     Indication: Crohn^s disease
     Route: 042
  1858. INFLIXIMAB [Suspect]
     Active Substance: INFLIXIMAB
     Indication: Colitis ulcerative
     Dosage: 1 EVERY 1 WEEKS
     Route: 042
  1859. INFLIXIMAB [Suspect]
     Active Substance: INFLIXIMAB
     Indication: Crohn^s disease
     Route: 042
  1860. INFLIXIMAB [Suspect]
     Active Substance: INFLIXIMAB
     Indication: Colitis ulcerative
     Route: 042
  1861. INFLIXIMAB [Suspect]
     Active Substance: INFLIXIMAB
     Route: 042
  1862. INFLIXIMAB [Suspect]
     Active Substance: INFLIXIMAB
     Route: 042
  1863. INFLIXIMAB [Suspect]
     Active Substance: INFLIXIMAB
     Route: 042
  1864. INFLIXIMAB [Suspect]
     Active Substance: INFLIXIMAB
     Route: 042
  1865. INFLIXIMAB [Suspect]
     Active Substance: INFLIXIMAB
     Route: 042
  1866. INFLIXIMAB [Suspect]
     Active Substance: INFLIXIMAB
     Route: 042
  1867. INFLIXIMAB [Suspect]
     Active Substance: INFLIXIMAB
     Route: 042
  1868. INFLIXIMAB [Suspect]
     Active Substance: INFLIXIMAB
     Route: 042
  1869. INFLIXIMAB [Suspect]
     Active Substance: INFLIXIMAB
     Route: 042
  1870. INFLIXIMAB [Suspect]
     Active Substance: INFLIXIMAB
     Route: 042
  1871. INFLIXIMAB [Suspect]
     Active Substance: INFLIXIMAB
     Route: 065
  1872. INFLIXIMAB [Suspect]
     Active Substance: INFLIXIMAB
     Route: 065
  1873. INFLIXIMAB [Suspect]
     Active Substance: INFLIXIMAB
     Route: 065
  1874. INFLIXIMAB [Suspect]
     Active Substance: INFLIXIMAB
     Route: 042
  1875. INFLIXIMAB [Suspect]
     Active Substance: INFLIXIMAB
     Route: 042
  1876. INFLIXIMAB [Suspect]
     Active Substance: INFLIXIMAB
     Route: 065
  1877. INFLIXIMAB [Suspect]
     Active Substance: INFLIXIMAB
     Route: 042
  1878. INFLIXIMAB [Suspect]
     Active Substance: INFLIXIMAB
     Route: 042
  1879. INFLIXIMAB [Suspect]
     Active Substance: INFLIXIMAB
     Route: 065
  1880. INFLIXIMAB [Suspect]
     Active Substance: INFLIXIMAB
     Route: 042
  1881. INFLIXIMAB [Suspect]
     Active Substance: INFLIXIMAB
     Route: 042
  1882. INFLIXIMAB [Suspect]
     Active Substance: INFLIXIMAB
     Route: 042
  1883. INFLIXIMAB [Suspect]
     Active Substance: INFLIXIMAB
     Route: 048
  1884. INFLIXIMAB [Suspect]
     Active Substance: INFLIXIMAB
     Route: 048
  1885. INFLIXIMAB [Suspect]
     Active Substance: INFLIXIMAB
     Route: 036
  1886. INFLIXIMAB [Suspect]
     Active Substance: INFLIXIMAB
     Route: 042
  1887. INFLIXIMAB [Suspect]
     Active Substance: INFLIXIMAB
     Route: 042
  1888. INFLIXIMAB [Suspect]
     Active Substance: INFLIXIMAB
     Route: 042
  1889. INFLIXIMAB [Suspect]
     Active Substance: INFLIXIMAB
     Route: 042
  1890. INFLIXIMAB [Suspect]
     Active Substance: INFLIXIMAB
     Route: 042
  1891. INFLIXIMAB [Suspect]
     Active Substance: INFLIXIMAB
     Route: 042
  1892. INFLIXIMAB [Suspect]
     Active Substance: INFLIXIMAB
     Route: 048
  1893. INFLIXIMAB [Suspect]
     Active Substance: INFLIXIMAB
     Route: 048
  1894. INFLIXIMAB [Suspect]
     Active Substance: INFLIXIMAB
     Route: 042
  1895. INFLIXIMAB [Suspect]
     Active Substance: INFLIXIMAB
     Route: 042
  1896. INFLIXIMAB [Suspect]
     Active Substance: INFLIXIMAB
     Route: 042
  1897. INFLIXIMAB [Suspect]
     Active Substance: INFLIXIMAB
     Route: 042
  1898. INFLIXIMAB [Suspect]
     Active Substance: INFLIXIMAB
     Route: 042
  1899. INFLIXIMAB [Suspect]
     Active Substance: INFLIXIMAB
     Route: 042
  1900. INFLIXIMAB [Suspect]
     Active Substance: INFLIXIMAB
     Route: 042
  1901. INFLIXIMAB [Suspect]
     Active Substance: INFLIXIMAB
     Route: 042
  1902. INFLIXIMAB [Suspect]
     Active Substance: INFLIXIMAB
     Route: 042
  1903. INFLIXIMAB [Suspect]
     Active Substance: INFLIXIMAB
     Route: 065
  1904. INFLIXIMAB [Suspect]
     Active Substance: INFLIXIMAB
     Route: 065
  1905. INFLIXIMAB [Suspect]
     Active Substance: INFLIXIMAB
     Route: 065
  1906. INFLIXIMAB [Suspect]
     Active Substance: INFLIXIMAB
     Route: 065
  1907. INFLIXIMAB [Suspect]
     Active Substance: INFLIXIMAB
     Route: 042
  1908. INFLIXIMAB [Suspect]
     Active Substance: INFLIXIMAB
     Route: 065
  1909. INFLIXIMAB [Suspect]
     Active Substance: INFLIXIMAB
     Indication: Crohn^s disease
     Route: 041
  1910. INFLIXIMAB [Suspect]
     Active Substance: INFLIXIMAB
     Indication: Colitis ulcerative
     Dosage: UNK, 2/WEEK
     Route: 041
  1911. INFLIXIMAB [Suspect]
     Active Substance: INFLIXIMAB
     Route: 041
  1912. INFLIXIMAB [Suspect]
     Active Substance: INFLIXIMAB
     Route: 041
  1913. INFLIXIMAB [Suspect]
     Active Substance: INFLIXIMAB
     Route: 041
  1914. INFLIXIMAB [Suspect]
     Active Substance: INFLIXIMAB
     Route: 041
  1915. INFLIXIMAB [Suspect]
     Active Substance: INFLIXIMAB
     Route: 041
  1916. INFLIXIMAB [Suspect]
     Active Substance: INFLIXIMAB
     Route: 041
  1917. INFLIXIMAB [Suspect]
     Active Substance: INFLIXIMAB
     Route: 041
  1918. INFLIXIMAB [Suspect]
     Active Substance: INFLIXIMAB
     Route: 041
  1919. INFLIXIMAB [Suspect]
     Active Substance: INFLIXIMAB
     Route: 065
  1920. INFLIXIMAB [Suspect]
     Active Substance: INFLIXIMAB
     Route: 042
  1921. INFLIXIMAB [Suspect]
     Active Substance: INFLIXIMAB
     Route: 065
  1922. INFLIXIMAB [Suspect]
     Active Substance: INFLIXIMAB
     Route: 065
  1923. INFLIXIMAB [Suspect]
     Active Substance: INFLIXIMAB
     Route: 065
  1924. INFLIXIMAB [Suspect]
     Active Substance: INFLIXIMAB
     Route: 042
  1925. INFLIXIMAB [Suspect]
     Active Substance: INFLIXIMAB
     Route: 065
  1926. INFLIXIMAB [Suspect]
     Active Substance: INFLIXIMAB
     Route: 042
  1927. INFLIXIMAB [Suspect]
     Active Substance: INFLIXIMAB
     Route: 042
  1928. INFLIXIMAB [Suspect]
     Active Substance: INFLIXIMAB
     Route: 042
  1929. INFLIXIMAB [Suspect]
     Active Substance: INFLIXIMAB
     Route: 042
  1930. INFLIXIMAB [Suspect]
     Active Substance: INFLIXIMAB
     Route: 042
  1931. INFLIXIMAB [Suspect]
     Active Substance: INFLIXIMAB
     Route: 065
  1932. INFLIXIMAB [Suspect]
     Active Substance: INFLIXIMAB
     Route: 042
  1933. INFLIXIMAB [Suspect]
     Active Substance: INFLIXIMAB
     Route: 042
  1934. INFLIXIMAB [Suspect]
     Active Substance: INFLIXIMAB
     Route: 042
  1935. INFLIXIMAB [Suspect]
     Active Substance: INFLIXIMAB
     Route: 042
  1936. INFLIXIMAB [Suspect]
     Active Substance: INFLIXIMAB
     Route: 042
  1937. INFLIXIMAB [Suspect]
     Active Substance: INFLIXIMAB
     Route: 065
  1938. INFLIXIMAB [Suspect]
     Active Substance: INFLIXIMAB
     Dosage: UNK UNK, 1/WEEK
     Route: 042
  1939. INFLIXIMAB [Suspect]
     Active Substance: INFLIXIMAB
     Route: 041
  1940. INFLIXIMAB [Suspect]
     Active Substance: INFLIXIMAB
     Route: 041
  1941. INFLIXIMAB [Suspect]
     Active Substance: INFLIXIMAB
     Route: 041
  1942. INFLIXIMAB [Suspect]
     Active Substance: INFLIXIMAB
     Route: 041
  1943. INFLIXIMAB [Suspect]
     Active Substance: INFLIXIMAB
     Dosage: 1 EVERY 2 WEEKS
     Route: 041
  1944. INFLIXIMAB [Suspect]
     Active Substance: INFLIXIMAB
     Route: 048
  1945. INFLIXIMAB [Suspect]
     Active Substance: INFLIXIMAB
     Route: 041
  1946. INFLIXIMAB [Suspect]
     Active Substance: INFLIXIMAB
     Route: 041
  1947. INFLIXIMAB [Suspect]
     Active Substance: INFLIXIMAB
     Route: 041
  1948. INFLIXIMAB [Suspect]
     Active Substance: INFLIXIMAB
     Route: 041
  1949. INFLIXIMAB [Suspect]
     Active Substance: INFLIXIMAB
     Route: 041
  1950. INFLIXIMAB [Suspect]
     Active Substance: INFLIXIMAB
     Route: 042
  1951. INFLIXIMAB [Suspect]
     Active Substance: INFLIXIMAB
     Route: 042
  1952. INFLIXIMAB [Suspect]
     Active Substance: INFLIXIMAB
     Route: 042
  1953. INFLIXIMAB [Suspect]
     Active Substance: INFLIXIMAB
     Route: 042
  1954. INFLIXIMAB [Suspect]
     Active Substance: INFLIXIMAB
     Route: 042
  1955. INFLIXIMAB [Suspect]
     Active Substance: INFLIXIMAB
     Route: 042
  1956. INFLIXIMAB [Suspect]
     Active Substance: INFLIXIMAB
     Dosage: 1 EVERY 2 WEEKS
     Route: 042
  1957. INFLIXIMAB [Suspect]
     Active Substance: INFLIXIMAB
     Route: 042
  1958. INFLIXIMAB [Suspect]
     Active Substance: INFLIXIMAB
     Indication: Crohn^s disease
     Route: 042
  1959. INFLIXIMAB [Suspect]
     Active Substance: INFLIXIMAB
     Indication: Colitis ulcerative
     Route: 042
  1960. INFLIXIMAB [Suspect]
     Active Substance: INFLIXIMAB
     Route: 042
  1961. INFLIXIMAB [Suspect]
     Active Substance: INFLIXIMAB
     Route: 042
  1962. INFLIXIMAB [Suspect]
     Active Substance: INFLIXIMAB
     Route: 042
  1963. INFLIXIMAB [Suspect]
     Active Substance: INFLIXIMAB
     Route: 042
  1964. INFLIXIMAB [Suspect]
     Active Substance: INFLIXIMAB
     Route: 042
  1965. INFLIXIMAB [Suspect]
     Active Substance: INFLIXIMAB
     Route: 042
  1966. INFLIXIMAB [Suspect]
     Active Substance: INFLIXIMAB
     Route: 042
  1967. INFLIXIMAB [Suspect]
     Active Substance: INFLIXIMAB
     Route: 042
  1968. INFLIXIMAB [Suspect]
     Active Substance: INFLIXIMAB
     Route: 042
  1969. INFLIXIMAB [Suspect]
     Active Substance: INFLIXIMAB
     Route: 042
  1970. INFLIXIMAB [Suspect]
     Active Substance: INFLIXIMAB
  1971. INFLIXIMAB [Suspect]
     Active Substance: INFLIXIMAB
     Route: 042
  1972. INFLIXIMAB [Suspect]
     Active Substance: INFLIXIMAB
     Route: 042
  1973. INFLIXIMAB [Suspect]
     Active Substance: INFLIXIMAB
     Route: 042
  1974. INFLIXIMAB [Suspect]
     Active Substance: INFLIXIMAB
     Route: 042
  1975. INFLIXIMAB [Suspect]
     Active Substance: INFLIXIMAB
     Route: 042
  1976. INFLIXIMAB [Suspect]
     Active Substance: INFLIXIMAB
     Route: 042
  1977. INFLIXIMAB [Suspect]
     Active Substance: INFLIXIMAB
     Route: 042
  1978. INFLIXIMAB [Suspect]
     Active Substance: INFLIXIMAB
     Route: 042
  1979. INFLIXIMAB [Suspect]
     Active Substance: INFLIXIMAB
     Route: 042
  1980. INFLIXIMAB [Suspect]
     Active Substance: INFLIXIMAB
     Route: 048
  1981. INFLIXIMAB [Suspect]
     Active Substance: INFLIXIMAB
     Route: 042
  1982. INFLIXIMAB [Suspect]
     Active Substance: INFLIXIMAB
     Route: 042
  1983. INFLIXIMAB [Suspect]
     Active Substance: INFLIXIMAB
     Route: 048
  1984. INFLIXIMAB [Suspect]
     Active Substance: INFLIXIMAB
     Route: 042
  1985. INFLIXIMAB [Suspect]
     Active Substance: INFLIXIMAB
     Route: 065
  1986. INFLIXIMAB [Suspect]
     Active Substance: INFLIXIMAB
     Route: 065
  1987. INFLIXIMAB [Suspect]
     Active Substance: INFLIXIMAB
     Route: 065
  1988. INFLIXIMAB [Suspect]
     Active Substance: INFLIXIMAB
     Route: 065
  1989. INFLIXIMAB [Suspect]
     Active Substance: INFLIXIMAB
     Route: 065
  1990. INFLIXIMAB [Suspect]
     Active Substance: INFLIXIMAB
     Route: 042
  1991. INFLIXIMAB [Suspect]
     Active Substance: INFLIXIMAB
     Route: 065
  1992. INFLIXIMAB [Suspect]
     Active Substance: INFLIXIMAB
     Route: 065
  1993. INFLIXIMAB [Suspect]
     Active Substance: INFLIXIMAB
     Route: 065
  1994. INFLIXIMAB [Suspect]
     Active Substance: INFLIXIMAB
     Route: 042
  1995. INFLIXIMAB [Suspect]
     Active Substance: INFLIXIMAB
     Route: 042
  1996. INFLIXIMAB [Suspect]
     Active Substance: INFLIXIMAB
     Route: 042
  1997. INFLIXIMAB [Suspect]
     Active Substance: INFLIXIMAB
     Route: 042
  1998. INFLIXIMAB [Suspect]
     Active Substance: INFLIXIMAB
     Route: 042
  1999. INFLIXIMAB [Suspect]
     Active Substance: INFLIXIMAB
     Route: 041
  2000. INFLIXIMAB [Suspect]
     Active Substance: INFLIXIMAB
  2001. INFLIXIMAB [Suspect]
     Active Substance: INFLIXIMAB
  2002. INFLIXIMAB [Suspect]
     Active Substance: INFLIXIMAB
  2003. INFLIXIMAB [Suspect]
     Active Substance: INFLIXIMAB
  2004. INFLIXIMAB [Suspect]
     Active Substance: INFLIXIMAB
  2005. INFLIXIMAB [Suspect]
     Active Substance: INFLIXIMAB
  2006. INFLIXIMAB [Suspect]
     Active Substance: INFLIXIMAB
  2007. INFLIXIMAB [Suspect]
     Active Substance: INFLIXIMAB
  2008. LEVOTHYROXINE SODIUM [Suspect]
     Active Substance: LEVOTHYROXINE SODIUM
     Indication: Product used for unknown indication
     Route: 065
  2009. LEVOTHYROXINE SODIUM [Suspect]
     Active Substance: LEVOTHYROXINE SODIUM
     Route: 065
  2010. LEVOTHYROXINE SODIUM [Suspect]
     Active Substance: LEVOTHYROXINE SODIUM
     Route: 065
  2011. LEVOTHYROXINE SODIUM [Suspect]
     Active Substance: LEVOTHYROXINE SODIUM
     Route: 065
  2012. MEBEVERINE HYDROCHLORIDE [Suspect]
     Active Substance: MEBEVERINE HYDROCHLORIDE
     Indication: Product used for unknown indication
     Route: 065
  2013. MEBEVERINE HYDROCHLORIDE [Suspect]
     Active Substance: MEBEVERINE HYDROCHLORIDE
     Route: 065
  2014. MEBEVERINE HYDROCHLORIDE [Suspect]
     Active Substance: MEBEVERINE HYDROCHLORIDE
     Route: 065
  2015. MEBEVERINE HYDROCHLORIDE [Suspect]
     Active Substance: MEBEVERINE HYDROCHLORIDE
     Route: 065
  2016. MEBEVERINE HYDROCHLORIDE [Suspect]
     Active Substance: MEBEVERINE HYDROCHLORIDE
  2017. MEBEVERINE HYDROCHLORIDE [Suspect]
     Active Substance: MEBEVERINE HYDROCHLORIDE
  2018. MEBEVERINE HYDROCHLORIDE [Suspect]
     Active Substance: MEBEVERINE HYDROCHLORIDE
  2019. MEBEVERINE HYDROCHLORIDE [Suspect]
     Active Substance: MEBEVERINE HYDROCHLORIDE
  2020. MEBEVERINE HYDROCHLORIDE [Suspect]
     Active Substance: MEBEVERINE HYDROCHLORIDE
  2021. MEBEVERINE HYDROCHLORIDE [Suspect]
     Active Substance: MEBEVERINE HYDROCHLORIDE
     Route: 065
  2022. MEBEVERINE HYDROCHLORIDE [Suspect]
     Active Substance: MEBEVERINE HYDROCHLORIDE
     Route: 065
  2023. MEBEVERINE HYDROCHLORIDE [Suspect]
     Active Substance: MEBEVERINE HYDROCHLORIDE
     Route: 065
  2024. MESALAMINE [Suspect]
     Active Substance: MESALAMINE
     Indication: Colitis ulcerative
     Route: 065
  2025. MESALAMINE [Suspect]
     Active Substance: MESALAMINE
     Route: 065
  2026. MESALAMINE [Suspect]
     Active Substance: MESALAMINE
     Route: 065
  2027. MESALAMINE [Suspect]
     Active Substance: MESALAMINE
     Route: 048
  2028. MESALAMINE [Suspect]
     Active Substance: MESALAMINE
     Route: 065
  2029. MESALAMINE [Suspect]
     Active Substance: MESALAMINE
     Route: 048
  2030. MESALAMINE [Suspect]
     Active Substance: MESALAMINE
     Route: 065
  2031. MESALAMINE [Suspect]
     Active Substance: MESALAMINE
     Route: 065
  2032. MESALAMINE [Suspect]
     Active Substance: MESALAMINE
     Route: 048
  2033. MESALAMINE [Suspect]
     Active Substance: MESALAMINE
     Route: 065
  2034. MESALAMINE [Suspect]
     Active Substance: MESALAMINE
     Route: 065
  2035. MESALAMINE [Suspect]
     Active Substance: MESALAMINE
     Route: 048
  2036. MESALAMINE [Suspect]
     Active Substance: MESALAMINE
     Route: 065
  2037. MESALAMINE [Suspect]
     Active Substance: MESALAMINE
     Route: 065
  2038. MESALAMINE [Suspect]
     Active Substance: MESALAMINE
     Route: 065
  2039. MESALAMINE [Suspect]
     Active Substance: MESALAMINE
     Route: 065
  2040. MESALAMINE [Suspect]
     Active Substance: MESALAMINE
     Route: 065
  2041. MESALAMINE [Suspect]
     Active Substance: MESALAMINE
     Route: 065
  2042. MESALAMINE [Suspect]
     Active Substance: MESALAMINE
     Route: 065
  2043. MESALAMINE [Suspect]
     Active Substance: MESALAMINE
     Route: 048
  2044. MESALAMINE [Suspect]
     Active Substance: MESALAMINE
     Route: 065
  2045. MESALAMINE [Suspect]
     Active Substance: MESALAMINE
     Route: 065
  2046. MESALAMINE [Suspect]
     Active Substance: MESALAMINE
     Route: 048
  2047. MESALAMINE [Suspect]
     Active Substance: MESALAMINE
     Route: 048
  2048. MESALAMINE [Suspect]
     Active Substance: MESALAMINE
     Route: 065
  2049. MESALAMINE [Suspect]
     Active Substance: MESALAMINE
     Route: 048
  2050. MESALAMINE [Suspect]
     Active Substance: MESALAMINE
     Route: 048
  2051. MESALAMINE [Suspect]
     Active Substance: MESALAMINE
     Route: 065
  2052. MESALAMINE [Suspect]
     Active Substance: MESALAMINE
     Route: 065
  2053. MESALAMINE [Suspect]
     Active Substance: MESALAMINE
     Route: 065
  2054. MESALAMINE [Suspect]
     Active Substance: MESALAMINE
     Route: 065
  2055. MESALAMINE [Suspect]
     Active Substance: MESALAMINE
     Route: 065
  2056. MESALAMINE [Suspect]
     Active Substance: MESALAMINE
     Route: 065
  2057. MESALAMINE [Suspect]
     Active Substance: MESALAMINE
     Route: 065
  2058. MESALAMINE [Suspect]
     Active Substance: MESALAMINE
     Route: 065
  2059. MESALAMINE [Suspect]
     Active Substance: MESALAMINE
     Route: 065
  2060. MESALAMINE [Suspect]
     Active Substance: MESALAMINE
     Route: 065
  2061. MESALAMINE [Suspect]
     Active Substance: MESALAMINE
     Route: 065
  2062. MESALAMINE [Suspect]
     Active Substance: MESALAMINE
     Route: 065
  2063. MESALAMINE [Suspect]
     Active Substance: MESALAMINE
     Route: 065
  2064. MESALAMINE [Suspect]
     Active Substance: MESALAMINE
     Route: 048
  2065. MESALAMINE [Suspect]
     Active Substance: MESALAMINE
     Route: 065
  2066. MESALAMINE [Suspect]
     Active Substance: MESALAMINE
     Route: 065
  2067. MESALAMINE [Suspect]
     Active Substance: MESALAMINE
     Route: 065
  2068. MESALAMINE [Suspect]
     Active Substance: MESALAMINE
     Route: 065
  2069. MESALAMINE [Suspect]
     Active Substance: MESALAMINE
     Route: 065
  2070. MESALAMINE [Suspect]
     Active Substance: MESALAMINE
     Indication: Colitis ulcerative
     Route: 065
  2071. MESALAMINE [Suspect]
     Active Substance: MESALAMINE
     Route: 065
  2072. MESALAMINE [Suspect]
     Active Substance: MESALAMINE
     Indication: Colitis ulcerative
     Route: 065
  2073. MESALAMINE [Suspect]
     Active Substance: MESALAMINE
     Route: 065
  2074. MESALAMINE [Suspect]
     Active Substance: MESALAMINE
     Indication: Colitis ulcerative
     Route: 048
  2075. MESALAMINE [Suspect]
     Active Substance: MESALAMINE
     Indication: Deep vein thrombosis
     Route: 048
  2076. MESALAMINE [Suspect]
     Active Substance: MESALAMINE
     Route: 065
  2077. MESALAMINE [Suspect]
     Active Substance: MESALAMINE
     Route: 065
  2078. MESALAMINE [Suspect]
     Active Substance: MESALAMINE
     Route: 048
  2079. MESALAMINE [Suspect]
     Active Substance: MESALAMINE
     Route: 065
  2080. MESALAMINE [Suspect]
     Active Substance: MESALAMINE
     Route: 048
  2081. MESALAMINE [Suspect]
     Active Substance: MESALAMINE
     Route: 065
  2082. MESALAMINE [Suspect]
     Active Substance: MESALAMINE
     Route: 065
  2083. MESALAMINE [Suspect]
     Active Substance: MESALAMINE
     Route: 065
  2084. MESALAMINE [Suspect]
     Active Substance: MESALAMINE
     Route: 065
  2085. MESALAMINE [Suspect]
     Active Substance: MESALAMINE
     Route: 065
  2086. MESALAMINE [Suspect]
     Active Substance: MESALAMINE
     Route: 048
  2087. MESALAMINE [Suspect]
     Active Substance: MESALAMINE
     Route: 048
  2088. MESALAMINE [Suspect]
     Active Substance: MESALAMINE
     Route: 065
  2089. MESALAMINE [Suspect]
     Active Substance: MESALAMINE
     Route: 065
  2090. MESALAMINE [Suspect]
     Active Substance: MESALAMINE
     Route: 065
  2091. MESALAMINE [Suspect]
     Active Substance: MESALAMINE
     Route: 065
  2092. MESALAMINE [Suspect]
     Active Substance: MESALAMINE
     Route: 048
  2093. MESALAMINE [Suspect]
     Active Substance: MESALAMINE
     Route: 048
  2094. MESALAMINE [Suspect]
     Active Substance: MESALAMINE
     Route: 048
  2095. MESALAMINE [Suspect]
     Active Substance: MESALAMINE
     Indication: Colitis ulcerative
     Route: 065
  2096. MESALAMINE [Suspect]
     Active Substance: MESALAMINE
     Route: 048
  2097. MESALAMINE [Suspect]
     Active Substance: MESALAMINE
     Route: 048
  2098. MESALAMINE [Suspect]
     Active Substance: MESALAMINE
     Route: 065
  2099. MESALAMINE [Suspect]
     Active Substance: MESALAMINE
     Dosage: 2.4 G, 1 EVERY 1 MONTH
     Route: 065
  2100. MESALAMINE [Suspect]
     Active Substance: MESALAMINE
     Route: 065
  2101. MESALAMINE [Suspect]
     Active Substance: MESALAMINE
     Route: 065
  2102. MESALAMINE [Suspect]
     Active Substance: MESALAMINE
     Route: 065
  2103. MESALAMINE [Suspect]
     Active Substance: MESALAMINE
     Route: 065
  2104. MESALAMINE [Suspect]
     Active Substance: MESALAMINE
     Route: 065
  2105. MESALAMINE [Suspect]
     Active Substance: MESALAMINE
     Route: 048
  2106. MESALAMINE [Suspect]
     Active Substance: MESALAMINE
     Indication: Colitis ulcerative
     Route: 065
  2107. MESALAMINE [Suspect]
     Active Substance: MESALAMINE
     Indication: Deep vein thrombosis
     Route: 065
  2108. MESALAMINE [Suspect]
     Active Substance: MESALAMINE
     Route: 065
  2109. MESALAMINE [Suspect]
     Active Substance: MESALAMINE
     Route: 048
  2110. MESALAMINE [Suspect]
     Active Substance: MESALAMINE
     Route: 065
  2111. MESALAMINE [Suspect]
     Active Substance: MESALAMINE
     Route: 065
  2112. MESALAMINE [Suspect]
     Active Substance: MESALAMINE
     Route: 048
  2113. MESALAMINE [Suspect]
     Active Substance: MESALAMINE
     Route: 065
  2114. MESALAMINE [Suspect]
     Active Substance: MESALAMINE
     Route: 048
  2115. MESALAMINE [Suspect]
     Active Substance: MESALAMINE
     Route: 065
  2116. MESALAMINE [Suspect]
     Active Substance: MESALAMINE
     Route: 065
  2117. MESALAMINE [Suspect]
     Active Substance: MESALAMINE
     Route: 065
  2118. MESALAMINE [Suspect]
     Active Substance: MESALAMINE
     Route: 065
  2119. MESALAMINE [Suspect]
     Active Substance: MESALAMINE
     Route: 065
  2120. MESALAMINE [Suspect]
     Active Substance: MESALAMINE
     Route: 065
  2121. MESALAMINE [Suspect]
     Active Substance: MESALAMINE
     Route: 065
  2122. MESALAMINE [Suspect]
     Active Substance: MESALAMINE
     Route: 065
  2123. MESALAMINE [Suspect]
     Active Substance: MESALAMINE
     Route: 065
  2124. MESALAMINE [Suspect]
     Active Substance: MESALAMINE
     Route: 065
  2125. MESALAMINE [Suspect]
     Active Substance: MESALAMINE
     Route: 048
  2126. MESALAMINE [Suspect]
     Active Substance: MESALAMINE
     Route: 065
  2127. MESALAMINE [Suspect]
     Active Substance: MESALAMINE
     Route: 048
  2128. MESALAMINE [Suspect]
     Active Substance: MESALAMINE
     Route: 065
  2129. MESALAMINE [Suspect]
     Active Substance: MESALAMINE
     Route: 048
  2130. MESALAMINE [Suspect]
     Active Substance: MESALAMINE
     Route: 048
  2131. MESALAMINE [Suspect]
     Active Substance: MESALAMINE
     Route: 065
  2132. MESALAMINE [Suspect]
     Active Substance: MESALAMINE
     Route: 065
  2133. MESALAMINE [Suspect]
     Active Substance: MESALAMINE
     Route: 065
  2134. MESALAMINE [Suspect]
     Active Substance: MESALAMINE
     Route: 065
  2135. MESALAMINE [Suspect]
     Active Substance: MESALAMINE
  2136. MESALAMINE [Suspect]
     Active Substance: MESALAMINE
  2137. MESALAMINE [Suspect]
     Active Substance: MESALAMINE
     Route: 048
  2138. MESALAMINE [Suspect]
     Active Substance: MESALAMINE
  2139. MESALAMINE [Suspect]
     Active Substance: MESALAMINE
  2140. MESALAMINE [Suspect]
     Active Substance: MESALAMINE
  2141. MESALAMINE [Suspect]
     Active Substance: MESALAMINE
  2142. MESALAMINE [Suspect]
     Active Substance: MESALAMINE
  2143. MESALAMINE [Suspect]
     Active Substance: MESALAMINE
  2144. MESALAMINE [Suspect]
     Active Substance: MESALAMINE
  2145. MESALAMINE [Suspect]
     Active Substance: MESALAMINE
  2146. MESALAMINE [Suspect]
     Active Substance: MESALAMINE
  2147. MESALAMINE [Suspect]
     Active Substance: MESALAMINE
  2148. MESALAMINE [Suspect]
     Active Substance: MESALAMINE
  2149. MESALAMINE [Suspect]
     Active Substance: MESALAMINE
     Indication: Colitis ulcerative
     Route: 065
  2150. MESALAMINE [Suspect]
     Active Substance: MESALAMINE
     Route: 065
  2151. MESALAMINE [Suspect]
     Active Substance: MESALAMINE
     Route: 065
  2152. MESALAMINE [Suspect]
     Active Substance: MESALAMINE
     Route: 065
  2153. MESALAMINE [Suspect]
     Active Substance: MESALAMINE
     Route: 065
  2154. MESALAMINE [Suspect]
     Active Substance: MESALAMINE
     Route: 048
  2155. MESALAMINE [Suspect]
     Active Substance: MESALAMINE
     Route: 065
  2156. MESALAMINE [Suspect]
     Active Substance: MESALAMINE
     Route: 048
  2157. MESALAMINE [Suspect]
     Active Substance: MESALAMINE
     Route: 065
  2158. MESALAMINE [Suspect]
     Active Substance: MESALAMINE
     Route: 065
  2159. MESALAMINE [Suspect]
     Active Substance: MESALAMINE
     Route: 065
  2160. MESALAMINE [Suspect]
     Active Substance: MESALAMINE
     Route: 048
  2161. MESALAMINE [Suspect]
     Active Substance: MESALAMINE
     Route: 065
  2162. MESALAMINE [Suspect]
     Active Substance: MESALAMINE
     Route: 048
  2163. MESALAMINE [Suspect]
     Active Substance: MESALAMINE
     Route: 048
  2164. MESALAMINE [Suspect]
     Active Substance: MESALAMINE
     Route: 048
  2165. MESALAMINE [Suspect]
     Active Substance: MESALAMINE
     Route: 065
  2166. MESALAMINE [Suspect]
     Active Substance: MESALAMINE
     Route: 048
  2167. MESALAMINE [Suspect]
     Active Substance: MESALAMINE
     Indication: Colitis ulcerative
     Route: 065
  2168. MESALAMINE [Suspect]
     Active Substance: MESALAMINE
     Indication: Colitis ulcerative
     Route: 065
  2169. MESALAMINE [Suspect]
     Active Substance: MESALAMINE
     Route: 048
  2170. METFORMIN [Suspect]
     Active Substance: METFORMIN HYDROCHLORIDE
     Indication: Product used for unknown indication
     Route: 065
  2171. METFORMIN [Suspect]
     Active Substance: METFORMIN HYDROCHLORIDE
     Route: 065
  2172. METFORMIN [Suspect]
     Active Substance: METFORMIN HYDROCHLORIDE
     Route: 065
  2173. METFORMIN [Suspect]
     Active Substance: METFORMIN HYDROCHLORIDE
     Route: 065
  2174. METFORMIN [Suspect]
     Active Substance: METFORMIN HYDROCHLORIDE
  2175. METFORMIN [Suspect]
     Active Substance: METFORMIN HYDROCHLORIDE
     Route: 065
  2176. MESALAMINE [Suspect]
     Active Substance: MESALAMINE
     Indication: Colitis ulcerative
     Route: 065
  2177. MESALAMINE [Suspect]
     Active Substance: MESALAMINE
     Route: 065
  2178. MESALAMINE [Suspect]
     Active Substance: MESALAMINE
     Route: 065
  2179. MESALAMINE [Suspect]
     Active Substance: MESALAMINE
     Route: 048
  2180. MESALAMINE [Suspect]
     Active Substance: MESALAMINE
     Route: 065
  2181. MESALAMINE [Suspect]
     Active Substance: MESALAMINE
     Route: 065
  2182. MESALAMINE [Suspect]
     Active Substance: MESALAMINE
     Route: 042
  2183. MESALAMINE [Suspect]
     Active Substance: MESALAMINE
     Route: 065
  2184. MESALAMINE [Suspect]
     Active Substance: MESALAMINE
     Route: 048
  2185. MESALAMINE [Suspect]
     Active Substance: MESALAMINE
     Route: 048
  2186. MESALAMINE [Suspect]
     Active Substance: MESALAMINE
     Route: 065
  2187. MESALAMINE [Suspect]
     Active Substance: MESALAMINE
     Route: 065
  2188. MESALAMINE [Suspect]
     Active Substance: MESALAMINE
     Indication: Colitis ulcerative
     Route: 065
  2189. MESALAMINE [Suspect]
     Active Substance: MESALAMINE
     Route: 065
  2190. MESALAMINE [Suspect]
     Active Substance: MESALAMINE
     Route: 065
  2191. MESALAMINE [Suspect]
     Active Substance: MESALAMINE
     Route: 048
  2192. MESALAMINE [Suspect]
     Active Substance: MESALAMINE
     Route: 048
  2193. MESALAMINE [Suspect]
     Active Substance: MESALAMINE
     Route: 065
  2194. MESALAMINE [Suspect]
     Active Substance: MESALAMINE
     Route: 042
  2195. MESALAMINE [Suspect]
     Active Substance: MESALAMINE
     Route: 065
  2196. MESALAMINE [Suspect]
     Active Substance: MESALAMINE
     Route: 065
  2197. MESALAMINE [Suspect]
     Active Substance: MESALAMINE
     Route: 065
  2198. MESALAMINE [Suspect]
     Active Substance: MESALAMINE
     Route: 048
  2199. MESALAMINE [Suspect]
     Active Substance: MESALAMINE
     Route: 065
  2200. OMEPRAZOLE [Suspect]
     Active Substance: OMEPRAZOLE
     Indication: Gastritis
     Route: 065
  2201. OMEPRAZOLE [Suspect]
     Active Substance: OMEPRAZOLE
     Indication: Ill-defined disorder
     Route: 065
  2202. OMEPRAZOLE [Suspect]
     Active Substance: OMEPRAZOLE
  2203. OMEPRAZOLE [Suspect]
     Active Substance: OMEPRAZOLE
     Route: 065
  2204. OXYCODONE [Suspect]
     Active Substance: OXYCODONE
     Indication: Product used for unknown indication
     Route: 065
  2205. OXYCODONE [Suspect]
     Active Substance: OXYCODONE
  2206. OXYCODONE [Suspect]
     Active Substance: OXYCODONE
     Route: 065
  2207. OXYCODONE [Suspect]
     Active Substance: OXYCODONE
     Route: 065
  2208. OXYCODONE [Suspect]
     Active Substance: OXYCODONE
     Route: 065
  2209. OXYCODONE [Suspect]
     Active Substance: OXYCODONE
     Route: 065

REACTIONS (55)
  - Abdominal discomfort [Not Recovered/Not Resolved]
  - Alcohol poisoning [Not Recovered/Not Resolved]
  - Bronchiectasis [Not Recovered/Not Resolved]
  - Burns second degree [Not Recovered/Not Resolved]
  - Cardiac murmur [Not Recovered/Not Resolved]
  - Catarrh [Not Recovered/Not Resolved]
  - Colitis ulcerative [Not Recovered/Not Resolved]
  - Condition aggravated [Not Recovered/Not Resolved]
  - Confusional state [Not Recovered/Not Resolved]
  - Deep vein thrombosis [Not Recovered/Not Resolved]
  - Dysgeusia [Not Recovered/Not Resolved]
  - Fatigue [Not Recovered/Not Resolved]
  - Frequent bowel movements [Not Recovered/Not Resolved]
  - Gingival pain [Not Recovered/Not Resolved]
  - Hypopnoea [Not Recovered/Not Resolved]
  - Nightmare [Not Recovered/Not Resolved]
  - Parosmia [Not Recovered/Not Resolved]
  - Pain in extremity [Not Recovered/Not Resolved]
  - Somnolence [Not Recovered/Not Resolved]
  - Steroid dependence [Not Recovered/Not Resolved]
  - Stress [Not Recovered/Not Resolved]
  - Swollen tongue [Not Recovered/Not Resolved]
  - Tubulointerstitial nephritis [Not Recovered/Not Resolved]
  - Arthritis [Not Recovered/Not Resolved]
  - Weight decreased [Not Recovered/Not Resolved]
  - Pain [Not Recovered/Not Resolved]
  - Palpitations [Not Recovered/Not Resolved]
  - Adverse drug reaction [Not Recovered/Not Resolved]
  - COVID-19 [Not Recovered/Not Resolved]
  - Haematochezia [Not Recovered/Not Resolved]
  - Rectal haemorrhage [Not Recovered/Not Resolved]
  - Rhinitis [Not Recovered/Not Resolved]
  - Cerebrovascular accident [Not Recovered/Not Resolved]
  - Depression [Not Recovered/Not Resolved]
  - Eczema [Not Recovered/Not Resolved]
  - Headache [Not Recovered/Not Resolved]
  - Migraine [Not Recovered/Not Resolved]
  - Pyrexia [Not Recovered/Not Resolved]
  - Pulmonary embolism [Not Recovered/Not Resolved]
  - Rash [Not Recovered/Not Resolved]
  - Systemic lupus erythematosus [Not Recovered/Not Resolved]
  - Tinnitus [Not Recovered/Not Resolved]
  - Vertigo [Not Recovered/Not Resolved]
  - Impaired quality of life [Not Recovered/Not Resolved]
  - Impaired work ability [Not Recovered/Not Resolved]
  - Loss of personal independence in daily activities [Not Recovered/Not Resolved]
  - Accidental overdose [Not Recovered/Not Resolved]
  - Drug ineffective [Not Recovered/Not Resolved]
  - Inappropriate schedule of product administration [Not Recovered/Not Resolved]
  - Intentional product use issue [Not Recovered/Not Resolved]
  - Medication error [Not Recovered/Not Resolved]
  - Off label use [Not Recovered/Not Resolved]
  - Product use in unapproved indication [Not Recovered/Not Resolved]
  - Intentional product use issue [Unknown]
  - Intentional product use issue [Unknown]
